FAERS Safety Report 22900715 (Version 7)
Quarter: 2024Q4

REPORT INFORMATION
  Report Type: Spontaneous
  Country: CA (occurrence: CA)
  Receive Date: 20230904
  Receipt Date: 20241209
  Transmission Date: 20250115
  Serious: Yes (Death, Life-Threatening, Hospitalization, Disabling, Congenital Anomaly, Other)
  Sender: SANDOZ
  Company Number: CA-002147023-NVSC2021CA315945

PATIENT
  Age: 80 Year
  Sex: Male
  Weight: 69 kg

DRUGS (1838)
  1. ALLOPURINOL [Suspect]
     Active Substance: ALLOPURINOL
     Dosage: 1 DOSAGE FORM, QD
     Route: 048
  2. ALLOPURINOL [Suspect]
     Active Substance: ALLOPURINOL
     Indication: Off label use
     Dosage: 1 DOSAGE FORM, QD (1 EVERY 1 DAYS)
     Route: 048
  3. ALLOPURINOL [Suspect]
     Active Substance: ALLOPURINOL
     Dosage: 1 DOSAGE FORM
     Route: 048
  4. ALLOPURINOL [Suspect]
     Active Substance: ALLOPURINOL
     Dosage: 1 DOSAGE FORM
     Route: 048
  5. ALLOPURINOL [Suspect]
     Active Substance: ALLOPURINOL
     Dosage: 1 DOSAGE FORM
     Route: 048
  6. ALLOPURINOL [Suspect]
     Active Substance: ALLOPURINOL
     Dosage: 1 DOSAGE FORM
     Route: 048
  7. ALLOPURINOL [Suspect]
     Active Substance: ALLOPURINOL
     Dosage: 1 DOSAGE FORM
     Route: 048
  8. ALLOPURINOL [Suspect]
     Active Substance: ALLOPURINOL
     Indication: Blood uric acid increased
     Dosage: 100 MG, QD
     Route: 048
  9. ALLOPURINOL [Suspect]
     Active Substance: ALLOPURINOL
     Dosage: 100 MG, QD
     Route: 048
  10. ALLOPURINOL [Suspect]
     Active Substance: ALLOPURINOL
     Indication: Intentional product misuse
     Dosage: 100 MG
     Route: 065
  11. ALLOPURINOL [Suspect]
     Active Substance: ALLOPURINOL
     Dosage: 100 UG, QD
     Route: 065
  12. ALLOPURINOL [Suspect]
     Active Substance: ALLOPURINOL
     Dosage: UNK
     Route: 065
  13. ALLOPURINOL [Suspect]
     Active Substance: ALLOPURINOL
     Dosage: UNK
     Route: 048
  14. ALLOPURINOL [Suspect]
     Active Substance: ALLOPURINOL
     Dosage: UNK
     Route: 048
  15. ALLOPURINOL [Suspect]
     Active Substance: ALLOPURINOL
     Dosage: UNK
     Route: 048
  16. ALLOPURINOL [Suspect]
     Active Substance: ALLOPURINOL
     Dosage: UNK, QD (1 EVERY 1 DAYS)
     Route: 065
  17. AMIODARONE [Suspect]
     Active Substance: AMIODARONE
     Dosage: 150 MG
     Route: 065
  18. AMIODARONE [Suspect]
     Active Substance: AMIODARONE
     Dosage: 150 MG, QD
     Route: 040
  19. AMIODARONE [Suspect]
     Active Substance: AMIODARONE
     Indication: Intentional product misuse
     Dosage: 150 MG, QD
     Route: 042
  20. AMIODARONE [Suspect]
     Active Substance: AMIODARONE
     Dosage: UNK, QD
     Route: 065
  21. AMIODARONE [Suspect]
     Active Substance: AMIODARONE
     Dosage: 150 MG
     Route: 040
  22. AMIODARONE [Suspect]
     Active Substance: AMIODARONE
     Dosage: 150 MG
     Route: 040
  23. AMIODARONE [Suspect]
     Active Substance: AMIODARONE
     Dosage: 150 MG
     Route: 065
  24. AMIODARONE [Suspect]
     Active Substance: AMIODARONE
     Dosage: UNK
     Route: 065
  25. AMIODARONE [Suspect]
     Active Substance: AMIODARONE
     Dosage: 27.78 ML
     Route: 040
  26. AMIODARONE [Suspect]
     Active Substance: AMIODARONE
     Indication: Drug therapy
     Dosage: 27.78 ML
     Route: 042
  27. AMIODARONE [Suspect]
     Active Substance: AMIODARONE
     Indication: Ventricular fibrillation
     Dosage: UNK, QD
     Route: 042
  28. AMIODARONE [Suspect]
     Active Substance: AMIODARONE
     Dosage: UNK, QD
     Route: 042
  29. AMIODARONE [Suspect]
     Active Substance: AMIODARONE
     Dosage: UNK, QD (1 EVERY 1 DAY)
     Route: 065
  30. AMIODARONE [Suspect]
     Active Substance: AMIODARONE
     Dosage: UNK, QD (DOSAGE FORM: NOT SPECIFIED, 1 EVERY 1 DAYS)
     Route: 040
  31. AMIODARONE [Suspect]
     Active Substance: AMIODARONE
     Dosage: UNK, QD (DOSAGE FORM: NOT SPECIFIED, 1 EVERY 1 DAYS)
     Route: 040
  32. AMIODARONE [Suspect]
     Active Substance: AMIODARONE
     Dosage: UNK, QD (DOSAGE FORM: NOT SPECIFIED, 1 EVERY 1 DAYS)
     Route: 040
  33. AMIODARONE [Suspect]
     Active Substance: AMIODARONE
     Dosage: 150 UNK
     Route: 042
  34. AMIODARONE [Suspect]
     Active Substance: AMIODARONE
     Dosage: 150 UNK
     Route: 042
  35. AMIODARONE [Suspect]
     Active Substance: AMIODARONE
     Dosage: 150 UNK
     Route: 065
  36. AMIODARONE [Suspect]
     Active Substance: AMIODARONE
     Dosage: UNK
     Route: 042
  37. AMIODARONE [Suspect]
     Active Substance: AMIODARONE
     Dosage: UNK
     Route: 065
  38. AMIODARONE [Suspect]
     Active Substance: AMIODARONE
     Dosage: UNK (DOSAGE FORM: NOT SPECIFIED)
     Route: 040
  39. AMIODARONE [Suspect]
     Active Substance: AMIODARONE
     Dosage: UNK (DOSAGE FORM: NOT SPECIFIED)
     Route: 040
  40. AMIODARONE [Suspect]
     Active Substance: AMIODARONE
     Dosage: UNK (DOSAGE FORM: NOT SPECIFIED)
     Route: 040
  41. ACETAMINOPHEN [Suspect]
     Active Substance: ACETAMINOPHEN
     Dosage: 5 MG, QD
     Route: 042
  42. ACETAMINOPHEN [Suspect]
     Active Substance: ACETAMINOPHEN
     Indication: Intentional product misuse
     Dosage: 5.0 ML, QD
     Route: 065
  43. ACETAMINOPHEN [Suspect]
     Active Substance: ACETAMINOPHEN
     Dosage: 650 G, QD
     Route: 048
  44. ACETAMINOPHEN [Suspect]
     Active Substance: ACETAMINOPHEN
     Indication: Off label use
     Dosage: 650 G, QD (1 EVERY 1 DAYS)
     Route: 048
  45. ACETAMINOPHEN [Suspect]
     Active Substance: ACETAMINOPHEN
     Dosage: 650 MG, QD
     Route: 048
  46. ACETAMINOPHEN [Suspect]
     Active Substance: ACETAMINOPHEN
     Dosage: 650 MG, QD
     Route: 048
  47. ACETAMINOPHEN [Suspect]
     Active Substance: ACETAMINOPHEN
     Dosage: 650 MG, QD
     Route: 048
  48. ACETAMINOPHEN [Suspect]
     Active Substance: ACETAMINOPHEN
     Dosage: 650 MG, QD
     Route: 065
  49. ACETAMINOPHEN [Suspect]
     Active Substance: ACETAMINOPHEN
     Dosage: 650 MG, QD (1 EVERY 1 DAYS)
     Route: 048
  50. ACETAMINOPHEN [Suspect]
     Active Substance: ACETAMINOPHEN
     Indication: Analgesic therapy
     Dosage: 650 MG, QD (1 EVERY 1 DAYS)
     Route: 048
  51. ACETAMINOPHEN [Suspect]
     Active Substance: ACETAMINOPHEN
     Dosage: 650 MG
     Route: 048
  52. ACETAMINOPHEN [Suspect]
     Active Substance: ACETAMINOPHEN
     Dosage: 650 MG
     Route: 065
  53. ACETAMINOPHEN [Suspect]
     Active Substance: ACETAMINOPHEN
     Dosage: 650 MG
     Route: 065
  54. ACETAMINOPHEN [Suspect]
     Active Substance: ACETAMINOPHEN
     Dosage: UNK, QD
     Route: 065
  55. ACETAMINOPHEN [Suspect]
     Active Substance: ACETAMINOPHEN
     Dosage: UNK
     Route: 048
  56. ACETAMINOPHEN [Suspect]
     Active Substance: ACETAMINOPHEN
     Dosage: UNK
     Route: 048
  57. ACETAMINOPHEN [Suspect]
     Active Substance: ACETAMINOPHEN
     Dosage: UNK
     Route: 065
  58. ACETAMINOPHEN [Suspect]
     Active Substance: ACETAMINOPHEN
     Dosage: UNK
     Route: 065
  59. ACETAMINOPHEN [Suspect]
     Active Substance: ACETAMINOPHEN
     Dosage: UNK, QD (1 EVERY 1 DAYS)
     Route: 048
  60. HORSE CHESTNUT [Suspect]
     Active Substance: HORSE CHESTNUT
     Dosage: 17 G, QD
     Route: 048
  61. HORSE CHESTNUT [Suspect]
     Active Substance: HORSE CHESTNUT
     Indication: Constipation
     Dosage: UNK
     Route: 065
  62. ALLANTOIN [Suspect]
     Active Substance: ALLANTOIN
     Dosage: 17 G, QD
     Route: 048
  63. ALLANTOIN [Suspect]
     Active Substance: ALLANTOIN
     Indication: Constipation
     Dosage: 17 G, QD (1 EVERY 1 DAYS)
     Route: 048
  64. ALLANTOIN [Suspect]
     Active Substance: ALLANTOIN
     Dosage: UNK (DOSAGE FORM: NOT SPECIFIED)
     Route: 065
  65. ALLANTOIN [Suspect]
     Active Substance: ALLANTOIN
     Indication: Off label use
     Dosage: UNK
     Route: 065
  66. ALLANTOIN [Suspect]
     Active Substance: ALLANTOIN
     Indication: Intentional product misuse
     Dosage: UNK (1 EVERY 1 DAYS) (DOSAGE FORM: NOT SPECIFIED)
     Route: 048
  67. ALLANTOIN [Suspect]
     Active Substance: ALLANTOIN
     Dosage: UNK (DOSAGE FORM: NOT SPECIFIED)
     Route: 048
  68. ALLANTOIN [Suspect]
     Active Substance: ALLANTOIN
     Dosage: UNK, QD (DOSAGE FORM: NOT SPECIFIED)
     Route: 048
  69. ALOE VERA LEAF [Suspect]
     Active Substance: ALOE VERA LEAF
     Indication: Constipation
     Dosage: 17 MG, QD (1 EVERY 1 DAYS)
     Route: 065
  70. ALUMINUM HYDROXIDE [Suspect]
     Active Substance: ALUMINUM HYDROXIDE
     Dosage: 133 MG
     Route: 065
  71. ALUMINUM HYDROXIDE [Suspect]
     Active Substance: ALUMINUM HYDROXIDE
     Dosage: 133 ML, QD
     Route: 065
  72. ALUMINUM HYDROXIDE [Suspect]
     Active Substance: ALUMINUM HYDROXIDE
     Dosage: 133 ML
     Route: 054
  73. ALUMINUM HYDROXIDE [Suspect]
     Active Substance: ALUMINUM HYDROXIDE
     Dosage: 133 ML, QD
     Route: 065
  74. ALUMINUM HYDROXIDE [Suspect]
     Active Substance: ALUMINUM HYDROXIDE
     Indication: Constipation
     Dosage: 133 ML
     Route: 054
  75. ALUMINUM HYDROXIDE [Suspect]
     Active Substance: ALUMINUM HYDROXIDE
     Dosage: 20 ML
     Route: 065
  76. ALUMINUM HYDROXIDE [Suspect]
     Active Substance: ALUMINUM HYDROXIDE
     Dosage: UNK
     Route: 065
  77. ALUMINUM HYDROXIDE [Suspect]
     Active Substance: ALUMINUM HYDROXIDE
     Dosage: UNK
     Route: 065
  78. ALUMINUM HYDROXIDE [Suspect]
     Active Substance: ALUMINUM HYDROXIDE
     Dosage: UNK
     Route: 065
  79. ALUMINUM HYDROXIDE [Suspect]
     Active Substance: ALUMINUM HYDROXIDE
     Dosage: UNK
     Route: 065
  80. AMINOBENZOIC ACID [Suspect]
     Active Substance: AMINOBENZOIC ACID
     Indication: Product used for unknown indication
     Dosage: 12.5 MG
     Route: 065
  81. AMINOBENZOIC ACID [Suspect]
     Active Substance: AMINOBENZOIC ACID
     Dosage: UNK
     Route: 065
  82. AMINOBENZOIC ACID [Suspect]
     Active Substance: AMINOBENZOIC ACID
     Dosage: UNK
     Route: 065
  83. AMIODARONE HYDROCHLORIDE [Suspect]
     Active Substance: AMIODARONE HYDROCHLORIDE
     Indication: Drug therapy
     Dosage: 150 MG, QD (1 EVERY 1 DAYS)
     Route: 040
  84. AMIODARONE HYDROCHLORIDE [Suspect]
     Active Substance: AMIODARONE HYDROCHLORIDE
     Indication: Intentional product misuse
     Dosage: 150 MG, QD (1 EVERY 1 DAYS)
     Route: 040
  85. AMIODARONE HYDROCHLORIDE [Suspect]
     Active Substance: AMIODARONE HYDROCHLORIDE
     Dosage: 150 MG, QD
     Route: 065
  86. AMIODARONE HYDROCHLORIDE [Suspect]
     Active Substance: AMIODARONE HYDROCHLORIDE
     Dosage: UNK
     Route: 065
  87. AMIODARONE HYDROCHLORIDE [Suspect]
     Active Substance: AMIODARONE HYDROCHLORIDE
     Indication: Off label use
     Dosage: UNK, QD (1 EVERY 1 DAYS)
     Route: 040
  88. AMIODARONE HYDROCHLORIDE [Suspect]
     Active Substance: AMIODARONE HYDROCHLORIDE
     Indication: Ventricular fibrillation
     Dosage: UNK
     Route: 042
  89. AMIODARONE HYDROCHLORIDE [Suspect]
     Active Substance: AMIODARONE HYDROCHLORIDE
     Dosage: UNK, QD (1 EVERY 1 DAYS)
     Route: 065
  90. AMMONIUM BROMIDE [Suspect]
     Active Substance: AMMONIUM BROMIDE
     Indication: Dyspnoea
     Dosage: 1 IU
     Route: 048
  91. AMMONIUM CHLORIDE [Suspect]
     Active Substance: AMMONIUM CHLORIDE
     Dosage: UNK, PRN
     Route: 065
  92. AMMONIUM CHLORIDE [Suspect]
     Active Substance: AMMONIUM CHLORIDE
     Dosage: 2.5 ML, QD
     Route: 048
  93. AMMONIUM CHLORIDE [Suspect]
     Active Substance: AMMONIUM CHLORIDE
     Dosage: 2.5 ML, QD
     Route: 048
  94. AMMONIUM CHLORIDE [Suspect]
     Active Substance: AMMONIUM CHLORIDE
     Dosage: 2.5 ML, QD
     Route: 048
  95. AMMONIUM CHLORIDE [Suspect]
     Active Substance: AMMONIUM CHLORIDE
     Dosage: 2.5 ML, QD
     Route: 048
  96. AMMONIUM CHLORIDE [Suspect]
     Active Substance: AMMONIUM CHLORIDE
     Dosage: 2.5 ML
     Route: 065
  97. AMMONIUM CHLORIDE [Suspect]
     Active Substance: AMMONIUM CHLORIDE
     Dosage: 2.5 ML, PRN (DOSAGE FORM: NOT SPECIFIED)
     Route: 048
  98. AMMONIUM CHLORIDE [Suspect]
     Active Substance: AMMONIUM CHLORIDE
     Dosage: UNK
     Route: 065
  99. AMMONIUM CHLORIDE [Suspect]
     Active Substance: AMMONIUM CHLORIDE
     Dosage: UNK
     Route: 065
  100. AMMONIUM CHLORIDE [Suspect]
     Active Substance: AMMONIUM CHLORIDE
     Indication: Thrombosis
     Dosage: UNK (DOSAGE FORM: NOT SPECIFIED)
     Route: 048
  101. AMMONIUM CHLORIDE [Suspect]
     Active Substance: AMMONIUM CHLORIDE
     Dosage: UNK, PRN
     Route: 065
  102. ANTICOAGULANT SODIUM CITRATE [Suspect]
     Active Substance: SODIUM CITRATE
     Dosage: 2.5 MG, QD (1 EVERY 1 DAYS)
     Route: 065
  103. ANTICOAGULANT SODIUM CITRATE [Suspect]
     Active Substance: SODIUM CITRATE
     Dosage: 2.5 ML, PRN
     Route: 065
  104. ANTICOAGULANT SODIUM CITRATE [Suspect]
     Active Substance: SODIUM CITRATE
     Indication: Thrombosis
     Dosage: 2.5 ML
     Route: 065
  105. ANTICOAGULANT SODIUM CITRATE [Suspect]
     Active Substance: SODIUM CITRATE
     Dosage: UNK
     Route: 065
  106. ANTICOAGULANT SODIUM CITRATE [Suspect]
     Active Substance: SODIUM CITRATE
     Dosage: UNK
     Route: 065
  107. ARANESP [Suspect]
     Active Substance: DARBEPOETIN ALFA
     Dosage: 0.2 UG, QW (1 EVERY 1 WEEKS)
     Route: 042
  108. ARANESP [Suspect]
     Active Substance: DARBEPOETIN ALFA
     Dosage: 0.202 UG
     Route: 042
  109. ARANESP [Suspect]
     Active Substance: DARBEPOETIN ALFA
     Dosage: 0.202 UG
     Route: 042
  110. ARANESP [Suspect]
     Active Substance: DARBEPOETIN ALFA
     Dosage: 0.71 MG, Q2W (1 EVERY 2 WEEKS)
     Route: 042
  111. ARANESP [Suspect]
     Active Substance: DARBEPOETIN ALFA
     Dosage: 0.71 UG, QW (1 EVERY 1 WEEKS)
     Route: 042
  112. ARANESP [Suspect]
     Active Substance: DARBEPOETIN ALFA
     Dosage: 0.71 UG, QD
     Route: 042
  113. ARANESP [Suspect]
     Active Substance: DARBEPOETIN ALFA
     Dosage: 0.71 UG, QD (1 EVERY 1 DAYS)
     Route: 042
  114. ARANESP [Suspect]
     Active Substance: DARBEPOETIN ALFA
     Dosage: 0.71 UG, Q2W
     Route: 042
  115. ARANESP [Suspect]
     Active Substance: DARBEPOETIN ALFA
     Dosage: 0.71 UG, Q2W
     Route: 042
  116. ARANESP [Suspect]
     Active Substance: DARBEPOETIN ALFA
     Dosage: 0.71 UG, Q2W (1 EVERY 2 WEEKS)
     Route: 042
  117. ARANESP [Suspect]
     Active Substance: DARBEPOETIN ALFA
     Dosage: 0.71 UG
     Route: 042
  118. ARANESP [Suspect]
     Active Substance: DARBEPOETIN ALFA
     Dosage: 0.71 UG
     Route: 042
  119. ARANESP [Suspect]
     Active Substance: DARBEPOETIN ALFA
     Dosage: 0.71 UG
     Route: 042
  120. ARANESP [Suspect]
     Active Substance: DARBEPOETIN ALFA
     Dosage: 0.71 UG
     Route: 042
  121. ARANESP [Suspect]
     Active Substance: DARBEPOETIN ALFA
     Dosage: 0.71 UG
     Route: 042
  122. ARANESP [Suspect]
     Active Substance: DARBEPOETIN ALFA
     Dosage: 0.71 UG
     Route: 042
  123. ARANESP [Suspect]
     Active Substance: DARBEPOETIN ALFA
     Dosage: 0.714 UG, Q2W (1 EVERY 2 WEEKS)
     Route: 042
  124. ARANESP [Suspect]
     Active Substance: DARBEPOETIN ALFA
     Dosage: 0.75 UG
     Route: 017
  125. ARANESP [Suspect]
     Active Substance: DARBEPOETIN ALFA
     Dosage: 0.75 UG
     Route: 042
  126. ARANESP [Suspect]
     Active Substance: DARBEPOETIN ALFA
     Dosage: 1.42 MG, QW (1 EVERY 1 WEEKS)
     Route: 042
  127. ARANESP [Suspect]
     Active Substance: DARBEPOETIN ALFA
     Dosage: 1.42 MG, Q2W
     Route: 042
  128. ARANESP [Suspect]
     Active Substance: DARBEPOETIN ALFA
     Dosage: 1.42 UG, QW
     Route: 042
  129. ARANESP [Suspect]
     Active Substance: DARBEPOETIN ALFA
     Dosage: 1.42 UG, QW
     Route: 042
  130. ARANESP [Suspect]
     Active Substance: DARBEPOETIN ALFA
     Dosage: 1.42 UG, Q2W
     Route: 042
  131. ARANESP [Suspect]
     Active Substance: DARBEPOETIN ALFA
     Dosage: 1.42 UG
     Route: 042
  132. ARANESP [Suspect]
     Active Substance: DARBEPOETIN ALFA
     Dosage: 1.42 UG
     Route: 042
  133. ARANESP [Suspect]
     Active Substance: DARBEPOETIN ALFA
     Dosage: 10 MG
     Route: 042
  134. ARANESP [Suspect]
     Active Substance: DARBEPOETIN ALFA
     Dosage: 10 MG, CYCLIC
     Route: 042
  135. ARANESP [Suspect]
     Active Substance: DARBEPOETIN ALFA
     Dosage: 10 MG, QW
     Route: 042
  136. ARANESP [Suspect]
     Active Substance: DARBEPOETIN ALFA
     Dosage: 10 MG, QW (1 EVERY 1 WEEKS)
     Route: 042
  137. ARANESP [Suspect]
     Active Substance: DARBEPOETIN ALFA
     Indication: Anaemia
     Dosage: 10 MG
     Route: 042
  138. ARANESP [Suspect]
     Active Substance: DARBEPOETIN ALFA
     Dosage: 10 MG, Q2W (1 EVERY 2 WEEKS)
     Route: 042
  139. ARANESP [Suspect]
     Active Substance: DARBEPOETIN ALFA
     Dosage: 10 MG, QW
     Route: 042
  140. ARANESP [Suspect]
     Active Substance: DARBEPOETIN ALFA
     Dosage: 10 MG
     Route: 042
  141. ARANESP [Suspect]
     Active Substance: DARBEPOETIN ALFA
     Dosage: 10 MG, Q2W
     Route: 040
  142. ARANESP [Suspect]
     Active Substance: DARBEPOETIN ALFA
     Dosage: 10 MG, Q2W (CYCLICAL)
     Route: 042
  143. ARANESP [Suspect]
     Active Substance: DARBEPOETIN ALFA
     Dosage: UNK
     Route: 042
  144. ARANESP [Suspect]
     Active Substance: DARBEPOETIN ALFA
     Dosage: 10 UG, Q2W (1 EVERY 2 WEEKS)
     Route: 042
  145. ARANESP [Suspect]
     Active Substance: DARBEPOETIN ALFA
     Dosage: 10 UG
     Route: 040
  146. ARANESP [Suspect]
     Active Substance: DARBEPOETIN ALFA
     Dosage: 10 UG
     Route: 042
  147. ARANESP [Suspect]
     Active Substance: DARBEPOETIN ALFA
     Dosage: 10 UG
     Route: 065
  148. ARANESP [Suspect]
     Active Substance: DARBEPOETIN ALFA
     Dosage: 10 UG, CYCLIC
     Route: 065
  149. ARANESP [Suspect]
     Active Substance: DARBEPOETIN ALFA
     Dosage: UNK
     Route: 040
  150. ARANESP [Suspect]
     Active Substance: DARBEPOETIN ALFA
     Dosage: 20 MG, QW (1 EVERY 1 WEEKS)
     Route: 042
  151. ARANESP [Suspect]
     Active Substance: DARBEPOETIN ALFA
     Dosage: 20 MG
     Route: 042
  152. ARANESP [Suspect]
     Active Substance: DARBEPOETIN ALFA
     Dosage: 239 MG, QW
     Route: 042
  153. ARANESP [Suspect]
     Active Substance: DARBEPOETIN ALFA
     Dosage: 75 UG
     Route: 042
  154. ARANESP [Suspect]
     Active Substance: DARBEPOETIN ALFA
     Dosage: UNK, Q2W
     Route: 042
  155. ARANESP [Suspect]
     Active Substance: DARBEPOETIN ALFA
     Dosage: UNK
     Route: 011
  156. ARANESP [Suspect]
     Active Substance: DARBEPOETIN ALFA
     Dosage: UNK
     Route: 042
  157. ARANESP [Suspect]
     Active Substance: DARBEPOETIN ALFA
     Dosage: UNK
     Route: 065
  158. ARANESP [Suspect]
     Active Substance: DARBEPOETIN ALFA
     Dosage: UNK, Q2W
     Route: 042
  159. ASCORBIC ACID [Suspect]
     Active Substance: ASCORBIC ACID
     Indication: Iron deficiency
     Dosage: 3 MG, QW
     Route: 065
  160. ASCORBIC ACID [Suspect]
     Active Substance: ASCORBIC ACID
     Dosage: 1 DF, Q6H
     Route: 065
  161. ASCORBIC ACID [Suspect]
     Active Substance: ASCORBIC ACID
     Dosage: 1 DF, Q6H
     Route: 065
  162. ASCORBIC ACID [Suspect]
     Active Substance: ASCORBIC ACID
     Indication: Constipation
     Dosage: 17 G, QD (1 EVERY 1 DAYS)
     Route: 048
  163. ASCORBIC ACID [Suspect]
     Active Substance: ASCORBIC ACID
     Dosage: 17 G, QD
     Route: 048
  164. ASCORBIC ACID [Suspect]
     Active Substance: ASCORBIC ACID
     Dosage: 17 G, QD
     Route: 048
  165. ASCORBIC ACID [Suspect]
     Active Substance: ASCORBIC ACID
     Dosage: 17 MG
     Route: 065
  166. ASCORBIC ACID [Suspect]
     Active Substance: ASCORBIC ACID
     Dosage: 17 MG
     Route: 065
  167. ASCORBIC ACID [Suspect]
     Active Substance: ASCORBIC ACID
     Dosage: 2.5 ML
     Route: 042
  168. ASCORBIC ACID [Suspect]
     Active Substance: ASCORBIC ACID
     Dosage: 2.5 ML
  169. ASCORBIC ACID [Suspect]
     Active Substance: ASCORBIC ACID
     Dosage: 3 MG, QW
     Route: 048
  170. ASCORBIC ACID [Suspect]
     Active Substance: ASCORBIC ACID
     Dosage: 3 MG, QW
     Route: 048
  171. ASCORBIC ACID [Suspect]
     Active Substance: ASCORBIC ACID
     Dosage: 3 MG, QW
     Route: 048
  172. ASCORBIC ACID [Suspect]
     Active Substance: ASCORBIC ACID
     Dosage: UNK, QD
     Route: 048
  173. ASCORBIC ACID [Suspect]
     Active Substance: ASCORBIC ACID
     Dosage: UNK, QD
     Route: 048
  174. ASCORBIC ACID [Suspect]
     Active Substance: ASCORBIC ACID
     Dosage: UNK
     Route: 048
  175. ASCORBIC ACID [Suspect]
     Active Substance: ASCORBIC ACID
     Dosage: UNK
     Route: 048
  176. ASCORBIC ACID [Suspect]
     Active Substance: ASCORBIC ACID
     Indication: Vitamin supplementation
     Dosage: UNK
     Route: 065
  177. ASCORBIC ACID [Suspect]
     Active Substance: ASCORBIC ACID
     Dosage: UNK
     Route: 065
  178. ATROVENT [Suspect]
     Active Substance: IPRATROPIUM BROMIDE
     Dosage: 1 DF
     Route: 055
  179. ATROVENT [Suspect]
     Active Substance: IPRATROPIUM BROMIDE
     Dosage: UNK, QID
     Route: 050
  180. ATROVENT [Suspect]
     Active Substance: IPRATROPIUM BROMIDE
     Dosage: 1 DOSAGE FORM, QD
     Route: 048
  181. ATROVENT [Suspect]
     Active Substance: IPRATROPIUM BROMIDE
     Dosage: 1 DOSAGE FORM, QD
     Route: 065
  182. ATROVENT [Suspect]
     Active Substance: IPRATROPIUM BROMIDE
     Dosage: 1 DOSAGE FORM
     Route: 065
  183. ATROVENT [Suspect]
     Active Substance: IPRATROPIUM BROMIDE
     Dosage: 1 DOSAGE FORM, Q6H
     Route: 050
  184. ATROVENT [Suspect]
     Active Substance: IPRATROPIUM BROMIDE
     Dosage: 1 DOSAGE FORM, Q6H
     Route: 055
  185. ATROVENT [Suspect]
     Active Substance: IPRATROPIUM BROMIDE
     Dosage: 1 DOSAGE FORM, Q8H
     Route: 050
  186. ATROVENT [Suspect]
     Active Substance: IPRATROPIUM BROMIDE
     Dosage: 1 DOSAGE FORM
     Route: 055
  187. ATROVENT [Suspect]
     Active Substance: IPRATROPIUM BROMIDE
     Dosage: 1 DF, QID
     Route: 065
  188. ATROVENT [Suspect]
     Active Substance: IPRATROPIUM BROMIDE
     Dosage: 1 DOSAGE FORM, QID (4 EVERY 1 DAYS)
     Route: 050
  189. ATROVENT [Suspect]
     Active Substance: IPRATROPIUM BROMIDE
     Dosage: 1 DOSAGE FORM, QID (4 EVERY 1 DAYS)
     Route: 065
  190. ATROVENT [Suspect]
     Active Substance: IPRATROPIUM BROMIDE
     Dosage: 1 DF
     Route: 065
  191. ATROVENT [Suspect]
     Active Substance: IPRATROPIUM BROMIDE
     Dosage: 4 DF, QID
     Route: 065
  192. ATROVENT [Suspect]
     Active Substance: IPRATROPIUM BROMIDE
     Dosage: 4 DOSAGE FORM, QID (4 EVERY 1 DAYS)
     Route: 055
  193. ATROVENT [Suspect]
     Active Substance: IPRATROPIUM BROMIDE
     Dosage: UNK, QD
     Route: 055
  194. ATROVENT [Suspect]
     Active Substance: IPRATROPIUM BROMIDE
     Dosage: UNK, QD (1 EVERY 1 DAYS)
     Route: 050
  195. ATROVENT [Suspect]
     Active Substance: IPRATROPIUM BROMIDE
     Indication: Sleep disorder therapy
     Dosage: UNK, QD (1 EVERY 1 DAYS)
     Route: 065
  196. ATROVENT [Suspect]
     Active Substance: IPRATROPIUM BROMIDE
     Dosage: UNK, QID (4 EVERY 1 DAYS)
     Route: 050
  197. ATROVENT [Suspect]
     Active Substance: IPRATROPIUM BROMIDE
     Dosage: UNK, QD
     Route: 050
  198. ATROVENT [Suspect]
     Active Substance: IPRATROPIUM BROMIDE
     Dosage: UNK, QD
     Route: 065
  199. ATROVENT [Suspect]
     Active Substance: IPRATROPIUM BROMIDE
     Dosage: UNK, Q6H
     Route: 050
  200. ATROVENT [Suspect]
     Active Substance: IPRATROPIUM BROMIDE
     Indication: Dyspnoea
     Dosage: UNK, Q6H
     Route: 055
  201. ATROVENT [Suspect]
     Active Substance: IPRATROPIUM BROMIDE
     Dosage: UNK, Q6H
     Route: 055
  202. ATROVENT [Suspect]
     Active Substance: IPRATROPIUM BROMIDE
     Dosage: UNK, Q6H
     Route: 065
  203. ATROVENT [Suspect]
     Active Substance: IPRATROPIUM BROMIDE
     Dosage: UNK, Q8H
     Route: 050
  204. ATROVENT [Suspect]
     Active Substance: IPRATROPIUM BROMIDE
     Dosage: UNK, QD
     Route: 050
  205. ATROVENT [Suspect]
     Active Substance: IPRATROPIUM BROMIDE
     Indication: Off label use
     Dosage: UNK, QID (4 EVERY 1 DAYS)
     Route: 055
  206. ATROVENT [Suspect]
     Active Substance: IPRATROPIUM BROMIDE
     Indication: Somnolence
     Dosage: UNK, QID (4 EVERY 1 DAYS)
     Route: 055
  207. ATROVENT [Suspect]
     Active Substance: IPRATROPIUM BROMIDE
     Dosage: UNK, QID (4 EVERY 1 DAYS)
     Route: 065
  208. ATROVENT [Suspect]
     Active Substance: IPRATROPIUM BROMIDE
     Dosage: 1 UNK (1 EVERY 4 DAYS)
     Route: 055
  209. ATROVENT [Suspect]
     Active Substance: IPRATROPIUM BROMIDE
     Dosage: UNK
     Route: 050
  210. ATROVENT [Suspect]
     Active Substance: IPRATROPIUM BROMIDE
     Dosage: UNK
     Route: 055
  211. ATROVENT [Suspect]
     Active Substance: IPRATROPIUM BROMIDE
     Dosage: UNK
     Route: 055
  212. ATROVENT [Suspect]
     Active Substance: IPRATROPIUM BROMIDE
     Dosage: UNK
     Route: 065
  213. ATROVENT [Suspect]
     Active Substance: IPRATROPIUM BROMIDE
     Dosage: UNK
     Route: 065
  214. ATROVENT [Suspect]
     Active Substance: IPRATROPIUM BROMIDE
     Dosage: UNK
     Route: 065
  215. ATROVENT [Suspect]
     Active Substance: IPRATROPIUM BROMIDE
     Dosage: UNK
     Route: 065
  216. ATROVENT [Suspect]
     Active Substance: IPRATROPIUM BROMIDE
     Dosage: UNK
     Route: 065
  217. ATROVENT [Suspect]
     Active Substance: IPRATROPIUM BROMIDE
     Dosage: UNK  (1 EVERY 4 DAYS)
     Route: 050
  218. ATROVENT [Suspect]
     Active Substance: IPRATROPIUM BROMIDE
     Dosage: UNK, QD
     Route: 050
  219. ATROVENT [Suspect]
     Active Substance: IPRATROPIUM BROMIDE
     Dosage: UNK, TID
     Route: 050
  220. ATROVENT [Suspect]
     Active Substance: IPRATROPIUM BROMIDE
     Dosage: UNK, TID (3 EVERY 1 DAYS)
     Route: 050
  221. FLUTICASONE FUROATE [Suspect]
     Active Substance: FLUTICASONE FUROATE
     Indication: Nutritional supplementation
     Dosage: UNK (SPRAY, METERED DOSE)
     Route: 048
  222. FLUTICASONE FUROATE [Suspect]
     Active Substance: FLUTICASONE FUROATE
     Indication: Intentional product misuse
     Dosage: UNK (SPRAY, METERED DOSE)
     Route: 065
  223. FLUTICASONE FUROATE [Suspect]
     Active Substance: FLUTICASONE FUROATE
     Indication: Blood phosphorus increased
  224. BEROTEC [Suspect]
     Active Substance: FENOTEROL HYDROBROMIDE
     Indication: Product used for unknown indication
     Dosage: UNK (DOSAGE FORM: NOT SPECIFIED)
     Route: 065
  225. .BETA.-CAROTENE [Suspect]
     Active Substance: .BETA.-CAROTENE
     Dosage: 12.5 G, PRN
     Route: 042
  226. .BETA.-CAROTENE [Suspect]
     Active Substance: .BETA.-CAROTENE
     Dosage: 12.5 G
     Route: 042
  227. .BETA.-CAROTENE [Suspect]
     Active Substance: .BETA.-CAROTENE
     Dosage: 12.5 G
     Route: 042
  228. .BETA.-CAROTENE [Suspect]
     Active Substance: .BETA.-CAROTENE
     Dosage: 12.5 MG
     Route: 042
  229. .BETA.-CAROTENE [Suspect]
     Active Substance: .BETA.-CAROTENE
     Dosage: 12.5 IU, PRN
     Route: 042
  230. .BETA.-CAROTENE [Suspect]
     Active Substance: .BETA.-CAROTENE
     Indication: Nutritional supplementation
     Dosage: UNK
     Route: 065
  231. BETAMETHASONE [Suspect]
     Active Substance: BETAMETHASONE
     Dosage: 1 DOSAGE FORM, QD
     Route: 061
  232. BETAMETHASONE [Suspect]
     Active Substance: BETAMETHASONE
     Indication: Swelling
     Dosage: 1 DOSAGE FORM
     Route: 061
  233. BETAMETHASONE [Suspect]
     Active Substance: BETAMETHASONE
     Dosage: 1 DOSAGE FORM
     Route: 061
  234. BETAMETHASONE [Suspect]
     Active Substance: BETAMETHASONE
     Dosage: 1 DOSAGE FORM
     Route: 061
  235. BETAMETHASONE [Suspect]
     Active Substance: BETAMETHASONE
     Dosage: 1 DOSAGE FORM
     Route: 065
  236. BETAMETHASONE [Suspect]
     Active Substance: BETAMETHASONE
     Dosage: 10 MG
     Route: 061
  237. BETAMETHASONE [Suspect]
     Active Substance: BETAMETHASONE
     Dosage: 10 MG
     Route: 061
  238. BETAMETHASONE [Suspect]
     Active Substance: BETAMETHASONE
     Indication: Product used for unknown indication
     Dosage: 10 MG, PRN
     Route: 061
  239. BETAMETHASONE [Suspect]
     Active Substance: BETAMETHASONE
     Indication: Cardiogenic shock
     Dosage: 10 DOSAGE FORM
     Route: 065
  240. BETAMETHASONE [Suspect]
     Active Substance: BETAMETHASONE
     Dosage: UNK
     Route: 061
  241. BETAMETHASONE [Suspect]
     Active Substance: BETAMETHASONE
     Dosage: UNK
     Route: 065
  242. BETAMETHASONE [Suspect]
     Active Substance: BETAMETHASONE
     Dosage: UNK, QD (1 EVERY 1 DAYS)
     Route: 065
  243. BETAMETHASONE [Suspect]
     Active Substance: BETAMETHASONE
     Indication: Off label use
     Dosage: UNK, QD (1 EVERY 1 DAYS)
     Route: 061
  244. BETAMETHASONE [Suspect]
     Active Substance: BETAMETHASONE
     Dosage: UNK, QD
     Route: 065
  245. BETAMETHASONE [Suspect]
     Active Substance: BETAMETHASONE
     Dosage: UNK, QD
     Route: 065
  246. BETAMETHASONE [Suspect]
     Active Substance: BETAMETHASONE
     Indication: Bacterial infection
     Dosage: UNK
     Route: 061
  247. BETAMETHASONE [Suspect]
     Active Substance: BETAMETHASONE
     Dosage: UNK
     Route: 061
  248. BETAMETHASONE [Suspect]
     Active Substance: BETAMETHASONE
     Dosage: UNK
     Route: 061
  249. BETAMETHASONE [Suspect]
     Active Substance: BETAMETHASONE
     Dosage: UNK
     Route: 061
  250. BETAMETHASONE [Suspect]
     Active Substance: BETAMETHASONE
     Dosage: UNK
     Route: 061
  251. BETAMETHASONE [Suspect]
     Active Substance: BETAMETHASONE
     Dosage: UNK, PRN
     Route: 061
  252. BETAMETHASONE [Suspect]
     Active Substance: BETAMETHASONE
     Dosage: UNK, PRN
     Route: 065
  253. BETAMETHASONE [Suspect]
     Active Substance: BETAMETHASONE
     Dosage: UNK, QD
     Route: 061
  254. BETAMETHASONE [Suspect]
     Active Substance: BETAMETHASONE
     Dosage: UNK, QD (1 EVERY 1 DAYS)
     Route: 065
  255. BETAMETHASONE [Suspect]
     Active Substance: BETAMETHASONE
     Dosage: UNK, PRN
     Route: 065
  256. BETAMETHASONE DIPROPIONATE\CLIOQUINOL [Suspect]
     Active Substance: BETAMETHASONE DIPROPIONATE\CLIOQUINOL
     Dosage: UNK
     Route: 061
  257. BETAMETHASONE DIPROPIONATE\CLIOQUINOL [Suspect]
     Active Substance: BETAMETHASONE DIPROPIONATE\CLIOQUINOL
     Indication: Swelling
     Dosage: UNK, QD
     Route: 061
  258. BETAMETHASONE DIPROPIONATE\CLIOQUINOL [Suspect]
     Active Substance: BETAMETHASONE DIPROPIONATE\CLIOQUINOL
     Dosage: UNK, QD
     Route: 061
  259. BETAMETHASONE DIPROPIONATE\CLIOQUINOL [Suspect]
     Active Substance: BETAMETHASONE DIPROPIONATE\CLIOQUINOL
     Dosage: UNK, QD
     Route: 061
  260. BETAMETHASONE VALERATE [Suspect]
     Active Substance: BETAMETHASONE VALERATE
     Indication: Off label use
     Dosage: 10 MG
     Route: 061
  261. BETAMETHASONE VALERATE [Suspect]
     Active Substance: BETAMETHASONE VALERATE
     Indication: Swelling
     Dosage: UNK
     Route: 061
  262. BETAMETHASONE VALERATE [Suspect]
     Active Substance: BETAMETHASONE VALERATE
     Dosage: UNK
     Route: 061
  263. BETAMETHASONE VALERATE [Suspect]
     Active Substance: BETAMETHASONE VALERATE
     Dosage: UNK
     Route: 061
  264. BETAMETHASONE VALERATE [Suspect]
     Active Substance: BETAMETHASONE VALERATE
     Dosage: UNK
     Route: 061
  265. BIOTIN [Suspect]
     Active Substance: BIOTIN
     Dosage: 17 G
     Route: 042
  266. BIOTIN [Suspect]
     Active Substance: BIOTIN
     Dosage: 17 G
     Route: 048
  267. BIOTIN [Suspect]
     Active Substance: BIOTIN
     Dosage: 17 G
     Route: 065
  268. BIOTIN [Suspect]
     Active Substance: BIOTIN
     Dosage: 17 G
     Route: 065
  269. BIOTIN [Suspect]
     Active Substance: BIOTIN
     Indication: Off label use
     Dosage: 17 MG
     Route: 048
  270. BIOTIN [Suspect]
     Active Substance: BIOTIN
     Dosage: 5 MG, QD
     Route: 017
  271. BIOTIN [Suspect]
     Active Substance: BIOTIN
     Indication: Vitamin D
     Dosage: 5 MG, QD
     Route: 065
  272. BIOTIN [Suspect]
     Active Substance: BIOTIN
     Dosage: 5 MG, QD (1 EVERY 1 DAYS)
     Route: 042
  273. BIOTIN [Suspect]
     Active Substance: BIOTIN
     Dosage: 5 MG, QD
     Route: 065
  274. BIOTIN [Suspect]
     Active Substance: BIOTIN
     Dosage: 5 MG, QD
     Route: 065
  275. BIOTIN [Suspect]
     Active Substance: BIOTIN
     Indication: Vitamin supplementation
     Dosage: 5 MG
     Route: 042
  276. BIOTIN [Suspect]
     Active Substance: BIOTIN
     Indication: Constipation
     Dosage: 5 MG
     Route: 050
  277. BIOTIN [Suspect]
     Active Substance: BIOTIN
     Indication: Intentional product misuse
     Dosage: 5 MG
     Route: 065
  278. BIOTIN [Suspect]
     Active Substance: BIOTIN
     Dosage: 5 MG
     Route: 065
  279. BIOTIN [Suspect]
     Active Substance: BIOTIN
     Dosage: 5 MG
     Route: 065
  280. BIOTIN [Suspect]
     Active Substance: BIOTIN
     Dosage: QD (EVERY 1 DAYS)
     Route: 065
  281. BIOTIN [Suspect]
     Active Substance: BIOTIN
     Dosage: UNK
     Route: 042
  282. BIOTIN [Suspect]
     Active Substance: BIOTIN
     Dosage: UNK
     Route: 065
  283. BIOTIN [Suspect]
     Active Substance: BIOTIN
     Dosage: UNK
     Route: 065
  284. BIOTIN [Suspect]
     Active Substance: BIOTIN
     Dosage: UNK
     Route: 065
  285. BIOTIN [Suspect]
     Active Substance: BIOTIN
     Dosage: UNK
     Route: 065
  286. BISACODYL [Suspect]
     Active Substance: BISACODYL
     Dosage: 1 DF, PRN
     Route: 065
  287. BISACODYL [Suspect]
     Active Substance: BISACODYL
     Dosage: 1 DOSAGE FORM, PRN
     Route: 040
  288. BISACODYL [Suspect]
     Active Substance: BISACODYL
     Dosage: 10 MG, QD
     Route: 065
  289. BISACODYL [Suspect]
     Active Substance: BISACODYL
     Dosage: 10 MG, QD
     Route: 065
  290. BISACODYL [Suspect]
     Active Substance: BISACODYL
     Indication: Off label use
     Dosage: 10 MG, QD (1 EVERY 1 DAYS)
     Route: 054
  291. BISACODYL [Suspect]
     Active Substance: BISACODYL
     Indication: Ventricular fibrillation
     Dosage: 10 MG
     Route: 042
  292. BISACODYL [Suspect]
     Active Substance: BISACODYL
     Dosage: 10 MG
     Route: 042
  293. BISACODYL [Suspect]
     Active Substance: BISACODYL
     Dosage: 10 MG
     Route: 050
  294. BISACODYL [Suspect]
     Active Substance: BISACODYL
     Indication: Constipation
     Dosage: 10 MG
     Route: 054
  295. BISACODYL [Suspect]
     Active Substance: BISACODYL
     Indication: Intentional product misuse
     Dosage: 10 MG
     Route: 054
  296. BISACODYL [Suspect]
     Active Substance: BISACODYL
     Dosage: 10 MG
     Route: 054
  297. BISACODYL [Suspect]
     Active Substance: BISACODYL
     Dosage: 10 MG
     Route: 054
  298. BISACODYL [Suspect]
     Active Substance: BISACODYL
     Dosage: 10 MG
     Route: 054
  299. BISACODYL [Suspect]
     Active Substance: BISACODYL
     Dosage: 10 MG
     Route: 054
  300. BISACODYL [Suspect]
     Active Substance: BISACODYL
     Dosage: 10 MG
     Route: 054
  301. BISACODYL [Suspect]
     Active Substance: BISACODYL
     Dosage: 10 MG
     Route: 054
  302. BISACODYL [Suspect]
     Active Substance: BISACODYL
     Dosage: 10 MG
     Route: 054
  303. BISACODYL [Suspect]
     Active Substance: BISACODYL
     Dosage: 10 MG
     Route: 054
  304. BISACODYL [Suspect]
     Active Substance: BISACODYL
     Indication: Drug therapy
     Dosage: 10 MG
     Route: 065
  305. BISACODYL [Suspect]
     Active Substance: BISACODYL
     Indication: Dyspnoea
     Dosage: 10 MG
     Route: 065
  306. BISACODYL [Suspect]
     Active Substance: BISACODYL
     Dosage: 10 MG
     Route: 065
  307. BISACODYL [Suspect]
     Active Substance: BISACODYL
     Dosage: 10 MG
     Route: 065
  308. BISACODYL [Suspect]
     Active Substance: BISACODYL
     Dosage: 10 MG
     Route: 065
  309. BISACODYL [Suspect]
     Active Substance: BISACODYL
     Dosage: 10 MG, PRN
     Route: 065
  310. BISACODYL [Suspect]
     Active Substance: BISACODYL
     Dosage: 10 MG, PRN
     Route: 065
  311. BISACODYL [Suspect]
     Active Substance: BISACODYL
     Dosage: 10 MG, PRN
     Route: 065
  312. BISACODYL [Suspect]
     Active Substance: BISACODYL
     Dosage: 10 UNK, QD
     Route: 065
  313. BISACODYL [Suspect]
     Active Substance: BISACODYL
     Dosage: UNK
     Route: 042
  314. BISACODYL [Suspect]
     Active Substance: BISACODYL
     Dosage: UNK
     Route: 065
  315. BISACODYL [Suspect]
     Active Substance: BISACODYL
     Dosage: UNK
     Route: 065
  316. BISMUTH [Suspect]
     Active Substance: BISMUTH
     Dosage: 133 ML
     Route: 065
  317. BISMUTH [Suspect]
     Active Substance: BISMUTH
     Indication: Constipation
     Dosage: 133 ML, PRN
     Route: 054
  318. BISMUTH [Suspect]
     Active Substance: BISMUTH
     Dosage: 133 ML, PRN
     Route: 065
  319. BISMUTH [Suspect]
     Active Substance: BISMUTH
     Dosage: 133 ML, PRN
     Route: 065
  320. BISMUTH [Suspect]
     Active Substance: BISMUTH
     Dosage: 133 ML, PRN
     Route: 065
  321. BISMUTH [Suspect]
     Active Substance: BISMUTH
     Dosage: UNK
     Route: 054
  322. BISMUTH [Suspect]
     Active Substance: BISMUTH
     Dosage: UNK
     Route: 065
  323. BISMUTH [Suspect]
     Active Substance: BISMUTH
     Dosage: UNK
     Route: 065
  324. BISMUTH SUBGALLATE [Suspect]
     Active Substance: BISMUTH SUBGALLATE
     Indication: Constipation
     Dosage: 133.0 ML, PRN
     Route: 065
  325. BISMUTH SUBNITRATE [Suspect]
     Active Substance: BISMUTH SUBNITRATE
     Dosage: 133 ML, PRN
     Route: 054
  326. BISMUTH SUBNITRATE [Suspect]
     Active Substance: BISMUTH SUBNITRATE
     Dosage: 133 ML
     Route: 065
  327. BISMUTH SUBNITRATE [Suspect]
     Active Substance: BISMUTH SUBNITRATE
     Indication: Constipation
     Dosage: 133 ML, PRN
     Route: 065
  328. BISMUTH SUBNITRATE [Suspect]
     Active Substance: BISMUTH SUBNITRATE
     Dosage: 133 UNK
     Route: 054
  329. BISMUTH SUBGALLATE\BUFEXAMAC\LIDOCAINE HYDROCHLORIDE\TITANIUM DIOXIDE [Suspect]
     Active Substance: BISMUTH SUBGALLATE\BUFEXAMAC\LIDOCAINE HYDROCHLORIDE\TITANIUM DIOXIDE
     Dosage: 133 MG
     Route: 065
  330. BISMUTH SUBGALLATE\BUFEXAMAC\LIDOCAINE HYDROCHLORIDE\TITANIUM DIOXIDE [Suspect]
     Active Substance: BISMUTH SUBGALLATE\BUFEXAMAC\LIDOCAINE HYDROCHLORIDE\TITANIUM DIOXIDE
     Indication: Constipation
     Dosage: 133 ML, QD
     Route: 054
  331. BISMUTH SUBGALLATE\BUFEXAMAC\LIDOCAINE HYDROCHLORIDE\TITANIUM DIOXIDE [Suspect]
     Active Substance: BISMUTH SUBGALLATE\BUFEXAMAC\LIDOCAINE HYDROCHLORIDE\TITANIUM DIOXIDE
     Dosage: 133 ML, QD
     Route: 054
  332. BISMUTH SUBGALLATE\BUFEXAMAC\LIDOCAINE HYDROCHLORIDE\TITANIUM DIOXIDE [Suspect]
     Active Substance: BISMUTH SUBGALLATE\BUFEXAMAC\LIDOCAINE HYDROCHLORIDE\TITANIUM DIOXIDE
     Dosage: 133 ML
     Route: 065
  333. BISMUTH SUBGALLATE\BUFEXAMAC\LIDOCAINE HYDROCHLORIDE\TITANIUM DIOXIDE [Suspect]
     Active Substance: BISMUTH SUBGALLATE\BUFEXAMAC\LIDOCAINE HYDROCHLORIDE\TITANIUM DIOXIDE
     Dosage: 133 ML
     Route: 054
  334. BISMUTH SUBGALLATE\BUFEXAMAC\LIDOCAINE HYDROCHLORIDE\TITANIUM DIOXIDE [Suspect]
     Active Substance: BISMUTH SUBGALLATE\BUFEXAMAC\LIDOCAINE HYDROCHLORIDE\TITANIUM DIOXIDE
     Dosage: 133 ML
     Route: 054
  335. BISMUTH SUBGALLATE\BUFEXAMAC\LIDOCAINE HYDROCHLORIDE\TITANIUM DIOXIDE [Suspect]
     Active Substance: BISMUTH SUBGALLATE\BUFEXAMAC\LIDOCAINE HYDROCHLORIDE\TITANIUM DIOXIDE
     Dosage: 133 UNK
     Route: 054
  336. BISMUTH SUBGALLATE\BUFEXAMAC\LIDOCAINE HYDROCHLORIDE\TITANIUM DIOXIDE [Suspect]
     Active Substance: BISMUTH SUBGALLATE\BUFEXAMAC\LIDOCAINE HYDROCHLORIDE\TITANIUM DIOXIDE
     Dosage: UNK
     Route: 065
  337. BREO ELLIPTA [Suspect]
     Active Substance: FLUTICASONE FUROATE\VILANTEROL TRIFENATATE
     Dosage: UNK, QD
     Route: 055
  338. BREO ELLIPTA [Suspect]
     Active Substance: FLUTICASONE FUROATE\VILANTEROL TRIFENATATE
     Indication: Nutritional supplementation
     Dosage: UNK
     Route: 055
  339. UNSPECIFIED INGREDIENT [Suspect]
     Active Substance: UNSPECIFIED INGREDIENT
     Indication: Dyspnoea
     Dosage: 1 IU/KG
     Route: 065
  340. UNSPECIFIED INGREDIENT [Suspect]
     Active Substance: UNSPECIFIED INGREDIENT
     Dosage: 1 IU/KG
     Route: 065
  341. BUFEXAMAC [Suspect]
     Active Substance: BUFEXAMAC
     Indication: Constipation
     Dosage: UNK
     Route: 065
  342. BUFEXAMAC\LIDOCAINE HYDROCHLORIDE [Suspect]
     Active Substance: BUFEXAMAC\LIDOCAINE HYDROCHLORIDE
     Indication: Constipation
     Dosage: 133.0 ML, PRN
     Route: 054
  343. CEFTRIAXONE [Suspect]
     Active Substance: CEFTRIAXONE
     Dosage: 2 G, QD (1 EVERY 1 DAYS)
     Route: 040
  344. CEFTRIAXONE [Suspect]
     Active Substance: CEFTRIAXONE
     Dosage: 2 G, QD (1 EVERY 1 DAYS)
     Route: 040
  345. CEFTRIAXONE [Suspect]
     Active Substance: CEFTRIAXONE
     Indication: Bacterial infection
     Dosage: 2 G, QD (1 EVERY 1 DAYS)
     Route: 042
  346. CEFTRIAXONE [Suspect]
     Active Substance: CEFTRIAXONE
     Dosage: 2 G, QD (1 EVERY 1 DAYS)
     Route: 042
  347. CEFTRIAXONE [Suspect]
     Active Substance: CEFTRIAXONE
     Dosage: 2 G
     Route: 040
  348. CEFTRIAXONE [Suspect]
     Active Substance: CEFTRIAXONE
     Dosage: 2 G
     Route: 042
  349. CEFTRIAXONE [Suspect]
     Active Substance: CEFTRIAXONE
     Dosage: 2 MG
     Route: 040
  350. CEFTRIAXONE [Suspect]
     Active Substance: CEFTRIAXONE
     Dosage: 2 MG
     Route: 042
  351. CEFTRIAXONE [Suspect]
     Active Substance: CEFTRIAXONE
     Dosage: 2 MG/KG
     Route: 040
  352. CEFTRIAXONE [Suspect]
     Active Substance: CEFTRIAXONE
     Indication: Sepsis
     Dosage: 2 MG/KG
     Route: 042
  353. CEFTRIAXONE [Suspect]
     Active Substance: CEFTRIAXONE
     Dosage: UNK, QD
     Route: 040
  354. CEFTRIAXONE [Suspect]
     Active Substance: CEFTRIAXONE
     Indication: Off label use
     Dosage: UNK, QD
     Route: 042
  355. CEFTRIAXONE [Suspect]
     Active Substance: CEFTRIAXONE
     Dosage: UNK
     Route: 040
  356. CEFTRIAXONE [Suspect]
     Active Substance: CEFTRIAXONE
     Indication: Bacterial infection
     Dosage: UNK
     Route: 042
  357. CEFTRIAXONE [Suspect]
     Active Substance: CEFTRIAXONE
     Dosage: UNK
     Route: 065
  358. CALCITRIOL [Suspect]
     Active Substance: CALCITRIOL
     Dosage: 0.25 MG
     Route: 065
  359. CALCITRIOL [Suspect]
     Active Substance: CALCITRIOL
     Dosage: 0.25 MG
     Route: 048
  360. CALCITRIOL [Suspect]
     Active Substance: CALCITRIOL
     Dosage: 0.25 MG, QD
     Route: 048
  361. CALCITRIOL [Suspect]
     Active Substance: CALCITRIOL
     Dosage: 0.25 MG, QD
     Route: 065
  362. CALCITRIOL [Suspect]
     Active Substance: CALCITRIOL
     Dosage: 0.25 MG, QD
     Route: 065
  363. CALCITRIOL [Suspect]
     Active Substance: CALCITRIOL
     Dosage: 0.25 MG
     Route: 065
  364. CALCITRIOL [Suspect]
     Active Substance: CALCITRIOL
     Indication: Hypovitaminosis
     Dosage: 0.25 UG, QD
     Route: 048
  365. CALCITRIOL [Suspect]
     Active Substance: CALCITRIOL
     Indication: Vitamin D
     Dosage: 0.25 UG, QD
     Route: 048
  366. CALCITRIOL [Suspect]
     Active Substance: CALCITRIOL
     Indication: Vitamin supplementation
     Dosage: 0.25 UG, QD
     Route: 048
  367. CALCITRIOL [Suspect]
     Active Substance: CALCITRIOL
     Dosage: 0.25 UG, QD
     Route: 065
  368. CALCITRIOL [Suspect]
     Active Substance: CALCITRIOL
     Dosage: 0.25 UG, QD
     Route: 065
  369. CALCITRIOL [Suspect]
     Active Substance: CALCITRIOL
     Dosage: 500 MG, Q8H
     Route: 065
  370. CALCITRIOL [Suspect]
     Active Substance: CALCITRIOL
     Dosage: 500 MG, Q8H
     Route: 065
  371. CALCITRIOL [Suspect]
     Active Substance: CALCITRIOL
     Dosage: 500 MG, TID
     Route: 065
  372. CALCITRIOL [Suspect]
     Active Substance: CALCITRIOL
     Dosage: 500 MG, TID
     Route: 065
  373. CALCITRIOL [Suspect]
     Active Substance: CALCITRIOL
     Dosage: 500 UG, Q8H
     Route: 048
  374. CALCITRIOL [Suspect]
     Active Substance: CALCITRIOL
     Dosage: UNK, QD
     Route: 065
  375. CALCITRIOL [Suspect]
     Active Substance: CALCITRIOL
     Dosage: UNK, QD
     Route: 065
  376. CALCITRIOL [Suspect]
     Active Substance: CALCITRIOL
     Dosage: UNK
     Route: 048
  377. CALCITRIOL [Suspect]
     Active Substance: CALCITRIOL
     Dosage: UNK
     Route: 065
  378. CALCITRIOL [Suspect]
     Active Substance: CALCITRIOL
     Dosage: UNK
     Route: 065
  379. CALCITRIOL [Suspect]
     Active Substance: CALCITRIOL
     Dosage: UNK
     Route: 065
  380. CALCIUM CARBONATE [Suspect]
     Active Substance: CALCIUM CARBONATE
     Indication: Product used for unknown indication
     Dosage: UNK
     Route: 065
  381. CALCIUM CHLORIDE [Suspect]
     Active Substance: CALCIUM CHLORIDE
     Dosage: 12.5 MG
     Route: 040
  382. CALCIUM CHLORIDE [Suspect]
     Active Substance: CALCIUM CHLORIDE
     Dosage: 12.5 UNK
     Route: 042
  383. CALCIUM CHLORIDE [Suspect]
     Active Substance: CALCIUM CHLORIDE
     Indication: Nutritional supplementation
     Dosage: UNK
     Route: 065
  384. CALCIUM CHLORIDE [Suspect]
     Active Substance: CALCIUM CHLORIDE
     Dosage: UNK
     Route: 065
  385. CALCIUM GLUCONATE [Suspect]
     Active Substance: CALCIUM GLUCONATE
     Indication: Product used for unknown indication
     Dosage: UNK
     Route: 065
  386. CALCIUM\VITAMIN D [Suspect]
     Active Substance: CALCIUM\VITAMIN D
     Indication: Product used for unknown indication
     Dosage: UNK
     Route: 065
  387. CAPRYLIC ACID [Suspect]
     Active Substance: CAPRYLIC ACID
     Indication: Thrombosis
     Dosage: UNK
     Route: 065
  388. CARBOHYDRATES [Suspect]
     Active Substance: CARBOHYDRATES
     Dosage: 5 MG, QD
     Route: 040
  389. CARBOHYDRATES [Suspect]
     Active Substance: CARBOHYDRATES
     Indication: Vitamin D
     Dosage: 5 MG, QD
     Route: 065
  390. CARBOHYDRATES [Suspect]
     Active Substance: CARBOHYDRATES
     Indication: Vitamin supplementation
     Dosage: 5 MG
     Route: 065
  391. CARBOHYDRATES [Suspect]
     Active Substance: CARBOHYDRATES
     Dosage: 5 UNK, QD
     Route: 042
  392. CARBOHYDRATES [Suspect]
     Active Substance: CARBOHYDRATES
     Dosage: UNK
     Route: 065
  393. SAFFLOWER [Suspect]
     Active Substance: SAFFLOWER
     Indication: Constipation
     Dosage: 17 G, QD
     Route: 065
  394. CEFTRIAXONE SODIUM [Suspect]
     Active Substance: CEFTRIAXONE SODIUM
     Indication: Off label use
     Dosage: 2 G, QD
     Route: 042
  395. CEFTRIAXONE SODIUM [Suspect]
     Active Substance: CEFTRIAXONE SODIUM
     Dosage: 2 G, QD
     Route: 042
  396. CEFTRIAXONE SODIUM [Suspect]
     Active Substance: CEFTRIAXONE SODIUM
     Indication: Sepsis
     Dosage: 2 G
     Route: 042
  397. CEFTRIAXONE SODIUM [Suspect]
     Active Substance: CEFTRIAXONE SODIUM
     Dosage: 2 G
     Route: 042
  398. CEFTRIAXONE SODIUM [Suspect]
     Active Substance: CEFTRIAXONE SODIUM
     Indication: Bacterial infection
     Dosage: 2 MG
     Route: 040
  399. CEFTRIAXONE SODIUM [Suspect]
     Active Substance: CEFTRIAXONE SODIUM
     Dosage: 2 MG
     Route: 040
  400. CEFTRIAXONE SODIUM [Suspect]
     Active Substance: CEFTRIAXONE SODIUM
     Dosage: 500 MG
     Route: 065
  401. CEFTRIAXONE SODIUM [Suspect]
     Active Substance: CEFTRIAXONE SODIUM
     Dosage: UNK, QD
     Route: 065
  402. CEFTRIAXONE SODIUM [Suspect]
     Active Substance: CEFTRIAXONE SODIUM
     Dosage: UNK
     Route: 040
  403. CEFTRIAXONE SODIUM [Suspect]
     Active Substance: CEFTRIAXONE SODIUM
     Dosage: UNK
     Route: 042
  404. CEFTRIAXONE SODIUM [Suspect]
     Active Substance: CEFTRIAXONE SODIUM
     Dosage: UNK
     Route: 042
  405. CEFTRIAXONE SODIUM [Suspect]
     Active Substance: CEFTRIAXONE SODIUM
     Dosage: UNK
     Route: 065
  406. CEFTRIAXONE SODIUM [Suspect]
     Active Substance: CEFTRIAXONE SODIUM
     Dosage: UNK
     Route: 065
  407. CEFTRIAXONE SODIUM [Suspect]
     Active Substance: CEFTRIAXONE SODIUM
     Dosage: UNK, QD
     Route: 042
  408. CHLORAMPHENICOL [Suspect]
     Active Substance: CHLORAMPHENICOL
     Indication: Product used for unknown indication
     Dosage: UNK
     Route: 065
  409. CHLORAMPHENICOL PALMITATE [Suspect]
     Active Substance: CHLORAMPHENICOL PALMITATE
     Indication: Bacterial infection
     Dosage: UNK
     Route: 065
  410. CHLORAMPHENICOL PALMITATE [Suspect]
     Active Substance: CHLORAMPHENICOL PALMITATE
     Dosage: UNK
     Route: 065
  411. CHLORAMPHENICOL PALMITATE [Suspect]
     Active Substance: CHLORAMPHENICOL PALMITATE
     Dosage: UNK
     Route: 065
  412. CHLORAMPHENICOL\HYDROCORTISONE ACETATE\METRONIDAZOLE\NATAMYCIN [Suspect]
     Active Substance: CHLORAMPHENICOL\HYDROCORTISONE ACETATE\METRONIDAZOLE\NATAMYCIN
     Dosage: 1500 MG, TID
     Route: 065
  413. CHLORAMPHENICOL\HYDROCORTISONE ACETATE\METRONIDAZOLE\NATAMYCIN [Suspect]
     Active Substance: CHLORAMPHENICOL\HYDROCORTISONE ACETATE\METRONIDAZOLE\NATAMYCIN
     Indication: Bacterial infection
     Dosage: 1500 MG
     Route: 065
  414. CHLORAMPHENICOL\HYDROCORTISONE ACETATE\METRONIDAZOLE\NATAMYCIN [Suspect]
     Active Substance: CHLORAMPHENICOL\HYDROCORTISONE ACETATE\METRONIDAZOLE\NATAMYCIN
     Dosage: 1500 MG
     Route: 065
  415. CHLORAMPHENICOL\HYDROCORTISONE ACETATE\METRONIDAZOLE\NATAMYCIN [Suspect]
     Active Substance: CHLORAMPHENICOL\HYDROCORTISONE ACETATE\METRONIDAZOLE\NATAMYCIN
     Dosage: 500 MG, Q8H
     Route: 065
  416. CHLORAMPHENICOL\HYDROCORTISONE ACETATE\METRONIDAZOLE\NATAMYCIN [Suspect]
     Active Substance: CHLORAMPHENICOL\HYDROCORTISONE ACETATE\METRONIDAZOLE\NATAMYCIN
     Dosage: 500 MG, TID
     Route: 065
  417. CHLORAMPHENICOL\HYDROCORTISONE ACETATE\METRONIDAZOLE\NATAMYCIN [Suspect]
     Active Substance: CHLORAMPHENICOL\HYDROCORTISONE ACETATE\METRONIDAZOLE\NATAMYCIN
     Indication: Anaemia
     Dosage: UNK
     Route: 065
  418. CHLORAMPHENICOL\HYDROCORTISONE ACETATE\METRONIDAZOLE\NATAMYCIN [Suspect]
     Active Substance: CHLORAMPHENICOL\HYDROCORTISONE ACETATE\METRONIDAZOLE\NATAMYCIN
     Dosage: UNK
     Route: 065
  419. CHLORPHENIRAMINE [Suspect]
     Active Substance: CHLORPHENIRAMINE
     Dosage: 2 G, QD
     Route: 065
  420. CHLORPHENIRAMINE [Suspect]
     Active Substance: CHLORPHENIRAMINE
     Dosage: 2 ML, QD
     Route: 065
  421. CHLORPHENIRAMINE [Suspect]
     Active Substance: CHLORPHENIRAMINE
     Indication: Thrombosis
     Dosage: UNK
     Route: 065
  422. ANHYDROUS CITRIC ACID [Suspect]
     Active Substance: ANHYDROUS CITRIC ACID
     Indication: Nutritional supplementation
     Dosage: UNK
     Route: 065
  423. CORTISONE [Suspect]
     Active Substance: CORTISONE
     Indication: Product used for unknown indication
     Dosage: UNK
     Route: 065
  424. COUMADIN [Suspect]
     Active Substance: WARFARIN SODIUM
     Indication: Thrombosis
     Dosage: 2 G, QD
     Route: 048
  425. COUMADIN [Suspect]
     Active Substance: WARFARIN SODIUM
     Dosage: 2 MG, QD
     Route: 048
  426. COUMADIN [Suspect]
     Active Substance: WARFARIN SODIUM
     Dosage: 2 ML, QD
     Route: 048
  427. .ALPHA.-TOCOPHEROL, D- [Suspect]
     Active Substance: .ALPHA.-TOCOPHEROL, D-
     Indication: Nutritional supplementation
     Dosage: 12.5 G
     Route: 042
  428. .ALPHA.-TOCOPHEROL, D- [Suspect]
     Active Substance: .ALPHA.-TOCOPHEROL, D-
     Dosage: 12.5 G
     Route: 065
  429. DOBUTAMINE HYDROCHLORIDE [Suspect]
     Active Substance: DOBUTAMINE HYDROCHLORIDE
     Dosage: UNK, QD (1 EVERY 1 DAYS)
     Route: 042
  430. DOBUTAMINE HYDROCHLORIDE [Suspect]
     Active Substance: DOBUTAMINE HYDROCHLORIDE
     Indication: Cardiogenic shock
     Dosage: UNK
     Route: 042
  431. DOBUTAMINE HYDROCHLORIDE [Suspect]
     Active Substance: DOBUTAMINE HYDROCHLORIDE
     Indication: Off label use
     Dosage: UNK
     Route: 042
  432. DOBUTAMINE HYDROCHLORIDE [Suspect]
     Active Substance: DOBUTAMINE HYDROCHLORIDE
     Dosage: UNK
     Route: 042
  433. DOBUTAMINE HYDROCHLORIDE [Suspect]
     Active Substance: DOBUTAMINE HYDROCHLORIDE
     Dosage: UNK
     Route: 042
  434. DOBUTAMINE HYDROCHLORIDE [Suspect]
     Active Substance: DOBUTAMINE HYDROCHLORIDE
     Dosage: UNK
     Route: 042
  435. DOBUTAMINE HYDROCHLORIDE [Suspect]
     Active Substance: DOBUTAMINE HYDROCHLORIDE
     Dosage: UNK
     Route: 065
  436. DOBUTAMINE HYDROCHLORIDE [Suspect]
     Active Substance: DOBUTAMINE HYDROCHLORIDE
     Dosage: UNK
     Route: 065
  437. DOCUSATE SODIUM [Suspect]
     Active Substance: DOCUSATE SODIUM
     Indication: Product used for unknown indication
     Dosage: UNK
     Route: 065
  438. DALTEPARIN SODIUM [Suspect]
     Active Substance: DALTEPARIN SODIUM
     Indication: Thrombosis
     Dosage: 12.5 MG
     Route: 042
  439. DALTEPARIN SODIUM [Suspect]
     Active Substance: DALTEPARIN SODIUM
     Dosage: 12.5 ML
     Route: 042
  440. DALTEPARIN SODIUM [Suspect]
     Active Substance: DALTEPARIN SODIUM
     Indication: Pulmonary embolism
     Dosage: 1500 MG
     Route: 065
  441. DALTEPARIN SODIUM [Suspect]
     Active Substance: DALTEPARIN SODIUM
     Dosage: 2.5 ML
     Route: 065
  442. DALTEPARIN SODIUM [Suspect]
     Active Substance: DALTEPARIN SODIUM
     Dosage: UNK
     Route: 048
  443. DALTEPARIN SODIUM [Suspect]
     Active Substance: DALTEPARIN SODIUM
     Dosage: UNK
     Route: 065
  444. DALTEPARIN SODIUM [Suspect]
     Active Substance: DALTEPARIN SODIUM
     Dosage: UNK
     Route: 065
  445. DARBEPOETIN ALFA [Suspect]
     Active Substance: DARBEPOETIN ALFA
     Dosage: 0.71 UG, QW
     Route: 042
  446. DARBEPOETIN ALFA [Suspect]
     Active Substance: DARBEPOETIN ALFA
     Indication: Anaemia
     Dosage: 1.42 UG, QW
     Route: 042
  447. DARBEPOETIN ALFA [Suspect]
     Active Substance: DARBEPOETIN ALFA
     Dosage: 10.0 UG
     Route: 042
  448. DARBEPOETIN ALFA [Suspect]
     Active Substance: DARBEPOETIN ALFA
     Dosage: 20.0 MG, QW
     Route: 042
  449. DARBEPOETIN ALFA [Suspect]
     Active Substance: DARBEPOETIN ALFA
     Dosage: UNK
     Route: 065
  450. DEXPANTHENOL [Suspect]
     Active Substance: DEXPANTHENOL
     Indication: Constipation
     Dosage: UNK
     Route: 065
  451. DEXILANT [Suspect]
     Active Substance: DEXLANSOPRAZOLE
     Dosage: 6 DOSAGE FORM, Q6H (1 EVERY 6 HOURS)
     Route: 048
  452. DEXILANT [Suspect]
     Active Substance: DEXLANSOPRAZOLE
     Indication: Product used for unknown indication
     Dosage: 60 MG
     Route: 048
  453. DEXILANT [Suspect]
     Active Substance: DEXLANSOPRAZOLE
     Dosage: 60 MG, QD
     Route: 065
  454. DEXILANT [Suspect]
     Active Substance: DEXLANSOPRAZOLE
     Dosage: 60 MG, QD (DELAYED RELEASE)
     Route: 065
  455. DEXLANSOPRAZOLE [Suspect]
     Active Substance: DEXLANSOPRAZOLE
     Dosage: 6 DOSAGE FORM, Q6H
     Route: 065
  456. DEXLANSOPRAZOLE [Suspect]
     Active Substance: DEXLANSOPRAZOLE
     Dosage: 60 MG, QD
     Route: 065
  457. DEXLANSOPRAZOLE [Suspect]
     Active Substance: DEXLANSOPRAZOLE
     Indication: Product used for unknown indication
     Dosage: UNK, QD
     Route: 065
  458. DEXLANSOPRAZOLE [Suspect]
     Active Substance: DEXLANSOPRAZOLE
     Dosage: UNK
     Route: 065
  459. DEXLANSOPRAZOLE [Suspect]
     Active Substance: DEXLANSOPRAZOLE
     Dosage: UNK (COATED TABLET)
     Route: 065
  460. DEXLANSOPRAZOLE [Suspect]
     Active Substance: DEXLANSOPRAZOLE
     Dosage: UNK (COATED TABLET)
     Route: 065
  461. DEXPANTHENOL [Suspect]
     Active Substance: DEXPANTHENOL
     Indication: Constipation
     Dosage: 17 G, QD
     Route: 065
  462. DEXTROSE [Suspect]
     Active Substance: DEXTROSE MONOHYDRATE
     Dosage: 12.5 MG, QD
     Route: 065
  463. DEXTROSE [Suspect]
     Active Substance: DEXTROSE MONOHYDRATE
     Dosage: 12.5 MG
     Route: 065
  464. DEXTROSE [Suspect]
     Active Substance: DEXTROSE MONOHYDRATE
     Dosage: 12.5 MG, PRN
     Route: 065
  465. DEXTROSE [Suspect]
     Active Substance: DEXTROSE MONOHYDRATE
     Dosage: 12.5 G, QD
     Route: 042
  466. DEXTROSE [Suspect]
     Active Substance: DEXTROSE MONOHYDRATE
     Dosage: 12.5 G
     Route: 040
  467. DEXTROSE [Suspect]
     Active Substance: DEXTROSE MONOHYDRATE
     Dosage: 12.5 G
     Route: 065
  468. DEXTROSE [Suspect]
     Active Substance: DEXTROSE MONOHYDRATE
     Dosage: 12.5 G, PRN
     Route: 042
  469. DEXTROSE [Suspect]
     Active Substance: DEXTROSE MONOHYDRATE
     Indication: Nutritional supplementation
     Dosage: 12.5 G, PRN (LIQUID PARENTERAL)
     Route: 042
  470. DEXTROSE [Suspect]
     Active Substance: DEXTROSE MONOHYDRATE
     Dosage: 12.5 MG, QD
     Route: 042
  471. DEXTROSE [Suspect]
     Active Substance: DEXTROSE MONOHYDRATE
     Dosage: 250 ML, QD, (IV USE)
     Route: 065
  472. DEXTROSE [Suspect]
     Active Substance: DEXTROSE MONOHYDRATE
     Dosage: 250 ML, QD, (IV USE)
     Route: 065
  473. DEXTROSE [Suspect]
     Active Substance: DEXTROSE MONOHYDRATE
     Dosage: 50 ML, QD
     Route: 065
  474. DEXTROSE [Suspect]
     Active Substance: DEXTROSE MONOHYDRATE
     Dosage: 50 ML, PRN, (IV USE)
     Route: 065
  475. DEXTROSE [Suspect]
     Active Substance: DEXTROSE MONOHYDRATE
     Dosage: UNK
     Route: 042
  476. DEXTROSE [Suspect]
     Active Substance: DEXTROSE MONOHYDRATE
     Dosage: UNK
     Route: 065
  477. DEXTROSE [Suspect]
     Active Substance: DEXTROSE MONOHYDRATE
     Dosage: UNK
     Route: 065
  478. DEXTROSE\SODIUM CHLORIDE [Suspect]
     Active Substance: DEXTROSE\SODIUM CHLORIDE
     Indication: Nutritional supplementation
     Dosage: 12.5 G, QD
     Route: 042
  479. DEXTROSE\SODIUM CHLORIDE [Suspect]
     Active Substance: DEXTROSE\SODIUM CHLORIDE
     Dosage: 12.5 MG
     Route: 042
  480. DIPROSONE [Suspect]
     Active Substance: BETAMETHASONE DIPROPIONATE
     Dosage: 1 DOSAGE FORM, QD
     Route: 042
  481. DIPROSONE [Suspect]
     Active Substance: BETAMETHASONE DIPROPIONATE
     Dosage: 1 DOSAGE FORM, QD
     Route: 042
  482. DIPROSONE [Suspect]
     Active Substance: BETAMETHASONE DIPROPIONATE
     Indication: Cardiogenic shock
     Dosage: 1 DOSAGE FORM, QD
     Route: 058
  483. DIPROSONE [Suspect]
     Active Substance: BETAMETHASONE DIPROPIONATE
     Dosage: 1 DOSAGE FORM, QD
     Route: 065
  484. DIPROSONE [Suspect]
     Active Substance: BETAMETHASONE DIPROPIONATE
     Dosage: 1 DOSAGE FORM, QD
     Route: 065
  485. DIPROSONE [Suspect]
     Active Substance: BETAMETHASONE DIPROPIONATE
     Indication: Bacterial infection
     Dosage: 10 MG, QD
     Route: 061
  486. DIPROSONE [Suspect]
     Active Substance: BETAMETHASONE DIPROPIONATE
     Dosage: 10 MG
     Route: 061
  487. DIPROSONE [Suspect]
     Active Substance: BETAMETHASONE DIPROPIONATE
     Dosage: 12.5 MG
     Route: 040
  488. DIPROSONE [Suspect]
     Active Substance: BETAMETHASONE DIPROPIONATE
     Indication: Swelling
     Dosage: UNK, QD
     Route: 061
  489. DIPROSONE [Suspect]
     Active Substance: BETAMETHASONE DIPROPIONATE
     Dosage: UNK, QD
     Route: 061
  490. DIPROSONE [Suspect]
     Active Substance: BETAMETHASONE DIPROPIONATE
     Dosage: UNK, QD
     Route: 061
  491. DIPROSONE [Suspect]
     Active Substance: BETAMETHASONE DIPROPIONATE
     Dosage: UNK, QD
     Route: 061
  492. DIPROSONE [Suspect]
     Active Substance: BETAMETHASONE DIPROPIONATE
     Dosage: UNK, QD
     Route: 065
  493. DIPROSONE [Suspect]
     Active Substance: BETAMETHASONE DIPROPIONATE
     Dosage: 12.5 UNK
     Route: 042
  494. DIPROSONE [Suspect]
     Active Substance: BETAMETHASONE DIPROPIONATE
     Indication: Off label use
     Dosage: UNK
     Route: 061
  495. DIPROSONE [Suspect]
     Active Substance: BETAMETHASONE DIPROPIONATE
     Dosage: UNK
     Route: 061
  496. DIPROSONE [Suspect]
     Active Substance: BETAMETHASONE DIPROPIONATE
     Dosage: UNK, QD
     Route: 065
  497. DIPYRONE [Suspect]
     Active Substance: DIPYRONE
     Dosage: 1 MG
     Route: 065
  498. DIPYRONE [Suspect]
     Active Substance: DIPYRONE
     Indication: Vitamin supplementation
     Dosage: 5 MG, QD
     Route: 042
  499. DIPYRONE [Suspect]
     Active Substance: DIPYRONE
     Dosage: 5 MG, QD
     Route: 042
  500. DIPYRONE [Suspect]
     Active Substance: DIPYRONE
     Indication: Intentional product misuse
     Dosage: 5 MG
     Route: 042
  501. DIPYRONE [Suspect]
     Active Substance: DIPYRONE
     Dosage: 5 MG
     Route: 042
  502. DIPYRONE [Suspect]
     Active Substance: DIPYRONE
     Dosage: 5 MG
     Route: 042
  503. DIPYRONE [Suspect]
     Active Substance: DIPYRONE
     Dosage: 5 MG (IV USE)
     Route: 030
  504. DIPYRONE [Suspect]
     Active Substance: DIPYRONE
     Dosage: UNK
     Route: 042
  505. DIPYRONE [Suspect]
     Active Substance: DIPYRONE
     Indication: Off label use
     Dosage: UNK
     Route: 065
  506. DIPYRONE [Suspect]
     Active Substance: DIPYRONE
     Dosage: UNK
     Route: 065
  507. DISTIGMINE BROMIDE [Suspect]
     Active Substance: DISTIGMINE BROMIDE
     Dosage: 1 IU, QD
     Route: 048
  508. DISTIGMINE BROMIDE [Suspect]
     Active Substance: DISTIGMINE BROMIDE
     Dosage: 1 IU, QD
     Route: 048
  509. DISTIGMINE BROMIDE [Suspect]
     Active Substance: DISTIGMINE BROMIDE
     Dosage: 1 IU, QD
     Route: 048
  510. DISTIGMINE BROMIDE [Suspect]
     Active Substance: DISTIGMINE BROMIDE
     Indication: Dyspnoea
     Dosage: 1 IU, QD
     Route: 048
  511. DISTIGMINE BROMIDE [Suspect]
     Active Substance: DISTIGMINE BROMIDE
     Dosage: 1 IU, QD
     Route: 048
  512. DISTIGMINE BROMIDE [Suspect]
     Active Substance: DISTIGMINE BROMIDE
     Dosage: 1 IU, QD
     Route: 048
  513. DISTIGMINE BROMIDE [Suspect]
     Active Substance: DISTIGMINE BROMIDE
     Dosage: 1 IU, QD
     Route: 048
  514. DISTIGMINE BROMIDE [Suspect]
     Active Substance: DISTIGMINE BROMIDE
     Dosage: UNK, QD
     Route: 065
  515. DISTIGMINE BROMIDE [Suspect]
     Active Substance: DISTIGMINE BROMIDE
     Dosage: UNK, QD
     Route: 065
  516. DISTIGMINE BROMIDE [Suspect]
     Active Substance: DISTIGMINE BROMIDE
     Dosage: 1 IU
     Route: 048
  517. DISTIGMINE BROMIDE [Suspect]
     Active Substance: DISTIGMINE BROMIDE
     Indication: Off label use
     Dosage: UNK
     Route: 048
  518. DISTIGMINE BROMIDE [Suspect]
     Active Substance: DISTIGMINE BROMIDE
     Dosage: UNK
     Route: 065
  519. DISTIGMINE BROMIDE [Suspect]
     Active Substance: DISTIGMINE BROMIDE
     Dosage: UNK
     Route: 065
  520. DISTIGMINE BROMIDE [Suspect]
     Active Substance: DISTIGMINE BROMIDE
     Dosage: UNK
     Route: 065
  521. .ALPHA.-TOCOPHEROL SUCCINATE, DL- [Suspect]
     Active Substance: .ALPHA.-TOCOPHEROL SUCCINATE, DL-
     Indication: Nutritional supplementation
     Dosage: 12.5 G
     Route: 042
  522. .ALPHA.-TOCOPHEROL SUCCINATE, DL- [Suspect]
     Active Substance: .ALPHA.-TOCOPHEROL SUCCINATE, DL-
     Indication: Constipation
  523. .ALPHA.-TOCOPHEROL ACETATE, DL- [Suspect]
     Active Substance: .ALPHA.-TOCOPHEROL ACETATE, DL-
     Indication: Constipation
     Dosage: UNK
     Route: 065
  524. DULCOLAX (BISACODYL) [Suspect]
     Active Substance: BISACODYL
     Indication: Drug therapy
     Dosage: 10 MG, QD
     Route: 054
  525. DULCOLAX (BISACODYL) [Suspect]
     Active Substance: BISACODYL
     Indication: Off label use
     Dosage: 10 MG, QD
     Route: 054
  526. DULCOLAX (BISACODYL) [Suspect]
     Active Substance: BISACODYL
     Indication: Ventricular fibrillation
     Dosage: 10 MG, QD
     Route: 054
  527. DULCOLAX (BISACODYL) [Suspect]
     Active Substance: BISACODYL
     Dosage: 10 MG, QD
     Route: 054
  528. DULCOLAX (BISACODYL) [Suspect]
     Active Substance: BISACODYL
     Dosage: 10 MG
     Route: 054
  529. DULCOLAX (BISACODYL) [Suspect]
     Active Substance: BISACODYL
     Indication: Constipation
     Dosage: 10 MG, PRN
     Route: 054
  530. DULCOLAX (BISACODYL) [Suspect]
     Active Substance: BISACODYL
     Dosage: 10 MG, PRN
     Route: 054
  531. DULCOLAX (BISACODYL) [Suspect]
     Active Substance: BISACODYL
     Dosage: 10 MG, PRN
     Route: 054
  532. DULCOLAX (BISACODYL) [Suspect]
     Active Substance: BISACODYL
     Dosage: UNK
     Route: 054
  533. DULCOLAX (BISACODYL) [Suspect]
     Active Substance: BISACODYL
     Indication: Dyspnoea
     Dosage: UNK
     Route: 065
  534. DULCOLAX (BISACODYL) [Suspect]
     Active Substance: BISACODYL
     Dosage: UNK
     Route: 065
  535. FENOTEROL HYDROBROMIDE\IPRATROPIUM BROMIDE [Suspect]
     Active Substance: FENOTEROL HYDROBROMIDE\IPRATROPIUM BROMIDE
     Indication: Dyspnoea
     Dosage: 1 DOSAGE FORM, BID (2 EVERY 1 DAYS) (SOLUTION INHALATION)
     Route: 065
  536. FENOTEROL HYDROBROMIDE\IPRATROPIUM BROMIDE [Suspect]
     Active Substance: FENOTEROL HYDROBROMIDE\IPRATROPIUM BROMIDE
     Dosage: 3 DOSAGE FORM, QD (1 EVERY 1 DAYS)
     Route: 065
  537. FENOTEROL HYDROBROMIDE\IPRATROPIUM BROMIDE [Suspect]
     Active Substance: FENOTEROL HYDROBROMIDE\IPRATROPIUM BROMIDE
     Dosage: 4 IU, QD (1 EVERY 1 DAYS)
     Route: 050
  538. FENOTEROL HYDROBROMIDE\IPRATROPIUM BROMIDE [Suspect]
     Active Substance: FENOTEROL HYDROBROMIDE\IPRATROPIUM BROMIDE
     Dosage: UNK
     Route: 065
  539. FENOTEROL HYDROBROMIDE [Suspect]
     Active Substance: FENOTEROL HYDROBROMIDE
     Dosage: 1 DOSAGE FORM, QD
     Route: 065
  540. FENOTEROL HYDROBROMIDE [Suspect]
     Active Substance: FENOTEROL HYDROBROMIDE
     Indication: Dyspnoea
     Dosage: 1 DOSAGE FORM, Q8H
     Route: 065
  541. FENOTEROL HYDROBROMIDE [Suspect]
     Active Substance: FENOTEROL HYDROBROMIDE
     Dosage: 1 DOSAGE FORM
     Route: 065
  542. FENOTEROL HYDROBROMIDE [Suspect]
     Active Substance: FENOTEROL HYDROBROMIDE
     Dosage: 3 DOSAGE FORM
     Route: 050
  543. FENOTEROL HYDROBROMIDE [Suspect]
     Active Substance: FENOTEROL HYDROBROMIDE
     Dosage: 4 IU, QD
     Route: 065
  544. FENOTEROL HYDROBROMIDE [Suspect]
     Active Substance: FENOTEROL HYDROBROMIDE
     Dosage: 4 DOSAGE FORM
     Route: 065
  545. FENOTEROL HYDROBROMIDE [Suspect]
     Active Substance: FENOTEROL HYDROBROMIDE
     Dosage: 4 IU
     Route: 065
  546. FENOTEROL HYDROBROMIDE [Suspect]
     Active Substance: FENOTEROL HYDROBROMIDE
     Dosage: UNK, QD
     Route: 050
  547. FENOTEROL HYDROBROMIDE [Suspect]
     Active Substance: FENOTEROL HYDROBROMIDE
     Dosage: UNK, QD
     Route: 065
  548. FENOTEROL HYDROBROMIDE [Suspect]
     Active Substance: FENOTEROL HYDROBROMIDE
     Dosage: UNK, QD
     Route: 065
  549. FENOTEROL HYDROBROMIDE [Suspect]
     Active Substance: FENOTEROL HYDROBROMIDE
     Dosage: UNK, QD
     Route: 065
  550. FENOTEROL HYDROBROMIDE [Suspect]
     Active Substance: FENOTEROL HYDROBROMIDE
     Dosage: UNK, TID
     Route: 050
  551. FENOTEROL HYDROBROMIDE [Suspect]
     Active Substance: FENOTEROL HYDROBROMIDE
     Dosage: UNK
     Route: 050
  552. FENOTEROL HYDROBROMIDE [Suspect]
     Active Substance: FENOTEROL HYDROBROMIDE
     Dosage: UNK
     Route: 050
  553. FENOTEROL HYDROBROMIDE [Suspect]
     Active Substance: FENOTEROL HYDROBROMIDE
     Dosage: UNK
     Route: 065
  554. FERROUS SUCCINATE [Suspect]
     Active Substance: FERROUS SUCCINATE
     Indication: Iron deficiency
     Dosage: UNK, Q6H (1 EVERY 6 HOURS)
     Route: 042
  555. FERROUS SUCCINATE [Suspect]
     Active Substance: FERROUS SUCCINATE
     Dosage: UNK, QID (4 EVERY 1 DAYS)
     Route: 042
  556. DIETARY SUPPLEMENT [Suspect]
     Active Substance: DIETARY SUPPLEMENT
     Dosage: 5 MG, QD
     Route: 042
  557. DIETARY SUPPLEMENT [Suspect]
     Active Substance: DIETARY SUPPLEMENT
     Dosage: 5 MG, QD
     Route: 042
  558. DIETARY SUPPLEMENT [Suspect]
     Active Substance: DIETARY SUPPLEMENT
     Indication: Vitamin supplementation
     Dosage: 5.0 MG, QD (1 EVERY 1 DAYS) (POWDER)
     Route: 065
  559. HERBALS\PLANTAGO OVATA SEED COAT [Suspect]
     Active Substance: HERBALS\PLANTAGO OVATA SEED COAT
     Indication: Vitamin supplementation
     Dosage: 5.0 MG, QD (1 EVERY 1 DAYS)
     Route: 042
  560. FLUTICASONE FUROATE\VILANTEROL TRIFENATATE [Suspect]
     Active Substance: FLUTICASONE FUROATE\VILANTEROL TRIFENATATE
     Dosage: 1 IU
     Route: 048
  561. FLUTICASONE FUROATE\VILANTEROL TRIFENATATE [Suspect]
     Active Substance: FLUTICASONE FUROATE\VILANTEROL TRIFENATATE
     Indication: Dyspnoea
     Dosage: 3 UNK
     Route: 065
  562. FLUTICASONE FUROATE\VILANTEROL TRIFENATATE [Suspect]
     Active Substance: FLUTICASONE FUROATE\VILANTEROL TRIFENATATE
     Indication: Blood phosphorus increased
     Dosage: UNK
     Route: 065
  563. FLUTICASONE FUROATE\VILANTEROL TRIFENATATE [Suspect]
     Active Substance: FLUTICASONE FUROATE\VILANTEROL TRIFENATATE
     Indication: Intentional product misuse
     Dosage: UNK
     Route: 065
  564. FLUTICASONE FUROATE\VILANTEROL TRIFENATATE [Suspect]
     Active Substance: FLUTICASONE FUROATE\VILANTEROL TRIFENATATE
     Indication: Nutritional supplementation
     Dosage: UNK
     Route: 065
  565. FLUTICASONE FUROATE\VILANTEROL TRIFENATATE [Suspect]
     Active Substance: FLUTICASONE FUROATE\VILANTEROL TRIFENATATE
     Indication: Off label use
     Dosage: UNK
     Route: 065
  566. FLUTICASONE PROPIONATE [Suspect]
     Active Substance: FLUTICASONE PROPIONATE
     Indication: Dyspnoea
     Dosage: 1.0 IU
     Route: 048
  567. FLUTICASONE PROPIONATE [Suspect]
     Active Substance: FLUTICASONE PROPIONATE
     Indication: Nutritional supplementation
     Dosage: UNK
     Route: 065
  568. FLUTICASONE FUROATE\VILANTEROL TRIFENATATE [Suspect]
     Active Substance: FLUTICASONE FUROATE\VILANTEROL TRIFENATATE
     Dosage: 1 IU
     Route: 065
  569. FLUTICASONE FUROATE\VILANTEROL TRIFENATATE [Suspect]
     Active Substance: FLUTICASONE FUROATE\VILANTEROL TRIFENATATE
     Dosage: 1 DOSAGE FORM
     Route: 050
  570. FLUTICASONE FUROATE\VILANTEROL TRIFENATATE [Suspect]
     Active Substance: FLUTICASONE FUROATE\VILANTEROL TRIFENATATE
     Dosage: 1 DOSAGE FORM
     Route: 065
  571. FLUTICASONE FUROATE\VILANTEROL TRIFENATATE [Suspect]
     Active Substance: FLUTICASONE FUROATE\VILANTEROL TRIFENATATE
     Indication: Blood phosphorus increased
     Dosage: 1.0 IU, QD (1 EVERY 1 DAYS)
     Route: 048
  572. FLUTICASONE FUROATE\VILANTEROL TRIFENATATE [Suspect]
     Active Substance: FLUTICASONE FUROATE\VILANTEROL TRIFENATATE
     Indication: Dyspnoea
     Dosage: 1.0 IU, QD (1 EVERY 1 DAYS)
     Route: 065
  573. FLUTICASONE FUROATE\VILANTEROL TRIFENATATE [Suspect]
     Active Substance: FLUTICASONE FUROATE\VILANTEROL TRIFENATATE
     Dosage: UNK, QD
     Route: 048
  574. FLUTICASONE FUROATE\VILANTEROL TRIFENATATE [Suspect]
     Active Substance: FLUTICASONE FUROATE\VILANTEROL TRIFENATATE
     Dosage: UNK
     Route: 055
  575. FLUTICASONE FUROATE\VILANTEROL TRIFENATATE [Suspect]
     Active Substance: FLUTICASONE FUROATE\VILANTEROL TRIFENATATE
     Indication: Nutritional supplementation
     Dosage: UNK
     Route: 058
  576. FLUTICASONE FUROATE\VILANTEROL TRIFENATATE [Suspect]
     Active Substance: FLUTICASONE FUROATE\VILANTEROL TRIFENATATE
     Dosage: UNK
     Route: 065
  577. FLUTICASONE FUROATE\VILANTEROL TRIFENATATE [Suspect]
     Active Substance: FLUTICASONE FUROATE\VILANTEROL TRIFENATATE
     Dosage: UNK
     Route: 065
  578. FLUTICASONE FUROATE\VILANTEROL TRIFENATATE [Suspect]
     Active Substance: FLUTICASONE FUROATE\VILANTEROL TRIFENATATE
     Dosage: UNK
     Route: 065
  579. FLUTICASONE FUROATE\VILANTEROL TRIFENATATE [Suspect]
     Active Substance: FLUTICASONE FUROATE\VILANTEROL TRIFENATATE
     Dosage: UNK
     Route: 065
  580. FLUTICASONE FUROATE\VILANTEROL TRIFENATATE [Suspect]
     Active Substance: FLUTICASONE FUROATE\VILANTEROL TRIFENATATE
     Dosage: UNK
     Route: 065
  581. FOSRENOL [Suspect]
     Active Substance: LANTHANUM CARBONATE
     Dosage: 500 UG
     Route: 048
  582. FOSRENOL [Suspect]
     Active Substance: LANTHANUM CARBONATE
     Dosage: 500 UG
     Route: 065
  583. FOSRENOL [Suspect]
     Active Substance: LANTHANUM CARBONATE
     Dosage: 500 UG, PRN
     Route: 048
  584. FOSRENOL [Suspect]
     Active Substance: LANTHANUM CARBONATE
     Indication: Blood phosphorus increased
     Dosage: 500 MG, QD
     Route: 048
  585. FOSRENOL [Suspect]
     Active Substance: LANTHANUM CARBONATE
     Dosage: 500 MG, QD
     Route: 065
  586. FOSRENOL [Suspect]
     Active Substance: LANTHANUM CARBONATE
     Dosage: 500 MG, QD
     Route: 065
  587. FOSRENOL [Suspect]
     Active Substance: LANTHANUM CARBONATE
     Dosage: 500 MG
     Route: 065
  588. FOSRENOL [Suspect]
     Active Substance: LANTHANUM CARBONATE
     Dosage: 500 MG
     Route: 065
  589. FOSRENOL [Suspect]
     Active Substance: LANTHANUM CARBONATE
     Dosage: 500 MG, PRN
     Route: 065
  590. FOSRENOL [Suspect]
     Active Substance: LANTHANUM CARBONATE
     Dosage: 500 UG, QD
     Route: 048
  591. FOSRENOL [Suspect]
     Active Substance: LANTHANUM CARBONATE
     Dosage: 500 UG, QD
     Route: 065
  592. FOSRENOL [Suspect]
     Active Substance: LANTHANUM CARBONATE
     Dosage: 500 UG, QD
     Route: 065
  593. FOSRENOL [Suspect]
     Active Substance: LANTHANUM CARBONATE
     Dosage: 500 UG
     Route: 048
  594. FOSRENOL [Suspect]
     Active Substance: LANTHANUM CARBONATE
     Dosage: 500 UG, PRN
     Route: 048
  595. FRAGMIN [Suspect]
     Active Substance: DALTEPARIN SODIUM
     Indication: Thrombosis
     Dosage: 12.5 MG
     Route: 048
  596. FRAGMIN [Suspect]
     Active Substance: DALTEPARIN SODIUM
     Dosage: 12.5 MG
     Route: 065
  597. FRAGMIN [Suspect]
     Active Substance: DALTEPARIN SODIUM
     Dosage: 2.5 MG
     Route: 065
  598. FRAGMIN [Suspect]
     Active Substance: DALTEPARIN SODIUM
     Dosage: 2.5 ML, QD
     Route: 048
  599. FRAGMIN [Suspect]
     Active Substance: DALTEPARIN SODIUM
     Dosage: 2.5 ML, QD
     Route: 065
  600. FRAGMIN [Suspect]
     Active Substance: DALTEPARIN SODIUM
     Dosage: 2.5 ML
     Route: 042
  601. FRAGMIN [Suspect]
     Active Substance: DALTEPARIN SODIUM
     Dosage: 2.5 ML
     Route: 065
  602. FRAGMIN [Suspect]
     Active Substance: DALTEPARIN SODIUM
     Indication: Pulmonary embolism
     Dosage: 2.5 ML, PRN
     Route: 042
  603. FRAGMIN [Suspect]
     Active Substance: DALTEPARIN SODIUM
     Dosage: 2.5 UNK
     Route: 065
  604. FRAGMIN [Suspect]
     Active Substance: DALTEPARIN SODIUM
     Dosage: UNK
     Route: 042
  605. FRAGMIN [Suspect]
     Active Substance: DALTEPARIN SODIUM
     Dosage: UNK
     Route: 048
  606. FRAGMIN [Suspect]
     Active Substance: DALTEPARIN SODIUM
     Dosage: UNK
     Route: 065
  607. FRAGMIN [Suspect]
     Active Substance: DALTEPARIN SODIUM
     Dosage: UNK
     Route: 065
  608. FRAGMIN [Suspect]
     Active Substance: DALTEPARIN SODIUM
     Dosage: UNK
     Route: 065
  609. FRAGMIN [Suspect]
     Active Substance: DALTEPARIN SODIUM
     Dosage: UNK
     Route: 065
  610. FRAGMIN [Suspect]
     Active Substance: DALTEPARIN SODIUM
     Dosage: UNK
     Route: 065
  611. FRAGMIN [Suspect]
     Active Substance: DALTEPARIN SODIUM
     Dosage: UNK
     Route: 065
  612. FRAGMIN [Suspect]
     Active Substance: DALTEPARIN SODIUM
     Dosage: UNK
     Route: 065
  613. FRAGMIN [Suspect]
     Active Substance: DALTEPARIN SODIUM
     Dosage: UNK
     Route: 065
  614. FRAGMIN [Suspect]
     Active Substance: DALTEPARIN SODIUM
     Dosage: UNK
     Route: 065
  615. FRAGMIN [Suspect]
     Active Substance: DALTEPARIN SODIUM
     Dosage: UNK
     Route: 065
  616. FRAGMIN [Suspect]
     Active Substance: DALTEPARIN SODIUM
     Dosage: UNK
     Route: 065
  617. FRAGMIN [Suspect]
     Active Substance: DALTEPARIN SODIUM
     Dosage: UNK
     Route: 065
  618. FRAGMIN [Suspect]
     Active Substance: DALTEPARIN SODIUM
     Dosage: UNK
     Route: 065
  619. FRAGMIN [Suspect]
     Active Substance: DALTEPARIN SODIUM
     Dosage: UNK
     Route: 065
  620. FRAGMIN [Suspect]
     Active Substance: DALTEPARIN SODIUM
     Dosage: UNK
     Route: 065
  621. FRAGMIN [Suspect]
     Active Substance: DALTEPARIN SODIUM
     Dosage: UNK
     Route: 065
  622. FURAZOLIDONE [Suspect]
     Active Substance: FURAZOLIDONE
     Dosage: 1.25 MG, QD
     Route: 040
  623. FURAZOLIDONE [Suspect]
     Active Substance: FURAZOLIDONE
     Indication: Product used for unknown indication
     Dosage: 12.5 MG, QD
     Route: 042
  624. FURAZOLIDONE [Suspect]
     Active Substance: FURAZOLIDONE
     Dosage: 12.5 MG
     Route: 042
  625. FURAZOLIDONE [Suspect]
     Active Substance: FURAZOLIDONE
     Dosage: UNK
     Route: 042
  626. FURAZOLIDONE [Suspect]
     Active Substance: FURAZOLIDONE
     Dosage: UNK
     Route: 042
  627. GABAPENTIN [Suspect]
     Active Substance: GABAPENTIN
     Dosage: 10 MG, QD
     Route: 048
  628. GABAPENTIN [Suspect]
     Active Substance: GABAPENTIN
     Indication: Neuralgia
     Dosage: 100 MG, QD
     Route: 048
  629. GABAPENTIN [Suspect]
     Active Substance: GABAPENTIN
     Dosage: 100 MG, QD
     Route: 048
  630. GABAPENTIN [Suspect]
     Active Substance: GABAPENTIN
     Dosage: 100 MG, QD
     Route: 065
  631. GABAPENTIN [Suspect]
     Active Substance: GABAPENTIN
     Indication: Bacterial infection
     Dosage: 100 MG
     Route: 048
  632. GABAPENTIN [Suspect]
     Active Substance: GABAPENTIN
     Dosage: 1000 MG, QD
     Route: 065
  633. GABAPENTIN [Suspect]
     Active Substance: GABAPENTIN
     Dosage: 1000 MG, QD
     Route: 065
  634. GABAPENTIN [Suspect]
     Active Substance: GABAPENTIN
     Dosage: UNK
     Route: 065
  635. GABAPENTIN [Suspect]
     Active Substance: GABAPENTIN
     Indication: Intentional product misuse
     Dosage: UNK
     Route: 065
  636. GABAPENTIN [Suspect]
     Active Substance: GABAPENTIN
     Indication: Off label use
     Dosage: UNK
     Route: 065
  637. GABAPENTIN [Suspect]
     Active Substance: GABAPENTIN
     Dosage: UNK
     Route: 065
  638. GABAPENTIN [Suspect]
     Active Substance: GABAPENTIN
     Dosage: UNK
     Route: 065
  639. GABAPENTIN [Suspect]
     Active Substance: GABAPENTIN
     Dosage: UNK
     Route: 065
  640. DEXTROSE [Suspect]
     Active Substance: DEXTROSE MONOHYDRATE
     Dosage: 1 DF, QD
     Route: 042
  641. DEXTROSE [Suspect]
     Active Substance: DEXTROSE MONOHYDRATE
     Dosage: 1 DOSAGE FORM, QD
     Route: 042
  642. DEXTROSE [Suspect]
     Active Substance: DEXTROSE MONOHYDRATE
     Indication: Anticoagulant therapy
     Dosage: 1 DOSAGE FORM, QD
     Route: 058
  643. DEXTROSE [Suspect]
     Active Substance: DEXTROSE MONOHYDRATE
     Dosage: 1.25 G, QD
     Route: 042
  644. DEXTROSE [Suspect]
     Active Substance: DEXTROSE MONOHYDRATE
     Dosage: 1.25 G, QD
     Route: 042
  645. DEXTROSE [Suspect]
     Active Substance: DEXTROSE MONOHYDRATE
     Dosage: 1.25 G
     Route: 042
  646. DEXTROSE [Suspect]
     Active Substance: DEXTROSE MONOHYDRATE
     Dosage: 12.0 G, QD
     Route: 042
  647. DEXTROSE [Suspect]
     Active Substance: DEXTROSE MONOHYDRATE
     Dosage: 12.5 G
     Route: 065
  648. DEXTROSE [Suspect]
     Active Substance: DEXTROSE MONOHYDRATE
     Dosage: 12.5 G, QD
     Route: 065
  649. DEXTROSE [Suspect]
     Active Substance: DEXTROSE MONOHYDRATE
     Indication: Off label use
     Dosage: 12.5 G
     Route: 042
  650. DEXTROSE [Suspect]
     Active Substance: DEXTROSE MONOHYDRATE
     Dosage: 12.5 G
     Route: 042
  651. DEXTROSE [Suspect]
     Active Substance: DEXTROSE MONOHYDRATE
     Dosage: 12.5 G
     Route: 042
  652. DEXTROSE [Suspect]
     Active Substance: DEXTROSE MONOHYDRATE
     Dosage: 12.5 G
     Route: 042
  653. DEXTROSE [Suspect]
     Active Substance: DEXTROSE MONOHYDRATE
     Dosage: 12.5 G
     Route: 042
  654. DEXTROSE [Suspect]
     Active Substance: DEXTROSE MONOHYDRATE
     Dosage: 12.5 G, PRN
     Route: 042
  655. DEXTROSE [Suspect]
     Active Substance: DEXTROSE MONOHYDRATE
     Dosage: 12.5 G, PRN
     Route: 042
  656. DEXTROSE [Suspect]
     Active Substance: DEXTROSE MONOHYDRATE
     Dosage: 12.5 MG
     Route: 065
  657. DEXTROSE [Suspect]
     Active Substance: DEXTROSE MONOHYDRATE
     Dosage: 12.5 MG
     Route: 065
  658. DEXTROSE [Suspect]
     Active Substance: DEXTROSE MONOHYDRATE
     Indication: Nutritional supplementation
     Dosage: 12.5 MG, QD
     Route: 042
  659. DEXTROSE [Suspect]
     Active Substance: DEXTROSE MONOHYDRATE
     Dosage: 12.5 MG, QD
     Route: 042
  660. DEXTROSE [Suspect]
     Active Substance: DEXTROSE MONOHYDRATE
     Dosage: 12.5 MG
     Route: 042
  661. DEXTROSE [Suspect]
     Active Substance: DEXTROSE MONOHYDRATE
     Indication: Intentional product misuse
     Dosage: 12.5 MG, PRN
     Route: 042
  662. DEXTROSE [Suspect]
     Active Substance: DEXTROSE MONOHYDRATE
     Dosage: 250 MG, QD
     Route: 042
  663. DEXTROSE [Suspect]
     Active Substance: DEXTROSE MONOHYDRATE
     Dosage: 250 ML, QD
     Route: 042
  664. DEXTROSE [Suspect]
     Active Substance: DEXTROSE MONOHYDRATE
     Dosage: 50 MG, QD
     Route: 065
  665. DEXTROSE [Suspect]
     Active Substance: DEXTROSE MONOHYDRATE
     Dosage: 50 ML, QD
     Route: 040
  666. DEXTROSE [Suspect]
     Active Substance: DEXTROSE MONOHYDRATE
     Dosage: 50 ML, QD
     Route: 065
  667. DEXTROSE [Suspect]
     Active Substance: DEXTROSE MONOHYDRATE
     Dosage: UNK
     Route: 042
  668. DEXTROSE [Suspect]
     Active Substance: DEXTROSE MONOHYDRATE
     Dosage: UNK
     Route: 065
  669. DEXTROSE [Suspect]
     Active Substance: DEXTROSE MONOHYDRATE
     Dosage: UNK, QD
     Route: 042
  670. DEXTROSE [Suspect]
     Active Substance: DEXTROSE MONOHYDRATE
     Dosage: UNK, PRN
     Route: 042
  671. DEXTROSE\SODIUM CHLORIDE [Suspect]
     Active Substance: DEXTROSE\SODIUM CHLORIDE
     Indication: Intentional product misuse
     Dosage: 12.5 G, QD
     Route: 042
  672. DEXTROSE\SODIUM CHLORIDE [Suspect]
     Active Substance: DEXTROSE\SODIUM CHLORIDE
     Dosage: 12.5 G, QD
     Route: 042
  673. DEXTROSE\SODIUM CHLORIDE [Suspect]
     Active Substance: DEXTROSE\SODIUM CHLORIDE
     Dosage: 12.5 G, QD
     Route: 042
  674. DEXTROSE\SODIUM CHLORIDE [Suspect]
     Active Substance: DEXTROSE\SODIUM CHLORIDE
     Dosage: 12.5 G, QD
     Route: 042
  675. DEXTROSE\SODIUM CHLORIDE [Suspect]
     Active Substance: DEXTROSE\SODIUM CHLORIDE
     Dosage: 12.5 MG, QD
     Route: 042
  676. DEXTROSE\SODIUM CHLORIDE [Suspect]
     Active Substance: DEXTROSE\SODIUM CHLORIDE
     Indication: Off label use
     Dosage: 12.5 MG, QD
     Route: 065
  677. DEXTROSE\SODIUM CHLORIDE [Suspect]
     Active Substance: DEXTROSE\SODIUM CHLORIDE
     Indication: Nutritional supplementation
     Dosage: 12.5 MG
     Route: 042
  678. DEXTROSE\SODIUM CHLORIDE [Suspect]
     Active Substance: DEXTROSE\SODIUM CHLORIDE
     Dosage: 12.5 MG
     Route: 042
  679. DEXTROSE\SODIUM CHLORIDE [Suspect]
     Active Substance: DEXTROSE\SODIUM CHLORIDE
     Dosage: 12.5 MG
     Route: 042
  680. DEXTROSE\SODIUM CHLORIDE [Suspect]
     Active Substance: DEXTROSE\SODIUM CHLORIDE
     Dosage: UNK
     Route: 042
  681. GLYCERYL MONOSTEARATE [Suspect]
     Active Substance: GLYCERYL MONOSTEARATE
     Indication: Constipation
     Dosage: UNK
     Route: 065
  682. FIBER NOS [Suspect]
     Active Substance: UNSPECIFIED INGREDIENT
     Indication: Vitamin supplementation
     Dosage: UNK
     Route: 048
  683. HERBALS\PAULLINIA CUPANA SEED [Suspect]
     Active Substance: HERBALS\PAULLINIA CUPANA SEED
     Indication: Nutritional supplementation
     Dosage: 12.5 MG
     Route: 042
  684. HERBALS\PAULLINIA CUPANA SEED [Suspect]
     Active Substance: HERBALS\PAULLINIA CUPANA SEED
     Dosage: 17.0 MG
     Route: 042
  685. HERBALS\PAULLINIA CUPANA SEED [Suspect]
     Active Substance: HERBALS\PAULLINIA CUPANA SEED
     Dosage: UNK
     Route: 042
  686. HERBALS\PAULLINIA CUPANA SEED [Suspect]
     Active Substance: HERBALS\PAULLINIA CUPANA SEED
     Dosage: UNK
     Route: 065
  687. HERBALS\PAULLINIA CUPANA SEED [Suspect]
     Active Substance: HERBALS\PAULLINIA CUPANA SEED
     Dosage: UNK, (IV USE)
     Route: 065
  688. HYDROCORTISONE [Suspect]
     Active Substance: HYDROCORTISONE
     Indication: Angioedema
     Dosage: 100 MG
     Route: 065
  689. HEPARIN CALCIUM [Suspect]
     Active Substance: HEPARIN CALCIUM
     Dosage: 50 ML, QD
     Route: 042
  690. HEPARIN CALCIUM [Suspect]
     Active Substance: HEPARIN CALCIUM
     Dosage: 50 ML
     Route: 065
  691. HEPARIN CALCIUM [Suspect]
     Active Substance: HEPARIN CALCIUM
     Dosage: 50 ML
     Route: 065
  692. HEPARIN CALCIUM [Suspect]
     Active Substance: HEPARIN CALCIUM
     Indication: Anticoagulant therapy
     Dosage: 50 ML, PRN
     Route: 042
  693. HEPARIN CALCIUM [Suspect]
     Active Substance: HEPARIN CALCIUM
     Dosage: UNK
     Route: 065
  694. HEPARIN SODIUM [Suspect]
     Active Substance: HEPARIN SODIUM
     Dosage: 250 ML
     Route: 040
  695. HEPARIN SODIUM [Suspect]
     Active Substance: HEPARIN SODIUM
     Dosage: 250 ML
     Route: 040
  696. HEPARIN SODIUM [Suspect]
     Active Substance: HEPARIN SODIUM
     Indication: Intentional product misuse
     Dosage: 250 ML, QD
     Route: 042
  697. HEPARIN SODIUM [Suspect]
     Active Substance: HEPARIN SODIUM
     Dosage: 250 ML, QD
     Route: 042
  698. HEPARIN SODIUM [Suspect]
     Active Substance: HEPARIN SODIUM
     Dosage: 250 ML
     Route: 042
  699. HEPARIN SODIUM [Suspect]
     Active Substance: HEPARIN SODIUM
     Dosage: 250 ML
     Route: 040
  700. HEPARIN SODIUM [Suspect]
     Active Substance: HEPARIN SODIUM
     Indication: Off label use
     Dosage: 250 ML
     Route: 042
  701. HEPARIN SODIUM [Suspect]
     Active Substance: HEPARIN SODIUM
     Dosage: 250 ML
     Route: 042
  702. HEPARIN SODIUM [Suspect]
     Active Substance: HEPARIN SODIUM
     Dosage: 250 ML, PRN
     Route: 042
  703. HEPARIN SODIUM [Suspect]
     Active Substance: HEPARIN SODIUM
     Dosage: 50 ML, QD
     Route: 065
  704. HEPARIN SODIUM [Suspect]
     Active Substance: HEPARIN SODIUM
     Dosage: 50 ML, QD
     Route: 042
  705. HEPARIN SODIUM [Suspect]
     Active Substance: HEPARIN SODIUM
     Dosage: 50 ML, QD
     Route: 042
  706. HEPARIN SODIUM [Suspect]
     Active Substance: HEPARIN SODIUM
     Dosage: 50 ML, QD
     Route: 065
  707. HEPARIN SODIUM [Suspect]
     Active Substance: HEPARIN SODIUM
     Dosage: 50 ML
     Route: 042
  708. HEPARIN SODIUM [Suspect]
     Active Substance: HEPARIN SODIUM
     Dosage: 50 ML
     Route: 042
  709. HEPARIN SODIUM [Suspect]
     Active Substance: HEPARIN SODIUM
     Dosage: 50 ML, PRN (IV USE)
     Route: 065
  710. HEPARIN SODIUM [Suspect]
     Active Substance: HEPARIN SODIUM
     Dosage: 50 ML
     Route: 017
  711. HEPARIN SODIUM [Suspect]
     Active Substance: HEPARIN SODIUM
     Dosage: 50 ML
     Route: 042
  712. HEPARIN SODIUM [Suspect]
     Active Substance: HEPARIN SODIUM
     Dosage: 50 ML
     Route: 050
  713. HEPARIN SODIUM [Suspect]
     Active Substance: HEPARIN SODIUM
     Dosage: 50 ML, PRN
     Route: 017
  714. HEPARIN SODIUM [Suspect]
     Active Substance: HEPARIN SODIUM
     Indication: Anticoagulant therapy
     Dosage: 50 ML, PRN
     Route: 042
  715. HEPARIN SODIUM [Suspect]
     Active Substance: HEPARIN SODIUM
     Dosage: UNK
     Route: 017
  716. HEPARIN SODIUM [Suspect]
     Active Substance: HEPARIN SODIUM
     Dosage: UNK
     Route: 042
  717. HEPARIN SODIUM [Suspect]
     Active Substance: HEPARIN SODIUM
     Dosage: UNK
     Route: 042
  718. HEPARIN SODIUM [Suspect]
     Active Substance: HEPARIN SODIUM
     Dosage: UNK
     Route: 065
  719. HEPARIN SODIUM [Suspect]
     Active Substance: HEPARIN SODIUM
     Dosage: UNK
     Route: 065
  720. HEPARIN SODIUM AND DEXTROSE [Suspect]
     Active Substance: HEPARIN SODIUM
     Dosage: 50 ML, PRN
     Route: 042
  721. HEPARIN SODIUM AND DEXTROSE [Suspect]
     Active Substance: HEPARIN SODIUM
     Dosage: 250 MG, QD
     Route: 042
  722. HEPARIN SODIUM AND DEXTROSE [Suspect]
     Active Substance: HEPARIN SODIUM
     Dosage: 250 MG, QD
     Route: 042
  723. HEPARIN SODIUM AND DEXTROSE [Suspect]
     Active Substance: HEPARIN SODIUM
     Dosage: 250 MG, PRN
     Route: 042
  724. HEPARIN SODIUM AND DEXTROSE [Suspect]
     Active Substance: HEPARIN SODIUM
     Dosage: 250 ML, QD
     Route: 042
  725. HEPARIN SODIUM AND DEXTROSE [Suspect]
     Active Substance: HEPARIN SODIUM
     Dosage: 50 ML, PRN
     Route: 040
  726. HEPARIN SODIUM AND DEXTROSE [Suspect]
     Active Substance: HEPARIN SODIUM
     Indication: Anticoagulant therapy
     Dosage: 50 ML, QD
     Route: 042
  727. HEPARIN SODIUM AND DEXTROSE [Suspect]
     Active Substance: HEPARIN SODIUM
     Dosage: 50 ML, QD
     Route: 065
  728. HEPARIN SODIUM AND DEXTROSE [Suspect]
     Active Substance: HEPARIN SODIUM
     Dosage: UNK
     Route: 065
  729. HEPARIN SODIUM\SODIUM CHLORIDE [Suspect]
     Active Substance: HEPARIN SODIUM\SODIUM CHLORIDE
     Dosage: 250 MG
     Route: 042
  730. HEPARIN SODIUM\SODIUM CHLORIDE [Suspect]
     Active Substance: HEPARIN SODIUM\SODIUM CHLORIDE
     Dosage: UNK
     Route: 042
  731. HEPARIN SODIUM\SODIUM CHLORIDE [Suspect]
     Active Substance: HEPARIN SODIUM\SODIUM CHLORIDE
     Dosage: 50 ML
     Route: 065
  732. HEPARIN SODIUM\SODIUM CHLORIDE [Suspect]
     Active Substance: HEPARIN SODIUM\SODIUM CHLORIDE
     Indication: Product used for unknown indication
     Dosage: UNK, QD
     Route: 042
  733. HEPARIN SODIUM\SODIUM CHLORIDE [Suspect]
     Active Substance: HEPARIN SODIUM\SODIUM CHLORIDE
     Dosage: UNK
     Route: 042
  734. HEPARIN SODIUM\SODIUM CHLORIDE [Suspect]
     Active Substance: HEPARIN SODIUM\SODIUM CHLORIDE
     Dosage: UNK
     Route: 065
  735. HEPARIN SODIUM\SODIUM CHLORIDE [Suspect]
     Active Substance: HEPARIN SODIUM\SODIUM CHLORIDE
     Dosage: UNK
     Route: 065
  736. UNSPECIFIED INGREDIENT [Suspect]
     Active Substance: UNSPECIFIED INGREDIENT
     Indication: Anticoagulant therapy
     Dosage: 250 ML, QD
     Route: 042
  737. UNSPECIFIED INGREDIENT [Suspect]
     Active Substance: UNSPECIFIED INGREDIENT
     Dosage: 250 ML
     Route: 042
  738. UNSPECIFIED INGREDIENT [Suspect]
     Active Substance: UNSPECIFIED INGREDIENT
     Dosage: 50 ML, QD
     Route: 042
  739. UNSPECIFIED INGREDIENT [Suspect]
     Active Substance: UNSPECIFIED INGREDIENT
     Dosage: 50 ML
     Route: 042
  740. UNSPECIFIED INGREDIENT [Suspect]
     Active Substance: UNSPECIFIED INGREDIENT
     Dosage: UNK
     Route: 042
  741. HORSE CHESTNUT [Suspect]
     Active Substance: HORSE CHESTNUT
     Indication: Product used for unknown indication
     Dosage: UNK
     Route: 065
  742. HYDROMORPHONE [Suspect]
     Active Substance: HYDROMORPHONE
     Dosage: 1 MG, QD
     Route: 059
  743. HYDROMORPHONE [Suspect]
     Active Substance: HYDROMORPHONE
     Dosage: 1 MG, Q4H
     Route: 059
  744. HYDROMORPHONE [Suspect]
     Active Substance: HYDROMORPHONE
     Dosage: 1 MG, Q6H
     Route: 059
  745. HYDROMORPHONE [Suspect]
     Active Substance: HYDROMORPHONE
     Dosage: 1 MG  (4 EVERY 1 DAYS)
     Route: 059
  746. HYDROMORPHONE [Suspect]
     Active Substance: HYDROMORPHONE
     Dosage: 1 MG  (6 EVERY 1 DAYS)
     Route: 059
  747. HYDROMORPHONE [Suspect]
     Active Substance: HYDROMORPHONE
     Dosage: 1 MG, PRN
     Route: 059
  748. HYDROMORPHONE [Suspect]
     Active Substance: HYDROMORPHONE
     Dosage: 17 MG, QD
     Route: 059
  749. HYDROMORPHONE [Suspect]
     Active Substance: HYDROMORPHONE
     Dosage: 24 MG, QD
     Route: 059
  750. HYDROMORPHONE [Suspect]
     Active Substance: HYDROMORPHONE
     Indication: Analgesic therapy
     Dosage: 24 MG, Q4H
     Route: 059
  751. HYDROMORPHONE [Suspect]
     Active Substance: HYDROMORPHONE
     Dosage: 24 MG, Q6H
     Route: 059
  752. HYDROMORPHONE [Suspect]
     Active Substance: HYDROMORPHONE
     Indication: Off label use
     Dosage: 24 MG, QID
     Route: 059
  753. HYDROMORPHONE [Suspect]
     Active Substance: HYDROMORPHONE
     Dosage: 4 MG, QD
     Route: 059
  754. HYDROMORPHONE [Suspect]
     Active Substance: HYDROMORPHONE
     Dosage: 4 MG, Q4H
     Route: 059
  755. HYDROMORPHONE [Suspect]
     Active Substance: HYDROMORPHONE
     Dosage: 6 MG, QD
     Route: 059
  756. HYDROMORPHONE [Suspect]
     Active Substance: HYDROMORPHONE
     Dosage: 6 MG, Q4H
     Route: 059
  757. HYDROMORPHONE [Suspect]
     Active Substance: HYDROMORPHONE
     Dosage: 6 MG, Q5H
     Route: 059
  758. HYDROMORPHONE [Suspect]
     Active Substance: HYDROMORPHONE
     Dosage: 6 MG, Q6H
     Route: 059
  759. HYDROMORPHONE [Suspect]
     Active Substance: HYDROMORPHONE
     Dosage: 6 MG, QID
     Route: 059
  760. HYDROMORPHONE [Suspect]
     Active Substance: HYDROMORPHONE
     Dosage: 6 MG, QID (4 EVERY 1 DAY)
     Route: 059
  761. HYDROMORPHONE [Suspect]
     Active Substance: HYDROMORPHONE
     Dosage: 6 MG
     Route: 059
  762. HYDROMORPHONE [Suspect]
     Active Substance: HYDROMORPHONE
     Indication: Intentional product misuse
     Dosage: 6 MG (1 EVERY 4 DAYS)
     Route: 059
  763. HYDROMORPHONE [Suspect]
     Active Substance: HYDROMORPHONE
     Dosage: 6 MG (6 EVERY 1 DAYS)
     Route: 059
  764. HYDROMORPHONE [Suspect]
     Active Substance: HYDROMORPHONE
     Dosage: 96 MG, QD
     Route: 059
  765. HYDROMORPHONE [Suspect]
     Active Substance: HYDROMORPHONE
     Dosage: UNK, QD
     Route: 059
  766. HYDROMORPHONE [Suspect]
     Active Substance: HYDROMORPHONE
     Dosage: UNK
     Route: 059
  767. HYDROMORPHONE [Suspect]
     Active Substance: HYDROMORPHONE
     Dosage: UNK
     Route: 059
  768. HYDROMORPHONE HYDROCHLORIDE [Suspect]
     Active Substance: HYDROMORPHONE HYDROCHLORIDE
     Dosage: 1 MG
     Route: 065
  769. HYDROMORPHONE HYDROCHLORIDE [Suspect]
     Active Substance: HYDROMORPHONE HYDROCHLORIDE
     Dosage: 1 MG, QW
     Route: 058
  770. HYDROMORPHONE HYDROCHLORIDE [Suspect]
     Active Substance: HYDROMORPHONE HYDROCHLORIDE
     Dosage: 1 MG, QW
     Route: 058
  771. HYDROMORPHONE HYDROCHLORIDE [Suspect]
     Active Substance: HYDROMORPHONE HYDROCHLORIDE
     Dosage: 1 MG, QD (1 EVERY 1 DAY)
     Route: 058
  772. HYDROMORPHONE HYDROCHLORIDE [Suspect]
     Active Substance: HYDROMORPHONE HYDROCHLORIDE
     Indication: Analgesic therapy
     Dosage: 1 MG, Q4W
     Route: 058
  773. HYDROMORPHONE HYDROCHLORIDE [Suspect]
     Active Substance: HYDROMORPHONE HYDROCHLORIDE
     Dosage: 1 MG, Q4H
     Route: 058
  774. HYDROMORPHONE HYDROCHLORIDE [Suspect]
     Active Substance: HYDROMORPHONE HYDROCHLORIDE
     Dosage: 1 MG, Q4H (1 EVERY 4 HOURS)
     Route: 058
  775. HYDROMORPHONE HYDROCHLORIDE [Suspect]
     Active Substance: HYDROMORPHONE HYDROCHLORIDE
     Indication: Intentional product misuse
     Dosage: 1 MG, 6QD
     Route: 058
  776. HYDROMORPHONE HYDROCHLORIDE [Suspect]
     Active Substance: HYDROMORPHONE HYDROCHLORIDE
     Dosage: 1 MG
     Route: 058
  777. HYDROMORPHONE HYDROCHLORIDE [Suspect]
     Active Substance: HYDROMORPHONE HYDROCHLORIDE
     Dosage: 1 MG
     Route: 058
  778. HYDROMORPHONE HYDROCHLORIDE [Suspect]
     Active Substance: HYDROMORPHONE HYDROCHLORIDE
     Dosage: 1 MG
     Route: 058
  779. HYDROMORPHONE HYDROCHLORIDE [Suspect]
     Active Substance: HYDROMORPHONE HYDROCHLORIDE
     Dosage: 1 MG
     Route: 058
  780. HYDROMORPHONE HYDROCHLORIDE [Suspect]
     Active Substance: HYDROMORPHONE HYDROCHLORIDE
     Dosage: 1 MG
     Route: 065
  781. HYDROMORPHONE HYDROCHLORIDE [Suspect]
     Active Substance: HYDROMORPHONE HYDROCHLORIDE
     Dosage: 1 MG
     Route: 065
  782. HYDROMORPHONE HYDROCHLORIDE [Suspect]
     Active Substance: HYDROMORPHONE HYDROCHLORIDE
     Dosage: 1 MG (1 EVERY 6 DAY)
     Route: 058
  783. HYDROMORPHONE HYDROCHLORIDE [Suspect]
     Active Substance: HYDROMORPHONE HYDROCHLORIDE
     Dosage: 1 ML, Q4H (1 EVERY 4 HOURS)
     Route: 058
  784. HYDROMORPHONE HYDROCHLORIDE [Suspect]
     Active Substance: HYDROMORPHONE HYDROCHLORIDE
     Dosage: 17 MG, QD
     Route: 058
  785. HYDROMORPHONE HYDROCHLORIDE [Suspect]
     Active Substance: HYDROMORPHONE HYDROCHLORIDE
     Dosage: 17 MG, QD
     Route: 065
  786. HYDROMORPHONE HYDROCHLORIDE [Suspect]
     Active Substance: HYDROMORPHONE HYDROCHLORIDE
     Dosage: 17 MG, QD
     Route: 065
  787. HYDROMORPHONE HYDROCHLORIDE [Suspect]
     Active Substance: HYDROMORPHONE HYDROCHLORIDE
     Dosage: 17 MG, QD
     Route: 058
  788. HYDROMORPHONE HYDROCHLORIDE [Suspect]
     Active Substance: HYDROMORPHONE HYDROCHLORIDE
     Dosage: 17 MG, QD
     Route: 058
  789. HYDROMORPHONE HYDROCHLORIDE [Suspect]
     Active Substance: HYDROMORPHONE HYDROCHLORIDE
     Dosage: 17 MG
     Route: 065
  790. HYDROMORPHONE HYDROCHLORIDE [Suspect]
     Active Substance: HYDROMORPHONE HYDROCHLORIDE
     Dosage: 24 MG, QD
     Route: 058
  791. HYDROMORPHONE HYDROCHLORIDE [Suspect]
     Active Substance: HYDROMORPHONE HYDROCHLORIDE
     Dosage: 24 MG, QD
     Route: 059
  792. HYDROMORPHONE HYDROCHLORIDE [Suspect]
     Active Substance: HYDROMORPHONE HYDROCHLORIDE
     Dosage: 24 MG, QD
     Route: 059
  793. HYDROMORPHONE HYDROCHLORIDE [Suspect]
     Active Substance: HYDROMORPHONE HYDROCHLORIDE
     Dosage: 24 MG, QD (1 EVERY 1 DAYS)
     Route: 058
  794. HYDROMORPHONE HYDROCHLORIDE [Suspect]
     Active Substance: HYDROMORPHONE HYDROCHLORIDE
     Dosage: 6 MG, QID
     Route: 058
  795. HYDROMORPHONE HYDROCHLORIDE [Suspect]
     Active Substance: HYDROMORPHONE HYDROCHLORIDE
     Dosage: 6 MG, QID
     Route: 058
  796. HYDROMORPHONE HYDROCHLORIDE [Suspect]
     Active Substance: HYDROMORPHONE HYDROCHLORIDE
     Dosage: 24 MG, Q4H
     Route: 058
  797. HYDROMORPHONE HYDROCHLORIDE [Suspect]
     Active Substance: HYDROMORPHONE HYDROCHLORIDE
     Dosage: 24 MG, Q4H (1 EVERY 4 HOURS)
     Route: 058
  798. HYDROMORPHONE HYDROCHLORIDE [Suspect]
     Active Substance: HYDROMORPHONE HYDROCHLORIDE
     Dosage: 24 MG, QID
     Route: 058
  799. HYDROMORPHONE HYDROCHLORIDE [Suspect]
     Active Substance: HYDROMORPHONE HYDROCHLORIDE
     Dosage: 24 MG
     Route: 059
  800. HYDROMORPHONE HYDROCHLORIDE [Suspect]
     Active Substance: HYDROMORPHONE HYDROCHLORIDE
     Dosage: 24 MG
     Route: 065
  801. HYDROMORPHONE HYDROCHLORIDE [Suspect]
     Active Substance: HYDROMORPHONE HYDROCHLORIDE
     Dosage: 24 MG
     Route: 065
  802. HYDROMORPHONE HYDROCHLORIDE [Suspect]
     Active Substance: HYDROMORPHONE HYDROCHLORIDE
     Dosage: 1 MG, QID
     Route: 058
  803. HYDROMORPHONE HYDROCHLORIDE [Suspect]
     Active Substance: HYDROMORPHONE HYDROCHLORIDE
     Dosage: 4 MG, Q4H (1 EVERY 4 HOURS)
     Route: 058
  804. HYDROMORPHONE HYDROCHLORIDE [Suspect]
     Active Substance: HYDROMORPHONE HYDROCHLORIDE
     Dosage: 4 MG
     Route: 058
  805. HYDROMORPHONE HYDROCHLORIDE [Suspect]
     Active Substance: HYDROMORPHONE HYDROCHLORIDE
     Dosage: 4 MG
     Route: 058
  806. HYDROMORPHONE HYDROCHLORIDE [Suspect]
     Active Substance: HYDROMORPHONE HYDROCHLORIDE
     Dosage: 6 MG, QD
     Route: 058
  807. HYDROMORPHONE HYDROCHLORIDE [Suspect]
     Active Substance: HYDROMORPHONE HYDROCHLORIDE
     Dosage: 6 MG, Q4H
     Route: 058
  808. HYDROMORPHONE HYDROCHLORIDE [Suspect]
     Active Substance: HYDROMORPHONE HYDROCHLORIDE
     Dosage: 6 MG, Q4H (1 EVERY 4 HOURS)
     Route: 058
  809. HYDROMORPHONE HYDROCHLORIDE [Suspect]
     Active Substance: HYDROMORPHONE HYDROCHLORIDE
     Dosage: 6 MG, Q5H
     Route: 058
  810. HYDROMORPHONE HYDROCHLORIDE [Suspect]
     Active Substance: HYDROMORPHONE HYDROCHLORIDE
     Indication: Off label use
     Dosage: 6 MG, Q6H (4 EVERY 1 DAY)
     Route: 058
  811. HYDROMORPHONE HYDROCHLORIDE [Suspect]
     Active Substance: HYDROMORPHONE HYDROCHLORIDE
     Dosage: 6 MG, QID (1 EVERY 1 DAY)
     Route: 058
  812. HYDROMORPHONE HYDROCHLORIDE [Suspect]
     Active Substance: HYDROMORPHONE HYDROCHLORIDE
     Dosage: 6 MG
     Route: 058
  813. HYDROMORPHONE HYDROCHLORIDE [Suspect]
     Active Substance: HYDROMORPHONE HYDROCHLORIDE
     Dosage: 6 MG
     Route: 065
  814. HYDROMORPHONE HYDROCHLORIDE [Suspect]
     Active Substance: HYDROMORPHONE HYDROCHLORIDE
     Dosage: 6 MG
     Route: 065
  815. HYDROMORPHONE HYDROCHLORIDE [Suspect]
     Active Substance: HYDROMORPHONE HYDROCHLORIDE
     Dosage: 96 MG, QD (1 EVERY 1 DAY)
     Route: 058
  816. HYDROMORPHONE HYDROCHLORIDE [Suspect]
     Active Substance: HYDROMORPHONE HYDROCHLORIDE
     Dosage: 96 MG
     Route: 058
  817. HYDROMORPHONE HYDROCHLORIDE [Suspect]
     Active Substance: HYDROMORPHONE HYDROCHLORIDE
     Dosage: UNK
     Route: 065
  818. HYDROMORPHONE HYDROCHLORIDE [Suspect]
     Active Substance: HYDROMORPHONE HYDROCHLORIDE
     Dosage: UNK
     Route: 065
  819. HYDROMORPHONE HYDROCHLORIDE [Suspect]
     Active Substance: HYDROMORPHONE HYDROCHLORIDE
     Dosage: UNK
     Route: 065
  820. DEXTROSE [Suspect]
     Active Substance: DEXTROSE MONOHYDRATE
     Indication: Nutritional supplementation
     Dosage: 12.5 G, QD
     Route: 042
  821. DEXTROSE [Suspect]
     Active Substance: DEXTROSE MONOHYDRATE
     Dosage: 12.5 G, QD (LIQUID ORAL)
     Route: 042
  822. DEXTROSE [Suspect]
     Active Substance: DEXTROSE MONOHYDRATE
     Dosage: 12.5 G, QD (LIQUID ORAL)
     Route: 042
  823. DEXTROSE [Suspect]
     Active Substance: DEXTROSE MONOHYDRATE
     Indication: Off label use
     Dosage: 12.5 G
     Route: 042
  824. DEXTROSE [Suspect]
     Active Substance: DEXTROSE MONOHYDRATE
     Dosage: 12.5 G  (LIQUID ORAL)
     Route: 042
  825. DEXTROSE [Suspect]
     Active Substance: DEXTROSE MONOHYDRATE
     Indication: Intentional product misuse
     Dosage: 12.5 G (LIQUID ORAL)
     Route: 042
  826. DEXTROSE [Suspect]
     Active Substance: DEXTROSE MONOHYDRATE
     Dosage: 12.5 G (LIQUID ORAL)
     Route: 042
  827. INSULIN PORK\INSULIN PURIFIED PORK [Suspect]
     Active Substance: INSULIN PORK\INSULIN PURIFIED PORK
     Indication: Diabetes mellitus
     Dosage: UNK
     Route: 065
  828. INSULIN ASPART [Suspect]
     Active Substance: INSULIN ASPART
     Dosage: UNK
     Route: 048
  829. INSULIN ASPART [Suspect]
     Active Substance: INSULIN ASPART
     Dosage: UNK
     Route: 048
  830. INSULIN ASPART [Suspect]
     Active Substance: INSULIN ASPART
     Dosage: UNK
     Route: 048
  831. INSULIN ASPART [Suspect]
     Active Substance: INSULIN ASPART
     Dosage: UNK
     Route: 048
  832. INSULIN ASPART [Suspect]
     Active Substance: INSULIN ASPART
     Dosage: UNK
     Route: 058
  833. INSULIN ASPART [Suspect]
     Active Substance: INSULIN ASPART
     Indication: Diabetes mellitus
     Dosage: UNK
     Route: 059
  834. INSULIN ASPART [Suspect]
     Active Substance: INSULIN ASPART
     Indication: Off label use
     Dosage: UNK
     Route: 059
  835. INSULIN ASPART [Suspect]
     Active Substance: INSULIN ASPART
     Dosage: UNK
     Route: 059
  836. INSULIN ASPART [Suspect]
     Active Substance: INSULIN ASPART
     Dosage: UNK
     Route: 059
  837. INSULIN ASPART [Suspect]
     Active Substance: INSULIN ASPART
     Dosage: UNK
     Route: 059
  838. INSULIN ASPART [Suspect]
     Active Substance: INSULIN ASPART
     Dosage: UNK
     Route: 065
  839. INSULIN ASPART [Suspect]
     Active Substance: INSULIN ASPART
     Dosage: UNK
     Route: 065
  840. INSULIN ASPART [Suspect]
     Active Substance: INSULIN ASPART
     Dosage: UNK
     Route: 065
  841. INSULIN ASPART [Suspect]
     Active Substance: INSULIN ASPART
     Dosage: UNK
     Route: 065
  842. INSULIN ASPART [Suspect]
     Active Substance: INSULIN ASPART
     Dosage: UNK
     Route: 065
  843. INSULIN DEGLUDEC [Suspect]
     Active Substance: INSULIN DEGLUDEC
     Dosage: 1 DOSAGE FORM, QD (1 EVERY 1 DAY)
     Route: 058
  844. INSULIN DEGLUDEC [Suspect]
     Active Substance: INSULIN DEGLUDEC
     Dosage: 1 DOSAGE FORM
     Route: 058
  845. INSULIN DEGLUDEC [Suspect]
     Active Substance: INSULIN DEGLUDEC
     Indication: Diabetes mellitus
     Dosage: UNK
     Route: 058
  846. INSULIN DEGLUDEC [Suspect]
     Active Substance: INSULIN DEGLUDEC
     Dosage: UNK
     Route: 065
  847. INSULIN DEGLUDEC [Suspect]
     Active Substance: INSULIN DEGLUDEC
     Dosage: UNK
     Route: 065
  848. INSULIN DEGLUDEC [Suspect]
     Active Substance: INSULIN DEGLUDEC
     Dosage: UNK
     Route: 065
  849. INSULIN PORK [Suspect]
     Active Substance: INSULIN PORK\INSULIN PURIFIED PORK
     Indication: Diabetes mellitus
     Dosage: UNK
     Route: 065
  850. IPRATROPIUM [Suspect]
     Active Substance: IPRATROPIUM
     Dosage: 1 DOSAGE FORM, QD
     Route: 050
  851. IPRATROPIUM [Suspect]
     Active Substance: IPRATROPIUM
     Indication: Off label use
     Dosage: 1 DOSAGE FORM, QD
     Route: 055
  852. IPRATROPIUM [Suspect]
     Active Substance: IPRATROPIUM
     Indication: Dyspnoea
     Dosage: 1 DOSAGE FORM, QD
     Route: 065
  853. IPRATROPIUM [Suspect]
     Active Substance: IPRATROPIUM
     Dosage: 1 DF, Q6H
     Route: 050
  854. IPRATROPIUM [Suspect]
     Active Substance: IPRATROPIUM
     Dosage: 1 DOSAGE FORM, Q6H
     Route: 050
  855. IPRATROPIUM [Suspect]
     Active Substance: IPRATROPIUM
     Indication: Intentional product misuse
     Dosage: 1 DOSAGE FORM, Q6H
     Route: 065
  856. IPRATROPIUM [Suspect]
     Active Substance: IPRATROPIUM
     Dosage: 1 DOSAGE FORM, TID
     Route: 065
  857. IPRATROPIUM [Suspect]
     Active Substance: IPRATROPIUM
     Dosage: 1 DOSAGE FORM, TID
     Route: 065
  858. IPRATROPIUM [Suspect]
     Active Substance: IPRATROPIUM
     Dosage: 1 DF, QID
     Route: 055
  859. IPRATROPIUM [Suspect]
     Active Substance: IPRATROPIUM
     Dosage: 1 DOSAGE FORM, QID
     Route: 055
  860. IPRATROPIUM [Suspect]
     Active Substance: IPRATROPIUM
     Indication: Sleep disorder therapy
     Dosage: 1 DOSAGE FORM, QID
     Route: 065
  861. IPRATROPIUM [Suspect]
     Active Substance: IPRATROPIUM
     Dosage: 1 DF
     Route: 065
  862. IPRATROPIUM [Suspect]
     Active Substance: IPRATROPIUM
     Dosage: 1 DF, 4 EVERY 1 DAYS
     Route: 055
  863. IPRATROPIUM [Suspect]
     Active Substance: IPRATROPIUM
     Dosage: 1 DOSAGE FORM
     Route: 055
  864. IPRATROPIUM [Suspect]
     Active Substance: IPRATROPIUM
     Dosage: 1 DOSAGE FORM
     Route: 065
  865. IPRATROPIUM [Suspect]
     Active Substance: IPRATROPIUM
     Dosage: 1 DOSAGE FORM
     Route: 065
  866. IPRATROPIUM [Suspect]
     Active Substance: IPRATROPIUM
     Dosage: 1 DOSAGE FORM (4 EVERY 1 DAYS)
     Route: 065
  867. IPRATROPIUM [Suspect]
     Active Substance: IPRATROPIUM
     Dosage: 4 IU, QD
     Route: 065
  868. IPRATROPIUM [Suspect]
     Active Substance: IPRATROPIUM
     Dosage: 4 IU, QD
     Route: 065
  869. IPRATROPIUM [Suspect]
     Active Substance: IPRATROPIUM
     Dosage: 4 DF, QD
     Route: 065
  870. IPRATROPIUM [Suspect]
     Active Substance: IPRATROPIUM
     Dosage: 4 DOSAGE FORM, QD
     Route: 065
  871. IPRATROPIUM [Suspect]
     Active Substance: IPRATROPIUM
     Dosage: UNK
     Route: 055
  872. IPRATROPIUM [Suspect]
     Active Substance: IPRATROPIUM
     Dosage: UNK UNK, QD
     Route: 050
  873. IPRATROPIUM [Suspect]
     Active Substance: IPRATROPIUM
     Dosage: UNK UNK, QD
     Route: 050
  874. IPRATROPIUM [Suspect]
     Active Substance: IPRATROPIUM
     Dosage: UNK UNK, QD
     Route: 050
  875. IPRATROPIUM [Suspect]
     Active Substance: IPRATROPIUM
     Dosage: UNK UNK, QD
     Route: 065
  876. IPRATROPIUM [Suspect]
     Active Substance: IPRATROPIUM
     Dosage: UNK, QID
     Route: 045
  877. IPRATROPIUM [Suspect]
     Active Substance: IPRATROPIUM
     Dosage: UNK
     Route: 045
  878. IPRATROPIUM [Suspect]
     Active Substance: IPRATROPIUM
     Dosage: UNK UNK, QID
     Route: 065
  879. IPRATROPIUM [Suspect]
     Active Substance: IPRATROPIUM
     Dosage: UNK
     Route: 055
  880. IPRATROPIUM [Suspect]
     Active Substance: IPRATROPIUM
     Dosage: UNK
     Route: 055
  881. IPRATROPIUM [Suspect]
     Active Substance: IPRATROPIUM
     Dosage: UNK
     Route: 055
  882. IPRATROPIUM [Suspect]
     Active Substance: IPRATROPIUM
     Dosage: UNK
     Route: 065
  883. IPRATROPIUM [Suspect]
     Active Substance: IPRATROPIUM
     Dosage: UNK, Q6H
     Route: 065
  884. IPRATROPIUM [Suspect]
     Active Substance: IPRATROPIUM
     Dosage: UNK, QD
     Route: 065
  885. IPRATROPIUM BROMIDE [Suspect]
     Active Substance: IPRATROPIUM BROMIDE
     Dosage: 1 DOSAGE FORM, QD
     Route: 055
  886. IPRATROPIUM BROMIDE [Suspect]
     Active Substance: IPRATROPIUM BROMIDE
     Dosage: 1 DOSAGE FORM, QD
     Route: 065
  887. IPRATROPIUM BROMIDE [Suspect]
     Active Substance: IPRATROPIUM BROMIDE
     Dosage: 1 DOSAGE FORM, QD
     Route: 065
  888. IPRATROPIUM BROMIDE [Suspect]
     Active Substance: IPRATROPIUM BROMIDE
     Dosage: 1 DOSAGE FORM Q6H
     Route: 065
  889. IPRATROPIUM BROMIDE [Suspect]
     Active Substance: IPRATROPIUM BROMIDE
     Dosage: 1 DOSAGE FORM, Q6H
     Route: 055
  890. IPRATROPIUM BROMIDE [Suspect]
     Active Substance: IPRATROPIUM BROMIDE
     Dosage: 1 DOSAGE FORM
     Route: 050
  891. IPRATROPIUM BROMIDE [Suspect]
     Active Substance: IPRATROPIUM BROMIDE
     Dosage: 1 DOSAGE FORM
     Route: 055
  892. IPRATROPIUM BROMIDE [Suspect]
     Active Substance: IPRATROPIUM BROMIDE
     Dosage: 1 DOSAGE FORM
     Route: 065
  893. IPRATROPIUM BROMIDE [Suspect]
     Active Substance: IPRATROPIUM BROMIDE
     Dosage: 3 DOSAGE FORM, TID
     Route: 065
  894. IPRATROPIUM BROMIDE [Suspect]
     Active Substance: IPRATROPIUM BROMIDE
     Indication: Somnolence
     Dosage: 4 DOSAGE FORM
     Route: 065
  895. IPRATROPIUM BROMIDE [Suspect]
     Active Substance: IPRATROPIUM BROMIDE
     Dosage: 4 DOSAGE FORM, QD (1 EVERY 1 DAYS)
     Route: 065
  896. IPRATROPIUM BROMIDE [Suspect]
     Active Substance: IPRATROPIUM BROMIDE
     Dosage: UNK
     Route: 065
  897. IPRATROPIUM BROMIDE [Suspect]
     Active Substance: IPRATROPIUM BROMIDE
     Dosage: UNK, QD
     Route: 050
  898. IPRATROPIUM BROMIDE [Suspect]
     Active Substance: IPRATROPIUM BROMIDE
     Dosage: UNK, QD
     Route: 050
  899. IPRATROPIUM BROMIDE [Suspect]
     Active Substance: IPRATROPIUM BROMIDE
     Indication: Dyspnoea
     Dosage: UNK, QD
     Route: 055
  900. IPRATROPIUM BROMIDE [Suspect]
     Active Substance: IPRATROPIUM BROMIDE
     Dosage: UNK, QD
     Route: 055
  901. IPRATROPIUM BROMIDE [Suspect]
     Active Substance: IPRATROPIUM BROMIDE
     Dosage: UNK, QD
     Route: 055
  902. IPRATROPIUM BROMIDE [Suspect]
     Active Substance: IPRATROPIUM BROMIDE
     Dosage: UNK, QD
     Route: 065
  903. IPRATROPIUM BROMIDE [Suspect]
     Active Substance: IPRATROPIUM BROMIDE
     Dosage: UNK, QD
     Route: 065
  904. IPRATROPIUM BROMIDE [Suspect]
     Active Substance: IPRATROPIUM BROMIDE
     Indication: Sleep disorder therapy
     Dosage: UNK, Q6H
     Route: 055
  905. IPRATROPIUM BROMIDE [Suspect]
     Active Substance: IPRATROPIUM BROMIDE
     Indication: Intentional product misuse
     Dosage: UNK, QID
     Route: 055
  906. IPRATROPIUM BROMIDE [Suspect]
     Active Substance: IPRATROPIUM BROMIDE
     Dosage: UNK
     Route: 048
  907. IPRATROPIUM BROMIDE [Suspect]
     Active Substance: IPRATROPIUM BROMIDE
     Dosage: UNK
     Route: 050
  908. IPRATROPIUM BROMIDE [Suspect]
     Active Substance: IPRATROPIUM BROMIDE
     Dosage: UNK
     Route: 055
  909. IPRATROPIUM BROMIDE [Suspect]
     Active Substance: IPRATROPIUM BROMIDE
     Dosage: UNK
     Route: 055
  910. IPRATROPIUM BROMIDE [Suspect]
     Active Substance: IPRATROPIUM BROMIDE
     Dosage: UNK
     Route: 065
  911. IPRATROPIUM BROMIDE [Suspect]
     Active Substance: IPRATROPIUM BROMIDE
     Dosage: UNK
     Route: 065
  912. IPRATROPIUM BROMIDE [Suspect]
     Active Substance: IPRATROPIUM BROMIDE
     Dosage: UNK
     Route: 065
  913. IPRATROPIUM BROMIDE [Suspect]
     Active Substance: IPRATROPIUM BROMIDE
     Dosage: UNK
     Route: 065
  914. IPRATROPIUM BROMIDE [Suspect]
     Active Substance: IPRATROPIUM BROMIDE
     Dosage: UNK
     Route: 065
  915. IPRATROPIUM BROMIDE [Suspect]
     Active Substance: IPRATROPIUM BROMIDE
     Dosage: UNK, QD
     Route: 055
  916. IPRATROPIUM BROMIDE\XYLOMETAZOLINE HYDROCHLORIDE [Suspect]
     Active Substance: IPRATROPIUM BROMIDE\XYLOMETAZOLINE HYDROCHLORIDE
     Dosage: 1 DOSAGE FORM, QD
     Route: 065
  917. IPRATROPIUM BROMIDE\XYLOMETAZOLINE HYDROCHLORIDE [Suspect]
     Active Substance: IPRATROPIUM BROMIDE\XYLOMETAZOLINE HYDROCHLORIDE
     Dosage: 1 DOSAGE FORM
     Route: 050
  918. IPRATROPIUM BROMIDE\XYLOMETAZOLINE HYDROCHLORIDE [Suspect]
     Active Substance: IPRATROPIUM BROMIDE\XYLOMETAZOLINE HYDROCHLORIDE
     Dosage: 1 DOSAGE FORM
     Route: 065
  919. IPRATROPIUM BROMIDE\XYLOMETAZOLINE HYDROCHLORIDE [Suspect]
     Active Substance: IPRATROPIUM BROMIDE\XYLOMETAZOLINE HYDROCHLORIDE
     Dosage: 1 DOSAGE FORM
     Route: 065
  920. IPRATROPIUM BROMIDE\XYLOMETAZOLINE HYDROCHLORIDE [Suspect]
     Active Substance: IPRATROPIUM BROMIDE\XYLOMETAZOLINE HYDROCHLORIDE
     Dosage: 1 DOSAGE FORM
     Route: 065
  921. IPRATROPIUM BROMIDE\XYLOMETAZOLINE HYDROCHLORIDE [Suspect]
     Active Substance: IPRATROPIUM BROMIDE\XYLOMETAZOLINE HYDROCHLORIDE
     Dosage: 1 DOSAGE FORM
     Route: 065
  922. IPRATROPIUM BROMIDE\XYLOMETAZOLINE HYDROCHLORIDE [Suspect]
     Active Substance: IPRATROPIUM BROMIDE\XYLOMETAZOLINE HYDROCHLORIDE
     Indication: Dyspnoea
     Dosage: UNK, QD
     Route: 065
  923. IPRATROPIUM BROMIDE\XYLOMETAZOLINE HYDROCHLORIDE [Suspect]
     Active Substance: IPRATROPIUM BROMIDE\XYLOMETAZOLINE HYDROCHLORIDE
     Dosage: UNK
     Route: 050
  924. IPRATROPIUM BROMIDE\XYLOMETAZOLINE HYDROCHLORIDE [Suspect]
     Active Substance: IPRATROPIUM BROMIDE\XYLOMETAZOLINE HYDROCHLORIDE
     Dosage: UNK
     Route: 055
  925. IPRATROPIUM BROMIDE\XYLOMETAZOLINE HYDROCHLORIDE [Suspect]
     Active Substance: IPRATROPIUM BROMIDE\XYLOMETAZOLINE HYDROCHLORIDE
     Dosage: UNK
     Route: 065
  926. IPRATROPIUM BROMIDE\XYLOMETAZOLINE HYDROCHLORIDE [Suspect]
     Active Substance: IPRATROPIUM BROMIDE\XYLOMETAZOLINE HYDROCHLORIDE
     Dosage: UNK
     Route: 065
  927. IPRATROPIUM BROMIDE\XYLOMETAZOLINE HYDROCHLORIDE [Suspect]
     Active Substance: IPRATROPIUM BROMIDE\XYLOMETAZOLINE HYDROCHLORIDE
     Dosage: UNK
     Route: 065
  928. ISOPROPYL MYRISTATE [Suspect]
     Active Substance: ISOPROPYL MYRISTATE
     Indication: Constipation
     Dosage: UNK
     Route: 065
  929. ISOPROPYL MYRISTATE [Suspect]
     Active Substance: ISOPROPYL MYRISTATE
     Indication: Anticoagulant therapy
     Dosage: UNK, QD
     Route: 040
  930. HYDROMORPHONE HYDROCHLORIDE [Suspect]
     Active Substance: HYDROMORPHONE HYDROCHLORIDE
     Indication: Product used for unknown indication
     Route: 065
  931. PANAX GINSENG WHOLE [Suspect]
     Active Substance: PANAX GINSENG WHOLE
     Indication: Nutritional supplementation
     Dosage: 12 MG
     Route: 065
  932. PANAX GINSENG WHOLE [Suspect]
     Active Substance: PANAX GINSENG WHOLE
     Dosage: 12.5 MG
     Route: 065
  933. PANAX GINSENG WHOLE [Suspect]
     Active Substance: PANAX GINSENG WHOLE
     Dosage: UNK
     Route: 065
  934. LANSOPRAZOLE [Suspect]
     Active Substance: LANSOPRAZOLE
     Indication: Intentional product misuse
     Dosage: 30 MG, QD
     Route: 048
  935. LANSOPRAZOLE [Suspect]
     Active Substance: LANSOPRAZOLE
     Dosage: 30 MG, QD
     Route: 048
  936. LANSOPRAZOLE [Suspect]
     Active Substance: LANSOPRAZOLE
     Dosage: 30 MG, QD
     Route: 048
  937. LANSOPRAZOLE [Suspect]
     Active Substance: LANSOPRAZOLE
     Dosage: 30 MG, QD
     Route: 048
  938. LANSOPRAZOLE [Suspect]
     Active Substance: LANSOPRAZOLE
     Dosage: 30 MG, QD
     Route: 048
  939. LANSOPRAZOLE [Suspect]
     Active Substance: LANSOPRAZOLE
     Dosage: 30 MG, QD
     Route: 048
  940. LANSOPRAZOLE [Suspect]
     Active Substance: LANSOPRAZOLE
     Dosage: 30 MG, QD
     Route: 048
  941. LANSOPRAZOLE [Suspect]
     Active Substance: LANSOPRAZOLE
     Dosage: 30 MG, QD
     Route: 065
  942. LANSOPRAZOLE [Suspect]
     Active Substance: LANSOPRAZOLE
     Dosage: 30 MG, QD
     Route: 065
  943. LANSOPRAZOLE [Suspect]
     Active Substance: LANSOPRAZOLE
     Dosage: 30 MG, QD
     Route: 065
  944. LANSOPRAZOLE [Suspect]
     Active Substance: LANSOPRAZOLE
     Indication: Antacid therapy
     Dosage: 30 MG, QD (CAPSULE DELAYED RELEASE)
     Route: 048
  945. LANSOPRAZOLE [Suspect]
     Active Substance: LANSOPRAZOLE
     Dosage: 30 MG
     Route: 065
  946. LANSOPRAZOLE [Suspect]
     Active Substance: LANSOPRAZOLE
     Dosage: 30 MG
     Route: 065
  947. LANSOPRAZOLE [Suspect]
     Active Substance: LANSOPRAZOLE
     Indication: Off label use
     Dosage: UNK
     Route: 048
  948. LANSOPRAZOLE [Suspect]
     Active Substance: LANSOPRAZOLE
     Dosage: UNK
     Route: 065
  949. LANSOPRAZOLE [Suspect]
     Active Substance: LANSOPRAZOLE
     Dosage: UNK
     Route: 065
  950. LANSOPRAZOLE [Suspect]
     Active Substance: LANSOPRAZOLE
     Dosage: UNK, QD
     Route: 065
  951. LANTHANUM CARBONATE [Suspect]
     Active Substance: LANTHANUM CARBONATE
     Indication: Anaemia
     Dosage: 500 MG, QD
     Route: 048
  952. LANTHANUM CARBONATE [Suspect]
     Active Substance: LANTHANUM CARBONATE
     Dosage: 500 MG, QD
     Route: 048
  953. LANTHANUM CARBONATE [Suspect]
     Active Substance: LANTHANUM CARBONATE
     Dosage: 500 MG, QD
     Route: 048
  954. LANTHANUM CARBONATE [Suspect]
     Active Substance: LANTHANUM CARBONATE
     Dosage: 500 MG, QD
     Route: 048
  955. LANTHANUM CARBONATE [Suspect]
     Active Substance: LANTHANUM CARBONATE
     Dosage: 500 MG, QD
     Route: 065
  956. LANTHANUM CARBONATE [Suspect]
     Active Substance: LANTHANUM CARBONATE
     Dosage: 500 MG, QD
     Route: 065
  957. LANTHANUM CARBONATE [Suspect]
     Active Substance: LANTHANUM CARBONATE
     Dosage: 500 MG, QD
     Route: 065
  958. LANTHANUM CARBONATE [Suspect]
     Active Substance: LANTHANUM CARBONATE
     Indication: Off label use
     Dosage: 500 MG
     Route: 048
  959. LANTHANUM CARBONATE [Suspect]
     Active Substance: LANTHANUM CARBONATE
     Dosage: 500 MG
     Route: 048
  960. LANTHANUM CARBONATE [Suspect]
     Active Substance: LANTHANUM CARBONATE
     Dosage: 500 MG
     Route: 048
  961. LANTHANUM CARBONATE [Suspect]
     Active Substance: LANTHANUM CARBONATE
     Dosage: 500 MG
     Route: 065
  962. LANTHANUM CARBONATE [Suspect]
     Active Substance: LANTHANUM CARBONATE
     Dosage: 500 MG
     Route: 065
  963. LANTHANUM CARBONATE [Suspect]
     Active Substance: LANTHANUM CARBONATE
     Dosage: 500 MG
     Route: 065
  964. LANTHANUM CARBONATE [Suspect]
     Active Substance: LANTHANUM CARBONATE
     Dosage: 500 MG
     Route: 065
  965. LANTHANUM CARBONATE [Suspect]
     Active Substance: LANTHANUM CARBONATE
     Dosage: 500 MG
     Route: 065
  966. LANTHANUM CARBONATE [Suspect]
     Active Substance: LANTHANUM CARBONATE
     Indication: Blood phosphorus increased
     Dosage: 500 MG, PRN
     Route: 048
  967. LANTHANUM CARBONATE [Suspect]
     Active Substance: LANTHANUM CARBONATE
     Dosage: 500 UG, QD
     Route: 048
  968. LANTHANUM CARBONATE [Suspect]
     Active Substance: LANTHANUM CARBONATE
     Dosage: 500 UG, QD
     Route: 065
  969. LANTHANUM CARBONATE [Suspect]
     Active Substance: LANTHANUM CARBONATE
     Dosage: 500 UG, QD
     Route: 065
  970. LANTHANUM CARBONATE [Suspect]
     Active Substance: LANTHANUM CARBONATE
     Dosage: 500 UG
     Route: 048
  971. LANTHANUM CARBONATE [Suspect]
     Active Substance: LANTHANUM CARBONATE
     Dosage: 500 UG
     Route: 048
  972. LANTHANUM CARBONATE [Suspect]
     Active Substance: LANTHANUM CARBONATE
     Dosage: 550 MG, QD
     Route: 048
  973. LANTHANUM CARBONATE [Suspect]
     Active Substance: LANTHANUM CARBONATE
     Dosage: 550 MG
     Route: 065
  974. LANTHANUM CARBONATE [Suspect]
     Active Substance: LANTHANUM CARBONATE
     Dosage: 500 UNK, QD
     Route: 048
  975. LANTHANUM CARBONATE [Suspect]
     Active Substance: LANTHANUM CARBONATE
     Dosage: 500 UNK, QD
     Route: 048
  976. LANTHANUM CARBONATE [Suspect]
     Active Substance: LANTHANUM CARBONATE
     Dosage: 500 UNK, QD
     Route: 048
  977. LANTHANUM CARBONATE [Suspect]
     Active Substance: LANTHANUM CARBONATE
     Dosage: 500 UNK
     Route: 048
  978. LANTHANUM CARBONATE [Suspect]
     Active Substance: LANTHANUM CARBONATE
     Dosage: 500 UNK
     Route: 048
  979. LANTHANUM CARBONATE [Suspect]
     Active Substance: LANTHANUM CARBONATE
     Dosage: 500 UNK
     Route: 048
  980. LANTHANUM CARBONATE [Suspect]
     Active Substance: LANTHANUM CARBONATE
     Dosage: UNK
     Route: 048
  981. LANTHANUM CARBONATE [Suspect]
     Active Substance: LANTHANUM CARBONATE
     Indication: Hyperphosphataemia
     Dosage: UNK
     Route: 065
  982. LANTHANUM CARBONATE [Suspect]
     Active Substance: LANTHANUM CARBONATE
     Dosage: UNK
     Route: 065
  983. LANTHANUM CARBONATE [Suspect]
     Active Substance: LANTHANUM CARBONATE
     Dosage: UNK
     Route: 065
  984. LANTHANUM CARBONATE [Suspect]
     Active Substance: LANTHANUM CARBONATE
     Dosage: UNK
     Route: 065
  985. LANTHANUM CARBONATE [Suspect]
     Active Substance: LANTHANUM CARBONATE
     Dosage: UNK
     Route: 065
  986. LANTHANUM CARBONATE [Suspect]
     Active Substance: LANTHANUM CARBONATE
     Dosage: UNK
     Route: 065
  987. LANTHANUM CARBONATE [Suspect]
     Active Substance: LANTHANUM CARBONATE
     Dosage: UNK
     Route: 065
  988. LEVOPHED [Suspect]
     Active Substance: NOREPINEPHRINE BITARTRATE
     Indication: Stress
     Route: 042
  989. LIDOCAINE HYDROCHLORIDE [Suspect]
     Active Substance: LIDOCAINE HYDROCHLORIDE
     Indication: Ventricular fibrillation
     Dosage: 133 ML
     Route: 065
  990. LIDOCAINE HYDROCHLORIDE [Suspect]
     Active Substance: LIDOCAINE HYDROCHLORIDE
     Dosage: UNK
     Route: 065
  991. LIDOCAINE HYDROCHLORIDE [Suspect]
     Active Substance: LIDOCAINE HYDROCHLORIDE
     Indication: Constipation
     Dosage: UNK (TOPICAL)
     Route: 061
  992. LUTEIN [Suspect]
     Active Substance: LUTEIN
     Indication: Nutritional supplementation
     Dosage: 12.5 G
     Route: 042
  993. LUTEIN [Suspect]
     Active Substance: LUTEIN
     Indication: Off label use
     Dosage: UNK
     Route: 065
  994. LUTEIN [Suspect]
     Active Substance: LUTEIN
     Indication: Intentional product misuse
  995. LYPRESSIN [Suspect]
     Active Substance: LYPRESSIN
     Dosage: 250 ML
     Route: 042
  996. LYPRESSIN [Suspect]
     Active Substance: LYPRESSIN
     Dosage: 50 ML
     Route: 042
  997. LYPRESSIN [Suspect]
     Active Substance: LYPRESSIN
     Dosage: UNK
     Route: 017
  998. LYPRESSIN [Suspect]
     Active Substance: LYPRESSIN
     Indication: Drug therapy
     Dosage: UNK
     Route: 042
  999. LYPRESSIN [Suspect]
     Active Substance: LYPRESSIN
     Dosage: UNK
     Route: 042
  1000. METRONIDAZOLE [Suspect]
     Active Substance: METRONIDAZOLE
     Dosage: 1500 MG, TID
     Route: 065
  1001. METRONIDAZOLE [Suspect]
     Active Substance: METRONIDAZOLE
     Dosage: 1500 MG
     Route: 065
  1002. METRONIDAZOLE [Suspect]
     Active Substance: METRONIDAZOLE
     Dosage: 500 MG, TID
     Route: 065
  1003. METRONIDAZOLE [Suspect]
     Active Substance: METRONIDAZOLE
     Dosage: 1500 UNK, QD
     Route: 048
  1004. METRONIDAZOLE [Suspect]
     Active Substance: METRONIDAZOLE
     Indication: Off label use
     Dosage: 1500 MG
     Route: 048
  1005. METRONIDAZOLE [Suspect]
     Active Substance: METRONIDAZOLE
     Dosage: 1500 MG
     Route: 065
  1006. METRONIDAZOLE [Suspect]
     Active Substance: METRONIDAZOLE
     Dosage: 1500 MG, Q8H
     Route: 048
  1007. METRONIDAZOLE [Suspect]
     Active Substance: METRONIDAZOLE
     Indication: Anaemia
     Dosage: 1500 MG, QD
     Route: 048
  1008. METRONIDAZOLE [Suspect]
     Active Substance: METRONIDAZOLE
     Dosage: 1500 MG, QD
     Route: 048
  1009. METRONIDAZOLE [Suspect]
     Active Substance: METRONIDAZOLE
     Dosage: 1500 MG, QD
     Route: 065
  1010. METRONIDAZOLE [Suspect]
     Active Substance: METRONIDAZOLE
     Dosage: 1500 UNK, Q8H
     Route: 065
  1011. METRONIDAZOLE [Suspect]
     Active Substance: METRONIDAZOLE
     Dosage: 1500 UNK, TID
     Route: 048
  1012. METRONIDAZOLE [Suspect]
     Active Substance: METRONIDAZOLE
     Dosage: 1500 MG, Q8H
     Route: 048
  1013. METRONIDAZOLE [Suspect]
     Active Substance: METRONIDAZOLE
     Dosage: 1500 MG
     Route: 065
  1014. METRONIDAZOLE [Suspect]
     Active Substance: METRONIDAZOLE
     Dosage: 1500 MG
     Route: 065
  1015. METRONIDAZOLE [Suspect]
     Active Substance: METRONIDAZOLE
     Dosage: 1500 UG, QD
     Route: 048
  1016. METRONIDAZOLE [Suspect]
     Active Substance: METRONIDAZOLE
     Dosage: 1500 UG, QD
     Route: 048
  1017. METRONIDAZOLE [Suspect]
     Active Substance: METRONIDAZOLE
     Dosage: 1500 UG, QD
     Route: 048
  1018. METRONIDAZOLE [Suspect]
     Active Substance: METRONIDAZOLE
     Indication: Bacterial infection
     Dosage: 500 MG, Q8H
     Route: 048
  1019. METRONIDAZOLE [Suspect]
     Active Substance: METRONIDAZOLE
     Dosage: 500 MG, Q8H
     Route: 048
  1020. METRONIDAZOLE [Suspect]
     Active Substance: METRONIDAZOLE
     Dosage: 500 MG, Q8H
     Route: 048
  1021. METRONIDAZOLE [Suspect]
     Active Substance: METRONIDAZOLE
     Dosage: 500 MG, Q8H
     Route: 048
  1022. METRONIDAZOLE [Suspect]
     Active Substance: METRONIDAZOLE
     Dosage: 500 MG, QD
     Route: 048
  1023. METRONIDAZOLE [Suspect]
     Active Substance: METRONIDAZOLE
     Dosage: 500 MG, QD
     Route: 048
  1024. METRONIDAZOLE [Suspect]
     Active Substance: METRONIDAZOLE
     Dosage: 500 MG, QD
     Route: 048
  1025. METRONIDAZOLE [Suspect]
     Active Substance: METRONIDAZOLE
     Dosage: 500 MG, QD
     Route: 048
  1026. METRONIDAZOLE [Suspect]
     Active Substance: METRONIDAZOLE
     Dosage: 500 MG, QD
     Route: 065
  1027. METRONIDAZOLE [Suspect]
     Active Substance: METRONIDAZOLE
     Dosage: 500 MG, Q8H
     Route: 065
  1028. METRONIDAZOLE [Suspect]
     Active Substance: METRONIDAZOLE
     Indication: Intentional product misuse
     Dosage: 500 MG, TID
     Route: 048
  1029. METRONIDAZOLE [Suspect]
     Active Substance: METRONIDAZOLE
     Dosage: 500 MG, TID
     Route: 048
  1030. METRONIDAZOLE [Suspect]
     Active Substance: METRONIDAZOLE
     Dosage: 500 MG, TID
     Route: 065
  1031. METRONIDAZOLE [Suspect]
     Active Substance: METRONIDAZOLE
     Dosage: UNK
     Route: 048
  1032. METRONIDAZOLE [Suspect]
     Active Substance: METRONIDAZOLE
     Dosage: 500 MG
     Route: 048
  1033. METRONIDAZOLE [Suspect]
     Active Substance: METRONIDAZOLE
     Dosage: UNK
     Route: 048
  1034. METRONIDAZOLE [Suspect]
     Active Substance: METRONIDAZOLE
     Dosage: 500 UG
     Route: 048
  1035. METRONIDAZOLE [Suspect]
     Active Substance: METRONIDAZOLE
     Dosage: 500 UG, Q8H
     Route: 065
  1036. METRONIDAZOLE [Suspect]
     Active Substance: METRONIDAZOLE
     Dosage: 500 UG, QD
     Route: 048
  1037. METRONIDAZOLE [Suspect]
     Active Substance: METRONIDAZOLE
     Dosage: 500 UG, QD
     Route: 048
  1038. METRONIDAZOLE [Suspect]
     Active Substance: METRONIDAZOLE
     Dosage: 500 UG, QD
     Route: 048
  1039. METRONIDAZOLE [Suspect]
     Active Substance: METRONIDAZOLE
     Dosage: 500 UG, QD
     Route: 048
  1040. METRONIDAZOLE [Suspect]
     Active Substance: METRONIDAZOLE
     Dosage: 500 UG, QD
     Route: 048
  1041. METRONIDAZOLE [Suspect]
     Active Substance: METRONIDAZOLE
     Dosage: 550 MG, QD (1 EVERY 8 HOURS)
     Route: 048
  1042. METRONIDAZOLE [Suspect]
     Active Substance: METRONIDAZOLE
     Dosage: UNK, QD
     Route: 048
  1043. METRONIDAZOLE [Suspect]
     Active Substance: METRONIDAZOLE
     Dosage: UNK, QD
     Route: 048
  1044. METRONIDAZOLE [Suspect]
     Active Substance: METRONIDAZOLE
     Dosage: UNK, QD
     Route: 048
  1045. METRONIDAZOLE [Suspect]
     Active Substance: METRONIDAZOLE
     Dosage: UNK, Q8H
     Route: 048
  1046. MAALOX ANTACID [Suspect]
     Active Substance: ALUMINUM HYDROXIDE\DIMETHICONE\MAGNESIUM HYDROXIDE
     Indication: Constipation
     Dosage: 133 ML, PRN
     Route: 054
  1047. MAALOX ANTACID [Suspect]
     Active Substance: ALUMINUM HYDROXIDE\DIMETHICONE\MAGNESIUM HYDROXIDE
     Dosage: 133 ML, PRN
     Route: 054
  1048. POLYETHYLENE GLYCOLS [Suspect]
     Active Substance: POLYETHYLENE GLYCOLS
     Dosage: 17 G, QD
     Route: 048
  1049. POLYETHYLENE GLYCOLS [Suspect]
     Active Substance: POLYETHYLENE GLYCOLS
     Dosage: 12.5 G
     Route: 042
  1050. POLYETHYLENE GLYCOLS [Suspect]
     Active Substance: POLYETHYLENE GLYCOLS
     Dosage: 12.5 G
     Route: 054
  1051. POLYETHYLENE GLYCOLS [Suspect]
     Active Substance: POLYETHYLENE GLYCOLS
     Indication: Nutritional supplementation
     Dosage: 17 G, QD
     Route: 065
  1052. POLYETHYLENE GLYCOLS [Suspect]
     Active Substance: POLYETHYLENE GLYCOLS
     Dosage: 17 G
     Route: 048
  1053. POLYETHYLENE GLYCOLS [Suspect]
     Active Substance: POLYETHYLENE GLYCOLS
     Dosage: 17 MG, QD
     Route: 054
  1054. POLYETHYLENE GLYCOLS [Suspect]
     Active Substance: POLYETHYLENE GLYCOLS
     Dosage: 17 MG, QD
     Route: 054
  1055. POLYETHYLENE GLYCOLS [Suspect]
     Active Substance: POLYETHYLENE GLYCOLS
     Dosage: 17 MG, QD
     Route: 054
  1056. POLYETHYLENE GLYCOLS [Suspect]
     Active Substance: POLYETHYLENE GLYCOLS
     Dosage: 17 MG, QD
     Route: 054
  1057. POLYETHYLENE GLYCOLS [Suspect]
     Active Substance: POLYETHYLENE GLYCOLS
     Indication: Constipation
     Dosage: 17 MG
     Route: 054
  1058. POLYETHYLENE GLYCOLS [Suspect]
     Active Substance: POLYETHYLENE GLYCOLS
     Indication: Off label use
     Dosage: 17 MG
     Route: 054
  1059. POLYETHYLENE GLYCOLS [Suspect]
     Active Substance: POLYETHYLENE GLYCOLS
     Dosage: 17 MG
     Route: 054
  1060. POLYETHYLENE GLYCOLS [Suspect]
     Active Substance: POLYETHYLENE GLYCOLS
     Dosage: 17 MG
     Route: 065
  1061. POLYETHYLENE GLYCOLS [Suspect]
     Active Substance: POLYETHYLENE GLYCOLS
     Dosage: 2.5 ML
     Route: 042
  1062. POLYETHYLENE GLYCOLS [Suspect]
     Active Substance: POLYETHYLENE GLYCOLS
     Dosage: 2.5 ML
     Route: 042
  1063. POLYETHYLENE GLYCOLS [Suspect]
     Active Substance: POLYETHYLENE GLYCOLS
     Dosage: 2.5 ML
     Route: 065
  1064. POLYETHYLENE GLYCOLS [Suspect]
     Active Substance: POLYETHYLENE GLYCOLS
     Dosage: 3 MG, QW
     Route: 048
  1065. POLYETHYLENE GLYCOLS [Suspect]
     Active Substance: POLYETHYLENE GLYCOLS
     Dosage: 3 MG, QW
     Route: 054
  1066. POLYETHYLENE GLYCOLS [Suspect]
     Active Substance: POLYETHYLENE GLYCOLS
     Dosage: 3 MG, QW
     Route: 065
  1067. POLYETHYLENE GLYCOLS [Suspect]
     Active Substance: POLYETHYLENE GLYCOLS
     Dosage: 3 MG
     Route: 065
  1068. POLYETHYLENE GLYCOLS [Suspect]
     Active Substance: POLYETHYLENE GLYCOLS
     Dosage: UNK, QD
     Route: 054
  1069. POLYETHYLENE GLYCOLS [Suspect]
     Active Substance: POLYETHYLENE GLYCOLS
     Dosage: UNK, QD
     Route: 054
  1070. POLYETHYLENE GLYCOLS [Suspect]
     Active Substance: POLYETHYLENE GLYCOLS
     Dosage: UNK, QD
     Route: 048
  1071. POLYETHYLENE GLYCOLS [Suspect]
     Active Substance: POLYETHYLENE GLYCOLS
     Dosage: 1 UNK, Q6H
     Route: 065
  1072. POLYETHYLENE GLYCOLS [Suspect]
     Active Substance: POLYETHYLENE GLYCOLS
     Indication: Iron deficiency
     Dosage: UNK
     Route: 048
  1073. POLYETHYLENE GLYCOLS [Suspect]
     Active Substance: POLYETHYLENE GLYCOLS
     Dosage: UNK
     Route: 048
  1074. POLYETHYLENE GLYCOL 3350 [Suspect]
     Active Substance: POLYETHYLENE GLYCOL 3350
     Indication: Constipation
     Dosage: 17 G, QD
     Route: 048
  1075. POLYETHYLENE GLYCOL 3350 [Suspect]
     Active Substance: POLYETHYLENE GLYCOL 3350
     Dosage: 17 G
     Route: 048
  1076. POLYETHYLENE GLYCOL 3350 [Suspect]
     Active Substance: POLYETHYLENE GLYCOL 3350
     Indication: Off label use
     Dosage: 17 MG, QD
     Route: 048
  1077. POLYETHYLENE GLYCOL 3350 [Suspect]
     Active Substance: POLYETHYLENE GLYCOL 3350
     Dosage: 17 MG, QD
     Route: 048
  1078. POLYETHYLENE GLYCOL 3350 [Suspect]
     Active Substance: POLYETHYLENE GLYCOL 3350
     Dosage: 17 MG, QD
     Route: 048
  1079. POLYETHYLENE GLYCOL 3350 [Suspect]
     Active Substance: POLYETHYLENE GLYCOL 3350
     Dosage: 17 MG, QD
     Route: 048
  1080. POLYETHYLENE GLYCOL 3350 [Suspect]
     Active Substance: POLYETHYLENE GLYCOL 3350
     Dosage: 17 MG
     Route: 048
  1081. POLYETHYLENE GLYCOL 3350 [Suspect]
     Active Substance: POLYETHYLENE GLYCOL 3350
     Dosage: 17 MG
     Route: 065
  1082. POLYETHYLENE GLYCOL 3350 [Suspect]
     Active Substance: POLYETHYLENE GLYCOL 3350
     Dosage: 2.5 ML
     Route: 042
  1083. POLYETHYLENE GLYCOL 3350 [Suspect]
     Active Substance: POLYETHYLENE GLYCOL 3350
     Dosage: 3 MG, QW
     Route: 048
  1084. POLYETHYLENE GLYCOL 3350 [Suspect]
     Active Substance: POLYETHYLENE GLYCOL 3350
     Dosage: 3 MG, QW
     Route: 065
  1085. POLYETHYLENE GLYCOL 3350 [Suspect]
     Active Substance: POLYETHYLENE GLYCOL 3350
     Dosage: UNK
     Route: 048
  1086. POLYETHYLENE GLYCOL 3350 [Suspect]
     Active Substance: POLYETHYLENE GLYCOL 3350
     Dosage: UNK, QD
     Route: 048
  1087. POLYETHYLENE GLYCOL 3350 [Suspect]
     Active Substance: POLYETHYLENE GLYCOL 3350
     Dosage: UNK
     Route: 048
  1088. POLYETHYLENE GLYCOL 3350 [Suspect]
     Active Substance: POLYETHYLENE GLYCOL 3350
     Dosage: UNK
     Route: 048
  1089. POLYETHYLENE GLYCOL 3350 [Suspect]
     Active Substance: POLYETHYLENE GLYCOL 3350
     Dosage: UNK
     Route: 065
  1090. POLYETHYLENE GLYCOL 3350 [Suspect]
     Active Substance: POLYETHYLENE GLYCOL 3350
     Dosage: UNK
     Route: 065
  1091. POLYETHYLENE GLYCOL 3350 [Suspect]
     Active Substance: POLYETHYLENE GLYCOL 3350
     Dosage: UNK, QD
     Route: 065
  1092. MAGNESIUM CARBONATE [Suspect]
     Active Substance: MAGNESIUM CARBONATE
     Dosage: 133 ML, QD
     Route: 065
  1093. MAGNESIUM CARBONATE [Suspect]
     Active Substance: MAGNESIUM CARBONATE
     Indication: Constipation
     Dosage: 133 ML, PRN
     Route: 065
  1094. MAGNESIUM CARBONATE [Suspect]
     Active Substance: MAGNESIUM CARBONATE
     Dosage: UNK
     Route: 065
  1095. MAGNESIUM OXIDE [Suspect]
     Active Substance: MAGNESIUM OXIDE
     Dosage: 113 ML, PRN
     Route: 054
  1096. MAGNESIUM OXIDE [Suspect]
     Active Substance: MAGNESIUM OXIDE
     Dosage: 133 ML, QD
     Route: 065
  1097. MAGNESIUM OXIDE [Suspect]
     Active Substance: MAGNESIUM OXIDE
     Dosage: 133 ML, QD
     Route: 065
  1098. MAGNESIUM OXIDE [Suspect]
     Active Substance: MAGNESIUM OXIDE
     Dosage: 133 ML, PRN
     Route: 065
  1099. MAGNESIUM OXIDE [Suspect]
     Active Substance: MAGNESIUM OXIDE
     Dosage: 133 ML
     Route: 065
  1100. MAGNESIUM OXIDE [Suspect]
     Active Substance: MAGNESIUM OXIDE
     Indication: Constipation
     Dosage: 133 ML, PRN
     Route: 054
  1101. MAGNESIUM OXIDE [Suspect]
     Active Substance: MAGNESIUM OXIDE
     Dosage: 133 UNK, QD
     Route: 065
  1102. MAGNESIUM OXIDE [Suspect]
     Active Substance: MAGNESIUM OXIDE
     Dosage: UNK
     Route: 054
  1103. ALUMINUM HYDROXIDE\MAGNESIUM TRISILICATE [Suspect]
     Active Substance: ALUMINUM HYDROXIDE\MAGNESIUM TRISILICATE
     Indication: Constipation
     Dosage: 133 ML, PRN
     Route: 065
  1104. ALUMINUM HYDROXIDE\MAGNESIUM TRISILICATE [Suspect]
     Active Substance: ALUMINUM HYDROXIDE\MAGNESIUM TRISILICATE
     Dosage: UNK
     Route: 065
  1105. MALTOSE [Suspect]
     Active Substance: MALTOSE
     Dosage: 12.5 G
     Route: 040
  1106. MALTOSE [Suspect]
     Active Substance: MALTOSE
     Dosage: 12.5 G
     Route: 040
  1107. MALTOSE [Suspect]
     Active Substance: MALTOSE
     Indication: Nutritional supplementation
     Dosage: 12.5 G
     Route: 042
  1108. MALTOSE [Suspect]
     Active Substance: MALTOSE
     Dosage: 12.5 G
     Route: 065
  1109. MALTOSE [Suspect]
     Active Substance: MALTOSE
     Dosage: 12.5 MG
     Route: 042
  1110. MALTOSE [Suspect]
     Active Substance: MALTOSE
     Dosage: 12.5 MG
     Route: 065
  1111. MALTOSE [Suspect]
     Active Substance: MALTOSE
     Dosage: 12.5 UNK
     Route: 042
  1112. MALTOSE [Suspect]
     Active Substance: MALTOSE
     Dosage: UNK
     Route: 065
  1113. MALTOSE [Suspect]
     Active Substance: MALTOSE
     Dosage: UNK
     Route: 065
  1114. MANNITOL [Suspect]
     Active Substance: MANNITOL
     Indication: Nutritional supplementation
     Dosage: 12.5 G
     Route: 042
  1115. MANNITOL [Suspect]
     Active Substance: MANNITOL
     Dosage: UNK
     Route: 040
  1116. MANNITOL [Suspect]
     Active Substance: MANNITOL
     Dosage: UNK
     Route: 040
  1117. MANNITOL [Suspect]
     Active Substance: MANNITOL
     Dosage: UNK
     Route: 042
  1118. MELATONIN [Suspect]
     Active Substance: MELATONIN
     Dosage: 3 MG
     Route: 048
  1119. MELATONIN [Suspect]
     Active Substance: MELATONIN
     Dosage: 3 MG, QW
     Route: 048
  1120. MELATONIN [Suspect]
     Active Substance: MELATONIN
     Indication: Sleep disorder therapy
     Dosage: 3 MG, QD
     Route: 048
  1121. MELATONIN [Suspect]
     Active Substance: MELATONIN
     Dosage: 3 MG, QD
     Route: 048
  1122. MELATONIN [Suspect]
     Active Substance: MELATONIN
     Dosage: 3 MG, QD
     Route: 048
  1123. MELATONIN [Suspect]
     Active Substance: MELATONIN
     Dosage: 3 MG, QD
     Route: 065
  1124. MELATONIN [Suspect]
     Active Substance: MELATONIN
     Dosage: 3 MG
     Route: 048
  1125. MELATONIN [Suspect]
     Active Substance: MELATONIN
     Dosage: 3 MG
     Route: 048
  1126. MELATONIN [Suspect]
     Active Substance: MELATONIN
     Dosage: 30 MG, QD
     Route: 065
  1127. MELATONIN [Suspect]
     Active Substance: MELATONIN
     Dosage: UNK
     Route: 048
  1128. MELATONIN [Suspect]
     Active Substance: MELATONIN
     Indication: Off label use
     Dosage: UNK
     Route: 048
  1129. MELATONIN [Suspect]
     Active Substance: MELATONIN
     Dosage: UNK
     Route: 048
  1130. MELATONIN [Suspect]
     Active Substance: MELATONIN
     Indication: Intentional product misuse
     Dosage: UNK
     Route: 065
  1131. METAMIZOLE SODIUM [Suspect]
     Active Substance: METAMIZOLE SODIUM
     Indication: Intentional product misuse
     Dosage: 5 MG/DL
     Route: 042
  1132. METAMIZOLE SODIUM [Suspect]
     Active Substance: METAMIZOLE SODIUM
     Indication: Vitamin supplementation
     Dosage: 5 MG, QD
     Route: 042
  1133. METAMIZOLE SODIUM [Suspect]
     Active Substance: METAMIZOLE SODIUM
     Indication: Off label use
     Dosage: 5 MG
     Route: 040
  1134. METRONIDAZOLE BENZOATE [Suspect]
     Active Substance: METRONIDAZOLE BENZOATE
     Indication: Intentional product misuse
     Dosage: 1500 MG, QD
     Route: 048
  1135. METRONIDAZOLE BENZOATE [Suspect]
     Active Substance: METRONIDAZOLE BENZOATE
     Indication: Off label use
     Dosage: 1500 MG, QD
     Route: 048
  1136. METRONIDAZOLE BENZOATE [Suspect]
     Active Substance: METRONIDAZOLE BENZOATE
     Dosage: 1500 MG, QD
     Route: 048
  1137. METRONIDAZOLE BENZOATE [Suspect]
     Active Substance: METRONIDAZOLE BENZOATE
     Dosage: 1500 MG, QD
     Route: 048
  1138. METRONIDAZOLE BENZOATE [Suspect]
     Active Substance: METRONIDAZOLE BENZOATE
     Indication: Bacterial infection
     Dosage: 1500 MG, TID
     Route: 048
  1139. MONOFERRIC [Suspect]
     Active Substance: FERRIC DERISOMALTOSE
     Indication: Nutritional supplementation
     Dosage: 12.5 G
     Route: 042
  1140. SODIUM PHOSPHATE, MONOBASIC [Suspect]
     Active Substance: SODIUM PHOSPHATE, MONOBASIC
     Indication: Constipation
     Route: 054
  1141. NATAMYCIN [Suspect]
     Active Substance: NATAMYCIN
     Indication: Bacterial infection
     Dosage: 1500 MG
     Route: 065
  1142. NOREPINEPHRINE [Suspect]
     Active Substance: NOREPINEPHRINE\NOREPINEPHRINE BITARTRATE
     Dosage: 1 DOSAGE FORM, QD
     Route: 042
  1143. NOREPINEPHRINE [Suspect]
     Active Substance: NOREPINEPHRINE\NOREPINEPHRINE BITARTRATE
     Indication: Nutritional supplementation
     Dosage: 1 DOSAGE FORM, QD
     Route: 048
  1144. NOREPINEPHRINE [Suspect]
     Active Substance: NOREPINEPHRINE\NOREPINEPHRINE BITARTRATE
     Dosage: 1 DOSAGE FORM
     Route: 040
  1145. NOREPINEPHRINE [Suspect]
     Active Substance: NOREPINEPHRINE\NOREPINEPHRINE BITARTRATE
     Dosage: 1 DOSAGE FORM
     Route: 042
  1146. NOREPINEPHRINE [Suspect]
     Active Substance: NOREPINEPHRINE\NOREPINEPHRINE BITARTRATE
     Dosage: 1 DOSAGE FORM
     Route: 042
  1147. NOREPINEPHRINE [Suspect]
     Active Substance: NOREPINEPHRINE\NOREPINEPHRINE BITARTRATE
     Dosage: 1 DOSAGE FORM
     Route: 048
  1148. NOREPINEPHRINE [Suspect]
     Active Substance: NOREPINEPHRINE\NOREPINEPHRINE BITARTRATE
     Dosage: 12.5 MG, QD
     Route: 048
  1149. NOREPINEPHRINE [Suspect]
     Active Substance: NOREPINEPHRINE\NOREPINEPHRINE BITARTRATE
     Indication: Off label use
     Dosage: 3 MG, QD
     Route: 048
  1150. NOREPINEPHRINE [Suspect]
     Active Substance: NOREPINEPHRINE\NOREPINEPHRINE BITARTRATE
     Dosage: 3 MG, QD
     Route: 048
  1151. NOREPINEPHRINE [Suspect]
     Active Substance: NOREPINEPHRINE\NOREPINEPHRINE BITARTRATE
     Dosage: 3 MG
     Route: 042
  1152. NOREPINEPHRINE [Suspect]
     Active Substance: NOREPINEPHRINE\NOREPINEPHRINE BITARTRATE
     Dosage: 3 MG
     Route: 048
  1153. NOREPINEPHRINE [Suspect]
     Active Substance: NOREPINEPHRINE\NOREPINEPHRINE BITARTRATE
     Dosage: 3 MG
     Route: 048
  1154. NOREPINEPHRINE [Suspect]
     Active Substance: NOREPINEPHRINE\NOREPINEPHRINE BITARTRATE
     Dosage: 3 MG
     Route: 048
  1155. NOREPINEPHRINE [Suspect]
     Active Substance: NOREPINEPHRINE\NOREPINEPHRINE BITARTRATE
     Dosage: UNK
     Route: 042
  1156. NOREPINEPHRINE [Suspect]
     Active Substance: NOREPINEPHRINE\NOREPINEPHRINE BITARTRATE
     Dosage: UNK
     Route: 042
  1157. NOREPINEPHRINE [Suspect]
     Active Substance: NOREPINEPHRINE\NOREPINEPHRINE BITARTRATE
     Dosage: UNK
     Route: 042
  1158. NOREPINEPHRINE [Suspect]
     Active Substance: NOREPINEPHRINE\NOREPINEPHRINE BITARTRATE
     Dosage: UNK
     Route: 042
  1159. NOREPINEPHRINE [Suspect]
     Active Substance: NOREPINEPHRINE\NOREPINEPHRINE BITARTRATE
     Dosage: UNK
     Route: 042
  1160. NOREPINEPHRINE [Suspect]
     Active Substance: NOREPINEPHRINE\NOREPINEPHRINE BITARTRATE
     Dosage: UNK
     Route: 042
  1161. NOREPINEPHRINE [Suspect]
     Active Substance: NOREPINEPHRINE\NOREPINEPHRINE BITARTRATE
     Dosage: UNK
     Route: 042
  1162. NOREPINEPHRINE [Suspect]
     Active Substance: NOREPINEPHRINE\NOREPINEPHRINE BITARTRATE
     Indication: Stress
     Dosage: UNK
     Route: 048
  1163. NOREPINEPHRINE [Suspect]
     Active Substance: NOREPINEPHRINE\NOREPINEPHRINE BITARTRATE
     Dosage: UNK
     Route: 048
  1164. NOREPINEPHRINE [Suspect]
     Active Substance: NOREPINEPHRINE\NOREPINEPHRINE BITARTRATE
     Dosage: UNK
     Route: 065
  1165. NOREPINEPHRINE [Suspect]
     Active Substance: NOREPINEPHRINE\NOREPINEPHRINE BITARTRATE
     Dosage: UNK
     Route: 065
  1166. NOREPINEPHRINE [Suspect]
     Active Substance: NOREPINEPHRINE\NOREPINEPHRINE BITARTRATE
     Dosage: UNK
     Route: 065
  1167. NOREPINEPHRINE [Suspect]
     Active Substance: NOREPINEPHRINE\NOREPINEPHRINE BITARTRATE
     Indication: Intentional product misuse
     Dosage: UNK (ONCE)
     Route: 042
  1168. NOREPINEPHRINE BITARTRATE [Suspect]
     Active Substance: NOREPINEPHRINE BITARTRATE
     Dosage: 1 MG
     Route: 042
  1169. NOREPINEPHRINE BITARTRATE [Suspect]
     Active Substance: NOREPINEPHRINE BITARTRATE
     Dosage: 1 DOSAGE FORM
     Route: 065
  1170. NOREPINEPHRINE BITARTRATE [Suspect]
     Active Substance: NOREPINEPHRINE BITARTRATE
     Dosage: 1 DOSAGE FORM, QD
     Route: 048
  1171. NOREPINEPHRINE BITARTRATE [Suspect]
     Active Substance: NOREPINEPHRINE BITARTRATE
     Dosage: 1 DOSAGE FORM, QD
     Route: 065
  1172. NOREPINEPHRINE BITARTRATE [Suspect]
     Active Substance: NOREPINEPHRINE BITARTRATE
     Dosage: 1 DF
     Route: 048
  1173. NOREPINEPHRINE BITARTRATE [Suspect]
     Active Substance: NOREPINEPHRINE BITARTRATE
     Dosage: 1 DF
     Route: 048
  1174. NOREPINEPHRINE BITARTRATE [Suspect]
     Active Substance: NOREPINEPHRINE BITARTRATE
     Dosage: 1 DOSAGE FORM
     Route: 048
  1175. NOREPINEPHRINE BITARTRATE [Suspect]
     Active Substance: NOREPINEPHRINE BITARTRATE
     Indication: Intentional product misuse
     Dosage: 3 MG, QD
     Route: 048
  1176. NOREPINEPHRINE BITARTRATE [Suspect]
     Active Substance: NOREPINEPHRINE BITARTRATE
     Indication: Off label use
     Dosage: 3 MG, QD
     Route: 048
  1177. NOREPINEPHRINE BITARTRATE [Suspect]
     Active Substance: NOREPINEPHRINE BITARTRATE
     Dosage: 3 MG
     Route: 048
  1178. NOREPINEPHRINE BITARTRATE [Suspect]
     Active Substance: NOREPINEPHRINE BITARTRATE
     Dosage: 3 MG
     Route: 048
  1179. NOREPINEPHRINE BITARTRATE [Suspect]
     Active Substance: NOREPINEPHRINE BITARTRATE
     Dosage: 300 MG
     Route: 048
  1180. NOREPINEPHRINE BITARTRATE [Suspect]
     Active Substance: NOREPINEPHRINE BITARTRATE
     Dosage: UNK UNK, QD
     Route: 048
  1181. NOREPINEPHRINE BITARTRATE [Suspect]
     Active Substance: NOREPINEPHRINE BITARTRATE
     Dosage: UNK UNK, QD
     Route: 048
  1182. NOREPINEPHRINE BITARTRATE [Suspect]
     Active Substance: NOREPINEPHRINE BITARTRATE
     Dosage: UNK, QD
     Route: 065
  1183. NOREPINEPHRINE BITARTRATE [Suspect]
     Active Substance: NOREPINEPHRINE BITARTRATE
     Dosage: 1 UNK, QD
     Route: 065
  1184. NOREPINEPHRINE BITARTRATE [Suspect]
     Active Substance: NOREPINEPHRINE BITARTRATE
     Indication: Stress
     Dosage: UNK
     Route: 042
  1185. NOREPINEPHRINE BITARTRATE [Suspect]
     Active Substance: NOREPINEPHRINE BITARTRATE
     Dosage: UNK
     Route: 048
  1186. NOREPINEPHRINE BITARTRATE [Suspect]
     Active Substance: NOREPINEPHRINE BITARTRATE
     Dosage: UNK
     Route: 065
  1187. DIETARY SUPPLEMENT [Suspect]
     Active Substance: DIETARY SUPPLEMENT
     Indication: Vitamin supplementation
     Dosage: 5 MG
     Route: 065
  1188. METAMIZOLE SODIUM [Suspect]
     Active Substance: METAMIZOLE SODIUM
     Indication: Vitamin supplementation
     Dosage: 5 MG
     Route: 042
  1189. METAMIZOLE SODIUM [Suspect]
     Active Substance: METAMIZOLE SODIUM
     Indication: Intentional product misuse
  1190. CITRUS FIBER [Suspect]
     Active Substance: CITRUS FIBER
     Dosage: 496 MG
     Route: 042
  1191. CITRUS FIBER [Suspect]
     Active Substance: CITRUS FIBER
     Indication: Vitamin supplementation
     Dosage: UNK
     Route: 042
  1192. NOVORAPID [Suspect]
     Active Substance: INSULIN ASPART
     Dosage: UNK
     Route: 048
  1193. NOVORAPID [Suspect]
     Active Substance: INSULIN ASPART
     Dosage: UNK
     Route: 058
  1194. NOVORAPID [Suspect]
     Active Substance: INSULIN ASPART
     Dosage: UNK
     Route: 058
  1195. NOVORAPID [Suspect]
     Active Substance: INSULIN ASPART
     Indication: Off label use
     Dosage: UNK
     Route: 065
  1196. NOVORAPID [Suspect]
     Active Substance: INSULIN ASPART
     Indication: Diabetes mellitus
     Dosage: UNK (6.0)
     Route: 058
  1197. ONDANSETRON [Suspect]
     Active Substance: ONDANSETRON
     Dosage: 1 DOSAGE FORM, QD
     Route: 042
  1198. ONDANSETRON [Suspect]
     Active Substance: ONDANSETRON
     Dosage: 1 DOSAGE FORM, QD
     Route: 048
  1199. ONDANSETRON [Suspect]
     Active Substance: ONDANSETRON
     Dosage: 1 DOSAGE FORM, QD (1 EVERY 1 DAYS)
     Route: 065
  1200. ONDANSETRON [Suspect]
     Active Substance: ONDANSETRON
     Dosage: 1 DOSAGE FORM, Q6H
     Route: 065
  1201. ONDANSETRON [Suspect]
     Active Substance: ONDANSETRON
     Dosage: 1 DOSAGE FORM, Q8H
     Route: 042
  1202. ONDANSETRON [Suspect]
     Active Substance: ONDANSETRON
     Dosage: 1 DOSAGE FORM, Q8H
     Route: 065
  1203. ONDANSETRON [Suspect]
     Active Substance: ONDANSETRON
     Dosage: 1 DOSAGE FORM
     Route: 042
  1204. ONDANSETRON [Suspect]
     Active Substance: ONDANSETRON
     Dosage: 1 DOSAGE FORM
     Route: 042
  1205. ONDANSETRON [Suspect]
     Active Substance: ONDANSETRON
     Dosage: 1 DOSAGE FORM
     Route: 065
  1206. ONDANSETRON [Suspect]
     Active Substance: ONDANSETRON
     Dosage: 108 MG
     Route: 042
  1207. ONDANSETRON [Suspect]
     Active Substance: ONDANSETRON
     Dosage: 12 MG, QD
     Route: 042
  1208. ONDANSETRON [Suspect]
     Active Substance: ONDANSETRON
     Dosage: 12 MG, QD
     Route: 065
  1209. ONDANSETRON [Suspect]
     Active Substance: ONDANSETRON
     Dosage: 12 MG, Q8H
     Route: 042
  1210. ONDANSETRON [Suspect]
     Active Substance: ONDANSETRON
     Dosage: 12 MG, Q8H
     Route: 042
  1211. ONDANSETRON [Suspect]
     Active Substance: ONDANSETRON
     Dosage: 12 MG, Q8H
     Route: 065
  1212. ONDANSETRON [Suspect]
     Active Substance: ONDANSETRON
     Indication: Off label use
     Dosage: 12 MG, TID
     Route: 042
  1213. ONDANSETRON [Suspect]
     Active Substance: ONDANSETRON
     Dosage: 12 MG
     Route: 042
  1214. ONDANSETRON [Suspect]
     Active Substance: ONDANSETRON
     Dosage: 12 MG
     Route: 065
  1215. ONDANSETRON [Suspect]
     Active Substance: ONDANSETRON
     Dosage: 12 DOSAGE FORM
     Route: 065
  1216. ONDANSETRON [Suspect]
     Active Substance: ONDANSETRON
     Dosage: 120 MG
     Route: 042
  1217. ONDANSETRON [Suspect]
     Active Substance: ONDANSETRON
     Dosage: 24 MG, Q8H
     Route: 042
  1218. ONDANSETRON [Suspect]
     Active Substance: ONDANSETRON
     Dosage: 24 MG, Q8H
     Route: 065
  1219. ONDANSETRON [Suspect]
     Active Substance: ONDANSETRON
     Dosage: 24 MG
     Route: 042
  1220. ONDANSETRON [Suspect]
     Active Substance: ONDANSETRON
     Dosage: 36 MG, Q8H
     Route: 042
  1221. ONDANSETRON [Suspect]
     Active Substance: ONDANSETRON
     Dosage: 36 MG, Q8H
     Route: 065
  1222. ONDANSETRON [Suspect]
     Active Substance: ONDANSETRON
     Dosage: 36 MG
     Route: 042
  1223. ONDANSETRON [Suspect]
     Active Substance: ONDANSETRON
     Dosage: 36 MG
     Route: 042
  1224. ONDANSETRON [Suspect]
     Active Substance: ONDANSETRON
     Dosage: 4 MG, QD
     Route: 042
  1225. ONDANSETRON [Suspect]
     Active Substance: ONDANSETRON
     Dosage: 4 MG, QD
     Route: 065
  1226. ONDANSETRON [Suspect]
     Active Substance: ONDANSETRON
     Indication: Nausea
     Dosage: 4 MG, Q8H
     Route: 042
  1227. ONDANSETRON [Suspect]
     Active Substance: ONDANSETRON
     Indication: Vomiting
     Dosage: 4 MG, Q8H
     Route: 042
  1228. ONDANSETRON [Suspect]
     Active Substance: ONDANSETRON
     Dosage: 4 MG, Q8H
     Route: 042
  1229. ONDANSETRON [Suspect]
     Active Substance: ONDANSETRON
     Dosage: 4 MG, Q8H
     Route: 065
  1230. ONDANSETRON [Suspect]
     Active Substance: ONDANSETRON
     Dosage: 4 MG
     Route: 042
  1231. ONDANSETRON [Suspect]
     Active Substance: ONDANSETRON
     Dosage: 4 MG (1 EVERY 3 DAYS)
     Route: 042
  1232. ONDANSETRON [Suspect]
     Active Substance: ONDANSETRON
     Dosage: 40 MG, Q8H
     Route: 042
  1233. ONDANSETRON [Suspect]
     Active Substance: ONDANSETRON
     Dosage: 40 MG, Q8H
     Route: 065
  1234. ONDANSETRON [Suspect]
     Active Substance: ONDANSETRON
     Dosage: 40 MG, TID
     Route: 042
  1235. ONDANSETRON [Suspect]
     Active Substance: ONDANSETRON
     Dosage: 40 MG, TID
     Route: 042
  1236. ONDANSETRON [Suspect]
     Active Substance: ONDANSETRON
     Dosage: 40 MG
     Route: 042
  1237. ONDANSETRON [Suspect]
     Active Substance: ONDANSETRON
     Dosage: 40 MG
     Route: 042
  1238. ONDANSETRON [Suspect]
     Active Substance: ONDANSETRON
     Dosage: 41.14 MG, Q8H
     Route: 042
  1239. ONDANSETRON [Suspect]
     Active Substance: ONDANSETRON
     Dosage: 41.14 MG, Q8H
     Route: 065
  1240. ONDANSETRON [Suspect]
     Active Substance: ONDANSETRON
     Dosage: 41.14 MG
     Route: 042
  1241. ONDANSETRON [Suspect]
     Active Substance: ONDANSETRON
     Dosage: 41.14 MG
     Route: 042
  1242. ONDANSETRON [Suspect]
     Active Substance: ONDANSETRON
     Dosage: 41.14 MG
     Route: 065
  1243. ONDANSETRON [Suspect]
     Active Substance: ONDANSETRON
     Dosage: 8 MG, Q8H
     Route: 042
  1244. ONDANSETRON [Suspect]
     Active Substance: ONDANSETRON
     Dosage: 8 MG, Q8H
     Route: 065
  1245. ONDANSETRON [Suspect]
     Active Substance: ONDANSETRON
     Dosage: UNK
     Route: 042
  1246. ONDANSETRON [Suspect]
     Active Substance: ONDANSETRON
     Dosage: UNK
     Route: 065
  1247. ONDANSETRON HYDROCHLORIDE [Suspect]
     Active Substance: ONDANSETRON HYDROCHLORIDE
     Dosage: 1 DF, QD
     Route: 042
  1248. ONDANSETRON HYDROCHLORIDE [Suspect]
     Active Substance: ONDANSETRON HYDROCHLORIDE
     Dosage: 1 DOSAGE FORM, QD
     Route: 065
  1249. ONDANSETRON HYDROCHLORIDE [Suspect]
     Active Substance: ONDANSETRON HYDROCHLORIDE
     Dosage: 1 DOSAGE FORM, Q6H
     Route: 065
  1250. ONDANSETRON HYDROCHLORIDE [Suspect]
     Active Substance: ONDANSETRON HYDROCHLORIDE
     Dosage: 1 DOSAGE FORM
     Route: 040
  1251. ONDANSETRON HYDROCHLORIDE [Suspect]
     Active Substance: ONDANSETRON HYDROCHLORIDE
     Dosage: 1 DOSAGE FORM
     Route: 040
  1252. ONDANSETRON HYDROCHLORIDE [Suspect]
     Active Substance: ONDANSETRON HYDROCHLORIDE
     Dosage: 1 DOSAGE FORM
     Route: 042
  1253. ONDANSETRON HYDROCHLORIDE [Suspect]
     Active Substance: ONDANSETRON HYDROCHLORIDE
     Dosage: 1 DOSAGE FORM
     Route: 042
  1254. ONDANSETRON HYDROCHLORIDE [Suspect]
     Active Substance: ONDANSETRON HYDROCHLORIDE
     Dosage: 36 MG, TID
     Route: 040
  1255. ONDANSETRON HYDROCHLORIDE [Suspect]
     Active Substance: ONDANSETRON HYDROCHLORIDE
     Dosage: 12 MG, QD
     Route: 065
  1256. ONDANSETRON HYDROCHLORIDE [Suspect]
     Active Substance: ONDANSETRON HYDROCHLORIDE
     Dosage: 12 MG, QD
     Route: 065
  1257. ONDANSETRON HYDROCHLORIDE [Suspect]
     Active Substance: ONDANSETRON HYDROCHLORIDE
     Dosage: 4 MG, TID
     Route: 040
  1258. ONDANSETRON HYDROCHLORIDE [Suspect]
     Active Substance: ONDANSETRON HYDROCHLORIDE
     Indication: Vomiting
     Dosage: 12 MG, Q8H
     Route: 042
  1259. ONDANSETRON HYDROCHLORIDE [Suspect]
     Active Substance: ONDANSETRON HYDROCHLORIDE
     Dosage: 12 MG, Q8H
     Route: 040
  1260. ONDANSETRON HYDROCHLORIDE [Suspect]
     Active Substance: ONDANSETRON HYDROCHLORIDE
     Dosage: 12 MG, Q8H
     Route: 065
  1261. ONDANSETRON HYDROCHLORIDE [Suspect]
     Active Substance: ONDANSETRON HYDROCHLORIDE
     Dosage: 12 MG, Q8H
     Route: 065
  1262. ONDANSETRON HYDROCHLORIDE [Suspect]
     Active Substance: ONDANSETRON HYDROCHLORIDE
     Dosage: 12 MG, TID
     Route: 042
  1263. ONDANSETRON HYDROCHLORIDE [Suspect]
     Active Substance: ONDANSETRON HYDROCHLORIDE
     Dosage: 12 MG, TID
     Route: 042
  1264. ONDANSETRON HYDROCHLORIDE [Suspect]
     Active Substance: ONDANSETRON HYDROCHLORIDE
     Dosage: 12 MG, TID
     Route: 042
  1265. ONDANSETRON HYDROCHLORIDE [Suspect]
     Active Substance: ONDANSETRON HYDROCHLORIDE
     Dosage: 12 MG, TID
     Route: 042
  1266. ONDANSETRON HYDROCHLORIDE [Suspect]
     Active Substance: ONDANSETRON HYDROCHLORIDE
     Dosage: 12 MG
     Route: 040
  1267. ONDANSETRON HYDROCHLORIDE [Suspect]
     Active Substance: ONDANSETRON HYDROCHLORIDE
     Dosage: 12 MG
     Route: 040
  1268. ONDANSETRON HYDROCHLORIDE [Suspect]
     Active Substance: ONDANSETRON HYDROCHLORIDE
     Dosage: 12 MG
     Route: 042
  1269. ONDANSETRON HYDROCHLORIDE [Suspect]
     Active Substance: ONDANSETRON HYDROCHLORIDE
     Dosage: 12 MG
     Route: 042
  1270. ONDANSETRON HYDROCHLORIDE [Suspect]
     Active Substance: ONDANSETRON HYDROCHLORIDE
     Dosage: 12 DF, QD
     Route: 042
  1271. ONDANSETRON HYDROCHLORIDE [Suspect]
     Active Substance: ONDANSETRON HYDROCHLORIDE
     Dosage: 12 DF
     Route: 042
  1272. ONDANSETRON HYDROCHLORIDE [Suspect]
     Active Substance: ONDANSETRON HYDROCHLORIDE
     Dosage: 40 MG, TID
     Route: 040
  1273. ONDANSETRON HYDROCHLORIDE [Suspect]
     Active Substance: ONDANSETRON HYDROCHLORIDE
     Dosage: 41 MG, TID
     Route: 040
  1274. ONDANSETRON HYDROCHLORIDE [Suspect]
     Active Substance: ONDANSETRON HYDROCHLORIDE
     Dosage: 41 MG, TID
     Route: 040
  1275. ONDANSETRON HYDROCHLORIDE [Suspect]
     Active Substance: ONDANSETRON HYDROCHLORIDE
     Dosage: 41.4 MG, TID
     Route: 040
  1276. ONDANSETRON HYDROCHLORIDE [Suspect]
     Active Substance: ONDANSETRON HYDROCHLORIDE
     Dosage: 14 MG, Q8H
     Route: 065
  1277. ONDANSETRON HYDROCHLORIDE [Suspect]
     Active Substance: ONDANSETRON HYDROCHLORIDE
     Dosage: 14.14 MG, Q8H
     Route: 065
  1278. ONDANSETRON HYDROCHLORIDE [Suspect]
     Active Substance: ONDANSETRON HYDROCHLORIDE
     Dosage: 14.14 MG
     Route: 042
  1279. ONDANSETRON HYDROCHLORIDE [Suspect]
     Active Substance: ONDANSETRON HYDROCHLORIDE
     Dosage: 24 MG, QD
     Route: 040
  1280. ONDANSETRON HYDROCHLORIDE [Suspect]
     Active Substance: ONDANSETRON HYDROCHLORIDE
     Dosage: 24 MG, QD
     Route: 042
  1281. ONDANSETRON HYDROCHLORIDE [Suspect]
     Active Substance: ONDANSETRON HYDROCHLORIDE
     Dosage: 8 MG, TID
     Route: 040
  1282. ONDANSETRON HYDROCHLORIDE [Suspect]
     Active Substance: ONDANSETRON HYDROCHLORIDE
     Dosage: 24 MG, Q8H
     Route: 042
  1283. ONDANSETRON HYDROCHLORIDE [Suspect]
     Active Substance: ONDANSETRON HYDROCHLORIDE
     Dosage: 24 MG, Q8H
     Route: 065
  1284. ONDANSETRON HYDROCHLORIDE [Suspect]
     Active Substance: ONDANSETRON HYDROCHLORIDE
     Dosage: 24 MG, Q8H
     Route: 065
  1285. ONDANSETRON HYDROCHLORIDE [Suspect]
     Active Substance: ONDANSETRON HYDROCHLORIDE
     Indication: Nausea
     Dosage: 24 MG, TID
     Route: 042
  1286. ONDANSETRON HYDROCHLORIDE [Suspect]
     Active Substance: ONDANSETRON HYDROCHLORIDE
     Dosage: 24 MG, TID
     Route: 042
  1287. ONDANSETRON HYDROCHLORIDE [Suspect]
     Active Substance: ONDANSETRON HYDROCHLORIDE
     Dosage: 12 MG, TID
     Route: 040
  1288. ONDANSETRON HYDROCHLORIDE [Suspect]
     Active Substance: ONDANSETRON HYDROCHLORIDE
     Dosage: 12 MG, TID
     Route: 040
  1289. ONDANSETRON HYDROCHLORIDE [Suspect]
     Active Substance: ONDANSETRON HYDROCHLORIDE
     Dosage: 12 MG, TID
     Route: 040
  1290. ONDANSETRON HYDROCHLORIDE [Suspect]
     Active Substance: ONDANSETRON HYDROCHLORIDE
     Dosage: 12 MG, TID
     Route: 040
  1291. ONDANSETRON HYDROCHLORIDE [Suspect]
     Active Substance: ONDANSETRON HYDROCHLORIDE
     Dosage: 36 MG, Q8H
     Route: 042
  1292. ONDANSETRON HYDROCHLORIDE [Suspect]
     Active Substance: ONDANSETRON HYDROCHLORIDE
     Dosage: 36 MG, Q8H
     Route: 040
  1293. ONDANSETRON HYDROCHLORIDE [Suspect]
     Active Substance: ONDANSETRON HYDROCHLORIDE
     Indication: Off label use
     Dosage: 36 MG, TID
     Route: 042
  1294. ONDANSETRON HYDROCHLORIDE [Suspect]
     Active Substance: ONDANSETRON HYDROCHLORIDE
     Dosage: 4 MG, QD
     Route: 040
  1295. ONDANSETRON HYDROCHLORIDE [Suspect]
     Active Substance: ONDANSETRON HYDROCHLORIDE
     Dosage: 4 MG, QD
     Route: 042
  1296. ONDANSETRON HYDROCHLORIDE [Suspect]
     Active Substance: ONDANSETRON HYDROCHLORIDE
     Dosage: 4 MG, Q8H
     Route: 042
  1297. ONDANSETRON HYDROCHLORIDE [Suspect]
     Active Substance: ONDANSETRON HYDROCHLORIDE
     Dosage: 4 MG, Q8H
     Route: 042
  1298. ONDANSETRON HYDROCHLORIDE [Suspect]
     Active Substance: ONDANSETRON HYDROCHLORIDE
     Dosage: 4 MG, Q8H
     Route: 040
  1299. ONDANSETRON HYDROCHLORIDE [Suspect]
     Active Substance: ONDANSETRON HYDROCHLORIDE
     Dosage: 4 MG, Q8H
     Route: 040
  1300. ONDANSETRON HYDROCHLORIDE [Suspect]
     Active Substance: ONDANSETRON HYDROCHLORIDE
     Dosage: 4 MG, Q8H
     Route: 065
  1301. ONDANSETRON HYDROCHLORIDE [Suspect]
     Active Substance: ONDANSETRON HYDROCHLORIDE
     Dosage: 4 MG, TID
     Route: 042
  1302. ONDANSETRON HYDROCHLORIDE [Suspect]
     Active Substance: ONDANSETRON HYDROCHLORIDE
     Dosage: 4 MG
     Route: 065
  1303. ONDANSETRON HYDROCHLORIDE [Suspect]
     Active Substance: ONDANSETRON HYDROCHLORIDE
     Dosage: 40 MG, QD
     Route: 065
  1304. ONDANSETRON HYDROCHLORIDE [Suspect]
     Active Substance: ONDANSETRON HYDROCHLORIDE
     Dosage: 40 MG, Q8H
     Route: 042
  1305. ONDANSETRON HYDROCHLORIDE [Suspect]
     Active Substance: ONDANSETRON HYDROCHLORIDE
     Dosage: 40 MG, Q8H
     Route: 042
  1306. ONDANSETRON HYDROCHLORIDE [Suspect]
     Active Substance: ONDANSETRON HYDROCHLORIDE
     Dosage: 40 MG, Q8H
     Route: 040
  1307. ONDANSETRON HYDROCHLORIDE [Suspect]
     Active Substance: ONDANSETRON HYDROCHLORIDE
     Dosage: 40 MG, Q8H
     Route: 065
  1308. ONDANSETRON HYDROCHLORIDE [Suspect]
     Active Substance: ONDANSETRON HYDROCHLORIDE
     Dosage: 40 MG, Q8H
     Route: 065
  1309. ONDANSETRON HYDROCHLORIDE [Suspect]
     Active Substance: ONDANSETRON HYDROCHLORIDE
     Dosage: 40 MG, TID
     Route: 042
  1310. ONDANSETRON HYDROCHLORIDE [Suspect]
     Active Substance: ONDANSETRON HYDROCHLORIDE
     Dosage: 41 MG, TID
     Route: 042
  1311. ONDANSETRON HYDROCHLORIDE [Suspect]
     Active Substance: ONDANSETRON HYDROCHLORIDE
     Dosage: 41 MG, TID
     Route: 042
  1312. ONDANSETRON HYDROCHLORIDE [Suspect]
     Active Substance: ONDANSETRON HYDROCHLORIDE
     Dosage: 41 MG
     Route: 040
  1313. ONDANSETRON HYDROCHLORIDE [Suspect]
     Active Substance: ONDANSETRON HYDROCHLORIDE
     Dosage: 41 MG
     Route: 040
  1314. ONDANSETRON HYDROCHLORIDE [Suspect]
     Active Substance: ONDANSETRON HYDROCHLORIDE
     Dosage: 41 MG
     Route: 040
  1315. ONDANSETRON HYDROCHLORIDE [Suspect]
     Active Substance: ONDANSETRON HYDROCHLORIDE
     Dosage: 41 MG
     Route: 040
  1316. ONDANSETRON HYDROCHLORIDE [Suspect]
     Active Substance: ONDANSETRON HYDROCHLORIDE
     Dosage: 41 MG
     Route: 042
  1317. ONDANSETRON HYDROCHLORIDE [Suspect]
     Active Substance: ONDANSETRON HYDROCHLORIDE
     Dosage: 41 MG
     Route: 042
  1318. ONDANSETRON HYDROCHLORIDE [Suspect]
     Active Substance: ONDANSETRON HYDROCHLORIDE
     Dosage: 41 MG
     Route: 042
  1319. ONDANSETRON HYDROCHLORIDE [Suspect]
     Active Substance: ONDANSETRON HYDROCHLORIDE
     Dosage: 41 MG
     Route: 042
  1320. ONDANSETRON HYDROCHLORIDE [Suspect]
     Active Substance: ONDANSETRON HYDROCHLORIDE
     Dosage: 41.14 MG, Q8H
     Route: 042
  1321. ONDANSETRON HYDROCHLORIDE [Suspect]
     Active Substance: ONDANSETRON HYDROCHLORIDE
     Dosage: 41.14 MG, Q8H
     Route: 065
  1322. ONDANSETRON HYDROCHLORIDE [Suspect]
     Active Substance: ONDANSETRON HYDROCHLORIDE
     Dosage: 41.4 MG, Q8H
     Route: 042
  1323. ONDANSETRON HYDROCHLORIDE [Suspect]
     Active Substance: ONDANSETRON HYDROCHLORIDE
     Dosage: 41.4 MG, Q8H
     Route: 042
  1324. ONDANSETRON HYDROCHLORIDE [Suspect]
     Active Substance: ONDANSETRON HYDROCHLORIDE
     Dosage: 41.4 MG, Q8H
     Route: 042
  1325. ONDANSETRON HYDROCHLORIDE [Suspect]
     Active Substance: ONDANSETRON HYDROCHLORIDE
     Dosage: 41.4 MG, Q8H
     Route: 040
  1326. ONDANSETRON HYDROCHLORIDE [Suspect]
     Active Substance: ONDANSETRON HYDROCHLORIDE
     Dosage: 41.4 MG, TID
     Route: 042
  1327. ONDANSETRON HYDROCHLORIDE [Suspect]
     Active Substance: ONDANSETRON HYDROCHLORIDE
     Dosage: 24 MG, TID
     Route: 040
  1328. ONDANSETRON HYDROCHLORIDE [Suspect]
     Active Substance: ONDANSETRON HYDROCHLORIDE
     Dosage: 24 MG, TID
     Route: 040
  1329. ONDANSETRON HYDROCHLORIDE [Suspect]
     Active Substance: ONDANSETRON HYDROCHLORIDE
     Dosage: 8 MG, Q8H
     Route: 065
  1330. ONDANSETRON HYDROCHLORIDE [Suspect]
     Active Substance: ONDANSETRON HYDROCHLORIDE
     Dosage: 8 MG, Q8H
     Route: 042
  1331. ONDANSETRON HYDROCHLORIDE [Suspect]
     Active Substance: ONDANSETRON HYDROCHLORIDE
     Dosage: 8 MG, Q8H
     Route: 040
  1332. ONDANSETRON HYDROCHLORIDE [Suspect]
     Active Substance: ONDANSETRON HYDROCHLORIDE
     Dosage: 8 MG, TID
     Route: 042
  1333. ONDANSETRON HYDROCHLORIDE [Suspect]
     Active Substance: ONDANSETRON HYDROCHLORIDE
     Dosage: UNK, TID
     Route: 040
  1334. ONDANSETRON HYDROCHLORIDE [Suspect]
     Active Substance: ONDANSETRON HYDROCHLORIDE
     Dosage: 36 UNK, Q8H
     Route: 042
  1335. ONDANSETRON HYDROCHLORIDE [Suspect]
     Active Substance: ONDANSETRON HYDROCHLORIDE
     Dosage: UNK, TID
     Route: 042
  1336. ONDANSETRON HYDROCHLORIDE [Suspect]
     Active Substance: ONDANSETRON HYDROCHLORIDE
     Dosage: UNK
     Route: 040
  1337. ONDANSETRON HYDROCHLORIDE [Suspect]
     Active Substance: ONDANSETRON HYDROCHLORIDE
     Dosage: UNK
     Route: 040
  1338. ONDANSETRON HYDROCHLORIDE [Suspect]
     Active Substance: ONDANSETRON HYDROCHLORIDE
     Dosage: UNK
     Route: 042
  1339. OSELTAMIVIR [Suspect]
     Active Substance: OSELTAMIVIR
     Indication: Product used for unknown indication
     Dosage: 133 ML
     Route: 054
  1340. OSELTAMIVIR PHOSPHATE [Suspect]
     Active Substance: OSELTAMIVIR PHOSPHATE
     Dosage: 12.5 MG
     Route: 040
  1341. OSELTAMIVIR PHOSPHATE [Suspect]
     Active Substance: OSELTAMIVIR PHOSPHATE
     Dosage: 12.5 MG
     Route: 042
  1342. OSELTAMIVIR PHOSPHATE [Suspect]
     Active Substance: OSELTAMIVIR PHOSPHATE
     Dosage: 12.5 MG
     Route: 065
  1343. OSELTAMIVIR PHOSPHATE [Suspect]
     Active Substance: OSELTAMIVIR PHOSPHATE
     Dosage: 12.5 ML
     Route: 042
  1344. OSELTAMIVIR PHOSPHATE [Suspect]
     Active Substance: OSELTAMIVIR PHOSPHATE
     Indication: Chronic obstructive pulmonary disease
     Dosage: 133 ML
     Route: 054
  1345. OSELTAMIVIR PHOSPHATE [Suspect]
     Active Substance: OSELTAMIVIR PHOSPHATE
     Dosage: UNK
     Route: 054
  1346. OSELTAMIVIR PHOSPHATE [Suspect]
     Active Substance: OSELTAMIVIR PHOSPHATE
     Dosage: UNK
     Route: 065
  1347. OSELTAMIVIR PHOSPHATE [Suspect]
     Active Substance: OSELTAMIVIR PHOSPHATE
     Dosage: UNK
     Route: 065
  1348. OSMITROL [Suspect]
     Active Substance: MANNITOL
     Indication: Nutritional supplementation
     Dosage: 12.5 G
     Route: 042
  1349. OTRIVIN [Suspect]
     Active Substance: XYLOMETAZOLINE
     Dosage: 1 DOSAGE FORM, QD
     Route: 065
  1350. OTRIVIN [Suspect]
     Active Substance: XYLOMETAZOLINE
     Dosage: UNK
     Route: 050
  1351. OTRIVIN [Suspect]
     Active Substance: XYLOMETAZOLINE
     Indication: Dyspnoea
     Dosage: UNK
     Route: 055
  1352. OTRIVIN [Suspect]
     Active Substance: XYLOMETAZOLINE
     Dosage: UNK
     Route: 065
  1353. ASIAN GINSENG [Suspect]
     Active Substance: ASIAN GINSENG
     Dosage: UNK
     Route: 042
  1354. ASIAN GINSENG [Suspect]
     Active Substance: ASIAN GINSENG
     Dosage: UNK
     Route: 042
  1355. ASIAN GINSENG [Suspect]
     Active Substance: ASIAN GINSENG
     Dosage: UNK
     Route: 042
  1356. ASIAN GINSENG [Suspect]
     Active Substance: ASIAN GINSENG
     Dosage: 12.5 MG
     Route: 042
  1357. ASIAN GINSENG [Suspect]
     Active Substance: ASIAN GINSENG
     Dosage: 12.5 MG
     Route: 065
  1358. ASIAN GINSENG [Suspect]
     Active Substance: ASIAN GINSENG
     Indication: Nutritional supplementation
     Dosage: UNK
     Route: 065
  1359. HERBALS\PAULLINIA CUPANA SEED [Suspect]
     Active Substance: HERBALS\PAULLINIA CUPANA SEED
     Indication: Nutritional supplementation
     Dosage: 12.5 MG
     Route: 042
  1360. HERBALS\PAULLINIA CUPANA SEED [Suspect]
     Active Substance: HERBALS\PAULLINIA CUPANA SEED
     Dosage: 12.5 MG
     Route: 042
  1361. HERBALS\PAULLINIA CUPANA SEED [Suspect]
     Active Substance: HERBALS\PAULLINIA CUPANA SEED
     Dosage: 17 MG
     Route: 048
  1362. HERBALS\PAULLINIA CUPANA SEED [Suspect]
     Active Substance: HERBALS\PAULLINIA CUPANA SEED
     Indication: Vitamin supplementation
     Dosage: 5 MG
     Route: 042
  1363. HERBALS\PAULLINIA CUPANA SEED [Suspect]
     Active Substance: HERBALS\PAULLINIA CUPANA SEED
     Dosage: UNK
     Route: 042
  1364. POLYETHYLENE GLYCOL 3350 [Suspect]
     Active Substance: POLYETHYLENE GLYCOL 3350
     Indication: Product used for unknown indication
     Dosage: UNK, QD
     Route: 048
  1365. POLYETHYLENE GLYCOL 3350 [Suspect]
     Active Substance: POLYETHYLENE GLYCOL 3350
     Indication: Constipation
  1366. POLYETHYLENE GLYCOL 3350 [Suspect]
     Active Substance: POLYETHYLENE GLYCOL 3350
     Indication: Off label use
  1367. PENICILLIN V POTASSIUM [Suspect]
     Active Substance: PENICILLIN V POTASSIUM
     Indication: Product used for unknown indication
     Dosage: UNK
     Route: 065
  1368. PHENOXYETHANOL [Suspect]
     Active Substance: PHENOXYETHANOL
     Indication: Constipation
     Dosage: 17 G, QD
     Route: 065
  1369. PHENOXYETHANOL [Suspect]
     Active Substance: PHENOXYETHANOL
     Dosage: UNK
     Route: 065
  1370. PHYTONADIONE [Suspect]
     Active Substance: PHYTONADIONE
     Indication: Vitamin supplementation
     Dosage: 5 MG
     Route: 017
  1371. PHYTONADIONE [Suspect]
     Active Substance: PHYTONADIONE
     Indication: Off label use
  1372. PHYTONADIONE [Suspect]
     Active Substance: PHYTONADIONE
     Dosage: 5 MG, QD
     Route: 017
  1373. PHYTONADIONE [Suspect]
     Active Substance: PHYTONADIONE
     Dosage: 5 MG, QD
     Route: 040
  1374. PHYTONADIONE [Suspect]
     Active Substance: PHYTONADIONE
     Dosage: 5 MG, QD
     Route: 040
  1375. PHYTONADIONE [Suspect]
     Active Substance: PHYTONADIONE
     Dosage: 5 MG, QD
     Route: 042
  1376. PHYTONADIONE [Suspect]
     Active Substance: PHYTONADIONE
     Dosage: 5 MG, QD
     Route: 042
  1377. PHYTONADIONE [Suspect]
     Active Substance: PHYTONADIONE
     Dosage: 5 MG, QD
     Route: 042
  1378. PHYTONADIONE [Suspect]
     Active Substance: PHYTONADIONE
     Dosage: 5 MG
     Route: 017
  1379. PHYTONADIONE [Suspect]
     Active Substance: PHYTONADIONE
     Indication: Vitamin supplementation
     Dosage: 5 MG
     Route: 042
  1380. PHYTONADIONE [Suspect]
     Active Substance: PHYTONADIONE
     Dosage: 5 MG
     Route: 042
  1381. PHYTONADIONE [Suspect]
     Active Substance: PHYTONADIONE
     Dosage: 5 MG
     Route: 042
  1382. PHYTONADIONE [Suspect]
     Active Substance: PHYTONADIONE
     Dosage: 5 MG
     Route: 065
  1383. PHYTONADIONE [Suspect]
     Active Substance: PHYTONADIONE
     Dosage: 5 MG
     Route: 065
  1384. PHYTONADIONE [Suspect]
     Active Substance: PHYTONADIONE
     Indication: Off label use
     Dosage: 5 MG, PRN
     Route: 042
  1385. PHYTONADIONE [Suspect]
     Active Substance: PHYTONADIONE
     Dosage: 5 MG, PRN (AS REQUIRED)
     Route: 017
  1386. PHYTONADIONE [Suspect]
     Active Substance: PHYTONADIONE
     Dosage: 5 MG, PRN (AS REQUIRED)
     Route: 017
  1387. PHYTONADIONE [Suspect]
     Active Substance: PHYTONADIONE
     Dosage: 5 MG, PRN (AS REQUIRED)
     Route: 017
  1388. PHYTONADIONE [Suspect]
     Active Substance: PHYTONADIONE
     Dosage: 5 MG, PRN (AS REQUIRED)
     Route: 042
  1389. PHYTONADIONE [Suspect]
     Active Substance: PHYTONADIONE
     Dosage: 5 MG, PRN
     Route: 017
  1390. PHYTONADIONE [Suspect]
     Active Substance: PHYTONADIONE
     Dosage: UNK UNK, QD
     Route: 042
  1391. PHYTONADIONE [Suspect]
     Active Substance: PHYTONADIONE
     Dosage: UNK, QD (1 EVERY 1 DAYS)
     Route: 017
  1392. PHYTONADIONE [Suspect]
     Active Substance: PHYTONADIONE
     Dosage: UNK, QD
     Route: 017
  1393. PHYTONADIONE [Suspect]
     Active Substance: PHYTONADIONE
     Dosage: UNK
     Route: 042
  1394. PHYTONADIONE [Suspect]
     Active Substance: PHYTONADIONE
     Dosage: UNK
     Route: 042
  1395. PHYTONADIONE [Suspect]
     Active Substance: PHYTONADIONE
     Dosage: UNK
     Route: 065
  1396. PHYTONADIONE [Suspect]
     Active Substance: PHYTONADIONE
     Dosage: UNK
     Route: 065
  1397. PHYTONADIONE [Suspect]
     Active Substance: PHYTONADIONE
     Dosage: UNK
     Route: 065
  1398. PHYTONADIONE [Suspect]
     Active Substance: PHYTONADIONE
     Dosage: UNK
     Route: 065
  1399. NATAMYCIN [Suspect]
     Active Substance: NATAMYCIN
     Indication: Bacterial infection
     Dosage: UNK MG
     Route: 065
  1400. POLYETHYLENE GLYCOL 4000 [Suspect]
     Active Substance: POLYETHYLENE GLYCOL 4000
     Dosage: 17 G, QD (1 EVERY 1 DAYS)
     Route: 048
  1401. POLYETHYLENE GLYCOL 4000 [Suspect]
     Active Substance: POLYETHYLENE GLYCOL 4000
     Dosage: 17 G
     Route: 048
  1402. POLYETHYLENE GLYCOL 4000 [Suspect]
     Active Substance: POLYETHYLENE GLYCOL 4000
     Indication: Constipation
     Dosage: 17 MG, QD
     Route: 048
  1403. POLYETHYLENE GLYCOL 4000 [Suspect]
     Active Substance: POLYETHYLENE GLYCOL 4000
     Indication: Diabetes mellitus
     Dosage: 17 MG
     Route: 042
  1404. POLYETHYLENE GLYCOL 4000 [Suspect]
     Active Substance: POLYETHYLENE GLYCOL 4000
     Indication: Dyspnoea
     Dosage: 17 MG
     Route: 048
  1405. POLYETHYLENE GLYCOL 4000 [Suspect]
     Active Substance: POLYETHYLENE GLYCOL 4000
     Indication: Thrombosis
     Dosage: 5 MG
     Route: 065
  1406. POLYETHYLENE GLYCOL 4000 [Suspect]
     Active Substance: POLYETHYLENE GLYCOL 4000
     Dosage: UNK
     Route: 048
  1407. POTASSIUM CHLORIDE [Suspect]
     Active Substance: POTASSIUM CHLORIDE
     Indication: Constipation
     Dosage: 17 G, QD (SOLUTION FOR INJECTION)
     Route: 048
  1408. POTASSIUM CHLORIDE [Suspect]
     Active Substance: POTASSIUM CHLORIDE
     Dosage: 17 G, QD
     Route: 048
  1409. POTASSIUM CHLORIDE [Suspect]
     Active Substance: POTASSIUM CHLORIDE
     Dosage: 17 G
     Route: 048
  1410. POTASSIUM CHLORIDE [Suspect]
     Active Substance: POTASSIUM CHLORIDE
     Indication: Iron deficiency
     Dosage: 17 MG, QD
     Route: 048
  1411. POTASSIUM CHLORIDE [Suspect]
     Active Substance: POTASSIUM CHLORIDE
     Dosage: 17 MG
     Route: 048
  1412. POTASSIUM CHLORIDE [Suspect]
     Active Substance: POTASSIUM CHLORIDE
     Dosage: 17 MG
     Route: 048
  1413. POTASSIUM CHLORIDE [Suspect]
     Active Substance: POTASSIUM CHLORIDE
     Dosage: 17 MG
     Route: 065
  1414. POTASSIUM CHLORIDE [Suspect]
     Active Substance: POTASSIUM CHLORIDE
     Dosage: 3 MG, QW
     Route: 048
  1415. POTASSIUM CHLORIDE [Suspect]
     Active Substance: POTASSIUM CHLORIDE
     Dosage: 3 MG, QW
     Route: 065
  1416. POTASSIUM CHLORIDE [Suspect]
     Active Substance: POTASSIUM CHLORIDE
     Dosage: UNK, QD
     Route: 065
  1417. POTASSIUM CHLORIDE [Suspect]
     Active Substance: POTASSIUM CHLORIDE
     Dosage: 1 UNK, Q6H
     Route: 065
  1418. POTASSIUM CHLORIDE [Suspect]
     Active Substance: POTASSIUM CHLORIDE
     Dosage: 2.5 UNK
     Route: 042
  1419. POTASSIUM CHLORIDE [Suspect]
     Active Substance: POTASSIUM CHLORIDE
     Dosage: UNK
     Route: 048
  1420. POTASSIUM CHLORIDE [Suspect]
     Active Substance: POTASSIUM CHLORIDE
     Dosage: UNK
     Route: 065
  1421. POTASSIUM CHLORIDE [Suspect]
     Active Substance: POTASSIUM CHLORIDE
     Dosage: UNK
     Route: 065
  1422. POTASSIUM CHLORIDE [Suspect]
     Active Substance: POTASSIUM CHLORIDE
     Dosage: UNK
     Route: 065
  1423. POTASSIUM CHLORIDE [Suspect]
     Active Substance: POTASSIUM CHLORIDE
     Dosage: UNK
     Route: 065
  1424. POTASSIUM CHLORIDE [Suspect]
     Active Substance: POTASSIUM CHLORIDE
     Dosage: UNK
     Route: 065
  1425. POTASSIUM CHLORIDE [Suspect]
     Active Substance: POTASSIUM CHLORIDE
     Dosage: UNK
     Route: 065
  1426. PREVACID [Suspect]
     Active Substance: LANSOPRAZOLE
     Dosage: 3 MG
     Route: 048
  1427. PREVACID [Suspect]
     Active Substance: LANSOPRAZOLE
     Dosage: 3 MG
     Route: 048
  1428. PREVACID [Suspect]
     Active Substance: LANSOPRAZOLE
     Dosage: 3 MG
     Route: 048
  1429. PREVACID [Suspect]
     Active Substance: LANSOPRAZOLE
     Indication: Antacid therapy
     Dosage: 30 MG (CAPSULES)
     Route: 048
  1430. PREVACID [Suspect]
     Active Substance: LANSOPRAZOLE
     Dosage: 30 MG, QD
     Route: 048
  1431. PREVACID [Suspect]
     Active Substance: LANSOPRAZOLE
     Indication: Intentional product misuse
     Dosage: 30 MG, QD
     Route: 065
  1432. PREVACID [Suspect]
     Active Substance: LANSOPRAZOLE
     Indication: Off label use
     Dosage: 30 MG, QD
     Route: 065
  1433. PREVACID [Suspect]
     Active Substance: LANSOPRAZOLE
     Dosage: 30 MG
     Route: 048
  1434. PREVACID [Suspect]
     Active Substance: LANSOPRAZOLE
     Dosage: 30 MG
     Route: 065
  1435. PREVACID [Suspect]
     Active Substance: LANSOPRAZOLE
     Dosage: UNK
     Route: 065
  1436. PROPYLENE GLYCOL [Suspect]
     Active Substance: PROPYLENE GLYCOL
     Indication: Product used for unknown indication
     Dosage: UNK
     Route: 065
  1437. PYRIDOXINE HYDROCHLORIDE [Suspect]
     Active Substance: PYRIDOXINE HYDROCHLORIDE
     Dosage: 1 DOSAGE FORM
     Route: 048
  1438. PYRIDOXINE HYDROCHLORIDE [Suspect]
     Active Substance: PYRIDOXINE HYDROCHLORIDE
     Dosage: 10 MG, QD
     Route: 048
  1439. PYRIDOXINE HYDROCHLORIDE [Suspect]
     Active Substance: PYRIDOXINE HYDROCHLORIDE
     Dosage: 10 MG, QD
     Route: 048
  1440. PYRIDOXINE HYDROCHLORIDE [Suspect]
     Active Substance: PYRIDOXINE HYDROCHLORIDE
     Dosage: 10 MG, QD
     Route: 065
  1441. PYRIDOXINE HYDROCHLORIDE [Suspect]
     Active Substance: PYRIDOXINE HYDROCHLORIDE
     Dosage: 10 MG
     Route: 048
  1442. PYRIDOXINE HYDROCHLORIDE [Suspect]
     Active Substance: PYRIDOXINE HYDROCHLORIDE
     Indication: Analgesic therapy
     Dosage: 1 IU, QD
     Route: 048
  1443. PYRIDOXINE HYDROCHLORIDE [Suspect]
     Active Substance: PYRIDOXINE HYDROCHLORIDE
     Dosage: 4 IU, QD
     Route: 048
  1444. PYRIDOXINE HYDROCHLORIDE [Suspect]
     Active Substance: PYRIDOXINE HYDROCHLORIDE
     Indication: Constipation
     Dosage: UNK, QD
     Route: 048
  1445. PYRIDOXINE HYDROCHLORIDE [Suspect]
     Active Substance: PYRIDOXINE HYDROCHLORIDE
     Dosage: 4 IU, Q6H
     Route: 065
  1446. PYRIDOXINE HYDROCHLORIDE [Suspect]
     Active Substance: PYRIDOXINE HYDROCHLORIDE
     Dosage: UNK, QID
     Route: 048
  1447. PYRIDOXINE HYDROCHLORIDE [Suspect]
     Active Substance: PYRIDOXINE HYDROCHLORIDE
     Dosage: UNK, QID
     Route: 048
  1448. PYRIDOXINE HYDROCHLORIDE [Suspect]
     Active Substance: PYRIDOXINE HYDROCHLORIDE
     Dosage: UNK, QID
     Route: 048
  1449. PYRIDOXINE HYDROCHLORIDE [Suspect]
     Active Substance: PYRIDOXINE HYDROCHLORIDE
     Dosage: UNK, QID
     Route: 048
  1450. PYRIDOXINE HYDROCHLORIDE [Suspect]
     Active Substance: PYRIDOXINE HYDROCHLORIDE
     Dosage: UNK, QID
     Route: 048
  1451. PYRIDOXINE HYDROCHLORIDE [Suspect]
     Active Substance: PYRIDOXINE HYDROCHLORIDE
     Dosage: UNK, QID
     Route: 065
  1452. PYRIDOXINE HYDROCHLORIDE [Suspect]
     Active Substance: PYRIDOXINE HYDROCHLORIDE
     Dosage: UNK, QID
     Route: 065
  1453. PYRIDOXINE HYDROCHLORIDE [Suspect]
     Active Substance: PYRIDOXINE HYDROCHLORIDE
     Indication: Off label use
     Dosage: UNK
     Route: 048
  1454. PYRIDOXINE HYDROCHLORIDE [Suspect]
     Active Substance: PYRIDOXINE HYDROCHLORIDE
     Indication: Vitamin supplementation
     Dosage: UNK
     Route: 048
  1455. PYRIDOXINE HYDROCHLORIDE [Suspect]
     Active Substance: PYRIDOXINE HYDROCHLORIDE
     Dosage: UNK
     Route: 048
  1456. RAMIPRIL [Suspect]
     Active Substance: RAMIPRIL
     Indication: Product used for unknown indication
     Dosage: UNK
     Route: 065
  1457. ISOPROPYL MYRISTATE [Suspect]
     Active Substance: ISOPROPYL MYRISTATE
     Indication: Constipation
     Route: 065
  1458. VITAMIN A PALMITATE [Suspect]
     Active Substance: VITAMIN A PALMITATE
     Indication: Constipation
     Dosage: 17 G, QD
     Route: 065
  1459. SODIUM BICARBONATE [Suspect]
     Active Substance: SODIUM BICARBONATE
     Dosage: 12.5 G, QD
     Route: 042
  1460. SODIUM BICARBONATE [Suspect]
     Active Substance: SODIUM BICARBONATE
     Indication: Nutritional supplementation
     Dosage: UNK
     Route: 065
  1461. ALBUTEROL [Suspect]
     Active Substance: ALBUTEROL
     Dosage: 1 DOSAGE FORM, Q6H
     Route: 055
  1462. ALBUTEROL [Suspect]
     Active Substance: ALBUTEROL
     Dosage: 1 DOSAGE FORM, Q6H
     Route: 065
  1463. ALBUTEROL [Suspect]
     Active Substance: ALBUTEROL
     Dosage: 1 DOSAGE FORM, Q6H
     Route: 065
  1464. ALBUTEROL [Suspect]
     Active Substance: ALBUTEROL
     Dosage: 1 DOSAGE FORM, Q6H
     Route: 065
  1465. ALBUTEROL [Suspect]
     Active Substance: ALBUTEROL
     Dosage: 1 DOSAGE FORM, QID
     Route: 055
  1466. ALBUTEROL [Suspect]
     Active Substance: ALBUTEROL
     Dosage: 4 DOSAGE FORM, QD
     Route: 055
  1467. ALBUTEROL [Suspect]
     Active Substance: ALBUTEROL
     Dosage: 1 DOSAGE FORM
     Route: 065
  1468. ALBUTEROL [Suspect]
     Active Substance: ALBUTEROL
     Dosage: 1 DOSAGE FORM, QID
     Route: 055
  1469. ALBUTEROL [Suspect]
     Active Substance: ALBUTEROL
     Dosage: 4 DOSAGE FORM
     Route: 065
  1470. ALBUTEROL [Suspect]
     Active Substance: ALBUTEROL
     Dosage: 4 DOSAGE FORM, QD
     Route: 055
  1471. ALBUTEROL [Suspect]
     Active Substance: ALBUTEROL
     Dosage: 4 DOSAGE FORM, QD
     Route: 065
  1472. ALBUTEROL [Suspect]
     Active Substance: ALBUTEROL
     Dosage: 4 DOSAGE FORM, Q6H
     Route: 055
  1473. ALBUTEROL [Suspect]
     Active Substance: ALBUTEROL
     Dosage: 4 DOSAGE FORM, QID
     Route: 055
  1474. ALBUTEROL [Suspect]
     Active Substance: ALBUTEROL
     Dosage: 4 DOSAGE FORM, QID
     Route: 055
  1475. ALBUTEROL [Suspect]
     Active Substance: ALBUTEROL
     Dosage: 4 DOSAGE FORM, QID
     Route: 055
  1476. ALBUTEROL [Suspect]
     Active Substance: ALBUTEROL
     Dosage: 4 DOSAGE FORM, QID
     Route: 055
  1477. ALBUTEROL [Suspect]
     Active Substance: ALBUTEROL
     Dosage: 4 DOSAGE FORM, QID
     Route: 065
  1478. ALBUTEROL [Suspect]
     Active Substance: ALBUTEROL
     Indication: Off label use
     Dosage: UNK, QD
     Route: 055
  1479. ALBUTEROL [Suspect]
     Active Substance: ALBUTEROL
     Indication: Chronic obstructive pulmonary disease
     Dosage: UNK, QD
     Route: 065
  1480. ALBUTEROL [Suspect]
     Active Substance: ALBUTEROL
     Indication: Intentional product misuse
     Dosage: UNK, QD
     Route: 065
  1481. ALBUTEROL [Suspect]
     Active Substance: ALBUTEROL
     Dosage: UNK, QD
     Route: 065
  1482. ALBUTEROL [Suspect]
     Active Substance: ALBUTEROL
     Dosage: UNK, QD
     Route: 065
  1483. ALBUTEROL [Suspect]
     Active Substance: ALBUTEROL
     Dosage: UNK, QD
     Route: 065
  1484. ALBUTEROL [Suspect]
     Active Substance: ALBUTEROL
     Dosage: UNK, QD
     Route: 065
  1485. ALBUTEROL [Suspect]
     Active Substance: ALBUTEROL
     Dosage: UNK, QD
     Route: 065
  1486. ALBUTEROL [Suspect]
     Active Substance: ALBUTEROL
     Dosage: UNK, Q6H
     Route: 050
  1487. ALBUTEROL [Suspect]
     Active Substance: ALBUTEROL
     Dosage: UNK, Q6H
     Route: 055
  1488. ALBUTEROL [Suspect]
     Active Substance: ALBUTEROL
     Dosage: UNK, Q6H
     Route: 065
  1489. ALBUTEROL [Suspect]
     Active Substance: ALBUTEROL
     Dosage: UNK, Q6H
     Route: 065
  1490. ALBUTEROL [Suspect]
     Active Substance: ALBUTEROL
     Dosage: UNK, Q6H
     Route: 065
  1491. ALBUTEROL [Suspect]
     Active Substance: ALBUTEROL
     Dosage: UNK, Q6H
     Route: 065
  1492. ALBUTEROL [Suspect]
     Active Substance: ALBUTEROL
     Dosage: UNK
     Route: 006
  1493. ALBUTEROL [Suspect]
     Active Substance: ALBUTEROL
     Dosage: UNK
     Route: 050
  1494. ALBUTEROL [Suspect]
     Active Substance: ALBUTEROL
     Dosage: UNK
     Route: 055
  1495. ALBUTEROL [Suspect]
     Active Substance: ALBUTEROL
     Dosage: UNK (INTRANASAL)
     Route: 045
  1496. ALBUTEROL SULFATE [Suspect]
     Active Substance: ALBUTEROL SULFATE
     Dosage: 1 DOSAGE FORM, Q6H
     Route: 055
  1497. ALBUTEROL SULFATE [Suspect]
     Active Substance: ALBUTEROL SULFATE
     Dosage: 1 DOSAGE FORM, Q6H
     Route: 065
  1498. ALBUTEROL SULFATE [Suspect]
     Active Substance: ALBUTEROL SULFATE
     Dosage: 1 DOSAGE FORM, Q6H
     Route: 065
  1499. ALBUTEROL SULFATE [Suspect]
     Active Substance: ALBUTEROL SULFATE
     Indication: Chronic obstructive pulmonary disease
     Dosage: 1 DOSAGE FORM, QID
     Route: 055
  1500. ALBUTEROL SULFATE [Suspect]
     Active Substance: ALBUTEROL SULFATE
     Dosage: 1 DOSAGE FORM, QID
     Route: 065
  1501. ALBUTEROL SULFATE [Suspect]
     Active Substance: ALBUTEROL SULFATE
     Dosage: 1 DOSAGE FORM
     Route: 050
  1502. ALBUTEROL SULFATE [Suspect]
     Active Substance: ALBUTEROL SULFATE
     Dosage: 1 DOSAGE FORM
     Route: 055
  1503. ALBUTEROL SULFATE [Suspect]
     Active Substance: ALBUTEROL SULFATE
     Dosage: 1 DOSAGE FORM
     Route: 065
  1504. ALBUTEROL SULFATE [Suspect]
     Active Substance: ALBUTEROL SULFATE
     Dosage: 4 DOSAGE FORM, QD
     Route: 055
  1505. ALBUTEROL SULFATE [Suspect]
     Active Substance: ALBUTEROL SULFATE
     Dosage: 4 DOSAGE FORM, QD
     Route: 055
  1506. ALBUTEROL SULFATE [Suspect]
     Active Substance: ALBUTEROL SULFATE
     Indication: Intentional product misuse
     Dosage: 4 DOSAGE FORM, QD
     Route: 065
  1507. ALBUTEROL SULFATE [Suspect]
     Active Substance: ALBUTEROL SULFATE
     Dosage: 4 DOSAGE FORM, QID
     Route: 055
  1508. ALBUTEROL SULFATE [Suspect]
     Active Substance: ALBUTEROL SULFATE
     Dosage: 4 DOSAGE FORM, QID
     Route: 055
  1509. ALBUTEROL SULFATE [Suspect]
     Active Substance: ALBUTEROL SULFATE
     Dosage: 4 DOSAGE FORM
     Route: 055
  1510. ALBUTEROL SULFATE [Suspect]
     Active Substance: ALBUTEROL SULFATE
     Dosage: 4 DOSAGE FORM
     Route: 065
  1511. ALBUTEROL SULFATE [Suspect]
     Active Substance: ALBUTEROL SULFATE
     Indication: Off label use
     Dosage: UNK UNK, QD
     Route: 050
  1512. ALBUTEROL SULFATE [Suspect]
     Active Substance: ALBUTEROL SULFATE
     Dosage: UNK, QD
     Route: 065
  1513. ALBUTEROL SULFATE [Suspect]
     Active Substance: ALBUTEROL SULFATE
     Dosage: UNK, Q6H
     Route: 050
  1514. ALBUTEROL SULFATE [Suspect]
     Active Substance: ALBUTEROL SULFATE
     Dosage: UNK, Q6H
     Route: 065
  1515. ALBUTEROL SULFATE [Suspect]
     Active Substance: ALBUTEROL SULFATE
     Dosage: UNK, Q6H
     Route: 065
  1516. ALBUTEROL SULFATE [Suspect]
     Active Substance: ALBUTEROL SULFATE
     Dosage: UNK, QID
     Route: 055
  1517. ALBUTEROL SULFATE [Suspect]
     Active Substance: ALBUTEROL SULFATE
     Dosage: UNK, QID
     Route: 065
  1518. ALBUTEROL SULFATE [Suspect]
     Active Substance: ALBUTEROL SULFATE
     Dosage: UNK, QID
     Route: 055
  1519. ALBUTEROL SULFATE [Suspect]
     Active Substance: ALBUTEROL SULFATE
     Dosage: UNK
     Route: 050
  1520. ALBUTEROL SULFATE [Suspect]
     Active Substance: ALBUTEROL SULFATE
     Dosage: UNK
     Route: 055
  1521. ALBUTEROL SULFATE [Suspect]
     Active Substance: ALBUTEROL SULFATE
     Dosage: UNK
     Route: 055
  1522. ALBUTEROL SULFATE [Suspect]
     Active Substance: ALBUTEROL SULFATE
     Dosage: UNK
     Route: 055
  1523. ALBUTEROL SULFATE [Suspect]
     Active Substance: ALBUTEROL SULFATE
     Dosage: UNK
     Route: 055
  1524. ALBUTEROL SULFATE [Suspect]
     Active Substance: ALBUTEROL SULFATE
     Dosage: UNK
     Route: 065
  1525. ALBUTEROL SULFATE [Suspect]
     Active Substance: ALBUTEROL SULFATE
     Dosage: UNK
     Route: 065
  1526. HERBALS [Suspect]
     Active Substance: HERBALS
     Indication: Product used for unknown indication
     Route: 065
  1527. SIMVASTATIN [Suspect]
     Active Substance: SIMVASTATIN
     Indication: Blood cholesterol increased
     Dosage: 40 MG, QD
     Route: 048
  1528. SIMVASTATIN [Suspect]
     Active Substance: SIMVASTATIN
     Indication: Vitamin supplementation
     Dosage: 40 MG, QD
     Route: 048
  1529. SIMVASTATIN [Suspect]
     Active Substance: SIMVASTATIN
     Indication: Off label use
     Dosage: 40 MG
     Route: 048
  1530. SIMVASTATIN [Suspect]
     Active Substance: SIMVASTATIN
     Dosage: UNK
     Route: 048
  1531. SIMVASTATIN [Suspect]
     Active Substance: SIMVASTATIN
     Indication: Intentional product misuse
     Dosage: UNK
     Route: 065
  1532. SIMVASTATIN [Suspect]
     Active Substance: SIMVASTATIN
     Dosage: UNK
     Route: 065
  1533. SIMVASTATIN [Suspect]
     Active Substance: SIMVASTATIN
     Dosage: UNK
     Route: 065
  1534. SIMVASTATIN [Suspect]
     Active Substance: SIMVASTATIN
     Dosage: UNK
     Route: 065
  1535. SIMVASTATIN [Suspect]
     Active Substance: SIMVASTATIN
     Dosage: UNK
     Route: 065
  1536. SIMVASTATIN [Suspect]
     Active Substance: SIMVASTATIN
     Dosage: UNK
     Route: 065
  1537. SIMVASTATIN [Suspect]
     Active Substance: SIMVASTATIN
     Dosage: UNK
     Route: 065
  1538. SODIUM FERRIC GLUCONATE COMPLEX [Suspect]
     Active Substance: SODIUM FERRIC GLUCONATE COMPLEX
     Dosage: 1.25 MG, QW (1 EVERY 1 WEEKS)
     Route: 042
  1539. SODIUM FERRIC GLUCONATE COMPLEX [Suspect]
     Active Substance: SODIUM FERRIC GLUCONATE COMPLEX
     Dosage: 1.25 ML, QW
     Route: 042
  1540. SODIUM FERRIC GLUCONATE COMPLEX [Suspect]
     Active Substance: SODIUM FERRIC GLUCONATE COMPLEX
     Dosage: 125.0 MG, QMO
     Route: 042
  1541. SODIUM FERRIC GLUCONATE COMPLEX [Suspect]
     Active Substance: SODIUM FERRIC GLUCONATE COMPLEX
     Dosage: 125 MG, QW
     Route: 042
  1542. SODIUM FERRIC GLUCONATE COMPLEX [Suspect]
     Active Substance: SODIUM FERRIC GLUCONATE COMPLEX
     Dosage: 125 MG
     Route: 042
  1543. SODIUM FERRIC GLUCONATE COMPLEX [Suspect]
     Active Substance: SODIUM FERRIC GLUCONATE COMPLEX
     Dosage: 125 MG, QD (1 EVERY 1 DAYS)
     Route: 042
  1544. SODIUM FERRIC GLUCONATE COMPLEX [Suspect]
     Active Substance: SODIUM FERRIC GLUCONATE COMPLEX
     Dosage: 125 MG, Q4W
     Route: 040
  1545. SODIUM FERRIC GLUCONATE COMPLEX [Suspect]
     Active Substance: SODIUM FERRIC GLUCONATE COMPLEX
     Dosage: 125 MG, Q4W
     Route: 042
  1546. SODIUM FERRIC GLUCONATE COMPLEX [Suspect]
     Active Substance: SODIUM FERRIC GLUCONATE COMPLEX
     Dosage: 125 MG, Q4W (SUCROSE INJECTION)
     Route: 042
  1547. SODIUM FERRIC GLUCONATE COMPLEX [Suspect]
     Active Substance: SODIUM FERRIC GLUCONATE COMPLEX
     Dosage: 133 ML
     Route: 042
  1548. SODIUM FERRIC GLUCONATE COMPLEX [Suspect]
     Active Substance: SODIUM FERRIC GLUCONATE COMPLEX
     Indication: Iron deficiency
     Dosage: 17.85 MG, QW (1 EVERY 1 WEEK)
     Route: 042
  1549. SODIUM FERRIC GLUCONATE COMPLEX [Suspect]
     Active Substance: SODIUM FERRIC GLUCONATE COMPLEX
     Dosage: 17.85 MG
     Route: 042
  1550. SODIUM FERRIC GLUCONATE COMPLEX [Suspect]
     Active Substance: SODIUM FERRIC GLUCONATE COMPLEX
     Dosage: 4.64 MG, QMO
     Route: 042
  1551. SODIUM FERRIC GLUCONATE COMPLEX [Suspect]
     Active Substance: SODIUM FERRIC GLUCONATE COMPLEX
     Dosage: 4.64 MG, QW
     Route: 042
  1552. SODIUM FERRIC GLUCONATE COMPLEX [Suspect]
     Active Substance: SODIUM FERRIC GLUCONATE COMPLEX
     Dosage: 4.64 MG, Q4W
     Route: 042
  1553. SODIUM FERRIC GLUCONATE COMPLEX [Suspect]
     Active Substance: SODIUM FERRIC GLUCONATE COMPLEX
     Dosage: 4.64 MG
     Route: 042
  1554. SODIUM FERRIC GLUCONATE COMPLEX [Suspect]
     Active Substance: SODIUM FERRIC GLUCONATE COMPLEX
     Dosage: 17.85 UNK
     Route: 042
  1555. SODIUM FERRIC GLUCONATE COMPLEX [Suspect]
     Active Substance: SODIUM FERRIC GLUCONATE COMPLEX
     Dosage: UNK
     Route: 042
  1556. SODIUM FERRIC GLUCONATE COMPLEX [Suspect]
     Active Substance: SODIUM FERRIC GLUCONATE COMPLEX
     Dosage: UNK
     Route: 065
  1557. SODIUM FERRIC GLUCONATE COMPLEX [Suspect]
     Active Substance: SODIUM FERRIC GLUCONATE COMPLEX
     Dosage: 1.25 MG, QW
     Route: 042
  1558. SODIUM FERRIC GLUCONATE COMPLEX [Suspect]
     Active Substance: SODIUM FERRIC GLUCONATE COMPLEX
     Dosage: 1.25 MG, Q4W
     Route: 042
  1559. SODIUM FERRIC GLUCONATE COMPLEX [Suspect]
     Active Substance: SODIUM FERRIC GLUCONATE COMPLEX
     Dosage: 1.25 MG, Q4W
     Route: 042
  1560. SODIUM FERRIC GLUCONATE COMPLEX [Suspect]
     Active Substance: SODIUM FERRIC GLUCONATE COMPLEX
     Dosage: 1.25 MG
     Route: 042
  1561. SODIUM FERRIC GLUCONATE COMPLEX [Suspect]
     Active Substance: SODIUM FERRIC GLUCONATE COMPLEX
     Indication: Iron deficiency
     Dosage: 125 MG, QMO
     Route: 042
  1562. SODIUM FERRIC GLUCONATE COMPLEX [Suspect]
     Active Substance: SODIUM FERRIC GLUCONATE COMPLEX
     Dosage: 125 MG, QMO
     Route: 042
  1563. SODIUM FERRIC GLUCONATE COMPLEX [Suspect]
     Active Substance: SODIUM FERRIC GLUCONATE COMPLEX
     Dosage: 125 MG, QW
     Route: 042
  1564. SODIUM FERRIC GLUCONATE COMPLEX [Suspect]
     Active Substance: SODIUM FERRIC GLUCONATE COMPLEX
     Dosage: 125 MG, QW
     Route: 042
  1565. SODIUM FERRIC GLUCONATE COMPLEX [Suspect]
     Active Substance: SODIUM FERRIC GLUCONATE COMPLEX
     Dosage: 125 MG, QW
     Route: 042
  1566. SODIUM FERRIC GLUCONATE COMPLEX [Suspect]
     Active Substance: SODIUM FERRIC GLUCONATE COMPLEX
     Dosage: 125 MG, QD
     Route: 042
  1567. SODIUM FERRIC GLUCONATE COMPLEX [Suspect]
     Active Substance: SODIUM FERRIC GLUCONATE COMPLEX
     Dosage: 125 MG, QD
     Route: 042
  1568. SODIUM FERRIC GLUCONATE COMPLEX [Suspect]
     Active Substance: SODIUM FERRIC GLUCONATE COMPLEX
     Dosage: 125 MG, Q4W
     Route: 042
  1569. SODIUM FERRIC GLUCONATE COMPLEX [Suspect]
     Active Substance: SODIUM FERRIC GLUCONATE COMPLEX
     Dosage: 125 MG, Q4W
     Route: 042
  1570. SODIUM FERRIC GLUCONATE COMPLEX [Suspect]
     Active Substance: SODIUM FERRIC GLUCONATE COMPLEX
     Dosage: 125 MG, Q4W
     Route: 042
  1571. SODIUM FERRIC GLUCONATE COMPLEX [Suspect]
     Active Substance: SODIUM FERRIC GLUCONATE COMPLEX
     Dosage: 125 MG, Q4W
     Route: 042
  1572. SODIUM FERRIC GLUCONATE COMPLEX [Suspect]
     Active Substance: SODIUM FERRIC GLUCONATE COMPLEX
     Dosage: 125 MG, Q4W
     Route: 042
  1573. SODIUM FERRIC GLUCONATE COMPLEX [Suspect]
     Active Substance: SODIUM FERRIC GLUCONATE COMPLEX
     Dosage: 125 MG, Q4W
     Route: 042
  1574. SODIUM FERRIC GLUCONATE COMPLEX [Suspect]
     Active Substance: SODIUM FERRIC GLUCONATE COMPLEX
     Dosage: 125 MG, Q4W
     Route: 042
  1575. SODIUM FERRIC GLUCONATE COMPLEX [Suspect]
     Active Substance: SODIUM FERRIC GLUCONATE COMPLEX
     Dosage: 125 MG
     Route: 042
  1576. SODIUM FERRIC GLUCONATE COMPLEX [Suspect]
     Active Substance: SODIUM FERRIC GLUCONATE COMPLEX
     Dosage: 125 MG (4 EVERY 1 WEEK)
     Route: 042
  1577. SODIUM FERRIC GLUCONATE COMPLEX [Suspect]
     Active Substance: SODIUM FERRIC GLUCONATE COMPLEX
     Dosage: 133 ML
     Route: 042
  1578. SODIUM FERRIC GLUCONATE COMPLEX [Suspect]
     Active Substance: SODIUM FERRIC GLUCONATE COMPLEX
     Dosage: 133 ML
     Route: 054
  1579. SODIUM FERRIC GLUCONATE COMPLEX [Suspect]
     Active Substance: SODIUM FERRIC GLUCONATE COMPLEX
     Dosage: 17.85 MG, QW
     Route: 042
  1580. SODIUM FERRIC GLUCONATE COMPLEX [Suspect]
     Active Substance: SODIUM FERRIC GLUCONATE COMPLEX
     Dosage: 17.85 MG
     Route: 042
  1581. SODIUM FERRIC GLUCONATE COMPLEX [Suspect]
     Active Substance: SODIUM FERRIC GLUCONATE COMPLEX
     Dosage: 17.85 MG
     Route: 042
  1582. SODIUM FERRIC GLUCONATE COMPLEX [Suspect]
     Active Substance: SODIUM FERRIC GLUCONATE COMPLEX
     Dosage: 4.64 MG, QMO
     Route: 042
  1583. SODIUM FERRIC GLUCONATE COMPLEX [Suspect]
     Active Substance: SODIUM FERRIC GLUCONATE COMPLEX
     Dosage: 4.64 MG, Q4W
     Route: 017
  1584. SODIUM FERRIC GLUCONATE COMPLEX [Suspect]
     Active Substance: SODIUM FERRIC GLUCONATE COMPLEX
     Dosage: 4.64 MG, Q4W
     Route: 042
  1585. SODIUM FERRIC GLUCONATE COMPLEX [Suspect]
     Active Substance: SODIUM FERRIC GLUCONATE COMPLEX
     Dosage: 4.64 MG, Q4W
     Route: 042
  1586. SODIUM FERRIC GLUCONATE COMPLEX [Suspect]
     Active Substance: SODIUM FERRIC GLUCONATE COMPLEX
     Dosage: 4.64 MG, Q4W
     Route: 042
  1587. SODIUM FERRIC GLUCONATE COMPLEX [Suspect]
     Active Substance: SODIUM FERRIC GLUCONATE COMPLEX
     Dosage: 4.64 MG, Q4W
     Route: 042
  1588. SODIUM FERRIC GLUCONATE COMPLEX [Suspect]
     Active Substance: SODIUM FERRIC GLUCONATE COMPLEX
     Dosage: 4.64 MG, Q4W
     Route: 042
  1589. SODIUM FERRIC GLUCONATE COMPLEX [Suspect]
     Active Substance: SODIUM FERRIC GLUCONATE COMPLEX
     Dosage: UNK
     Route: 065
  1590. SODIUM CHLORIDE [Suspect]
     Active Substance: SODIUM CHLORIDE
     Dosage: 1 DF, Q6H
     Route: 065
  1591. SODIUM CHLORIDE [Suspect]
     Active Substance: SODIUM CHLORIDE
     Dosage: 17 G, QD
     Route: 048
  1592. SODIUM CHLORIDE [Suspect]
     Active Substance: SODIUM CHLORIDE
     Dosage: 17 MG
     Route: 065
  1593. SODIUM CHLORIDE [Suspect]
     Active Substance: SODIUM CHLORIDE
     Dosage: 2.5 ML
     Route: 042
  1594. SODIUM CHLORIDE [Suspect]
     Active Substance: SODIUM CHLORIDE
     Dosage: 3 MG, QW
     Route: 048
  1595. SODIUM CHLORIDE [Suspect]
     Active Substance: SODIUM CHLORIDE
     Indication: Iron deficiency
     Dosage: 3 MG
     Route: 065
  1596. SODIUM CHLORIDE [Suspect]
     Active Substance: SODIUM CHLORIDE
     Dosage: UNK, QD
     Route: 048
  1597. SODIUM CHLORIDE [Suspect]
     Active Substance: SODIUM CHLORIDE
     Dosage: UNK
     Route: 048
  1598. SODIUM CHLORIDE [Suspect]
     Active Substance: SODIUM CHLORIDE
     Indication: Product used for unknown indication
     Dosage: UNK
     Route: 065
  1599. SODIUM CITRATE [Suspect]
     Active Substance: SODIUM CITRATE
     Dosage: 2 G, QD
     Route: 065
  1600. SODIUM CITRATE [Suspect]
     Active Substance: SODIUM CITRATE
     Dosage: 2 G, QD
     Route: 065
  1601. SODIUM CITRATE [Suspect]
     Active Substance: SODIUM CITRATE
     Dosage: 2 G
     Route: 065
  1602. SODIUM CITRATE [Suspect]
     Active Substance: SODIUM CITRATE
     Dosage: 2 G
     Route: 065
  1603. SODIUM CITRATE [Suspect]
     Active Substance: SODIUM CITRATE
     Dosage: 2.5 MG, QD
     Route: 065
  1604. SODIUM CITRATE [Suspect]
     Active Substance: SODIUM CITRATE
     Dosage: 2.5 MG, QD (1 EVERY 1 DAYS)
     Route: 065
  1605. SODIUM CITRATE [Suspect]
     Active Substance: SODIUM CITRATE
     Dosage: 2.5 MG, QD (1 EVERY 1 DAYS)
     Route: 065
  1606. SODIUM CITRATE [Suspect]
     Active Substance: SODIUM CITRATE
     Dosage: 2.5 MG
     Route: 065
  1607. SODIUM CITRATE [Suspect]
     Active Substance: SODIUM CITRATE
     Dosage: 2.5 MG, QD (1 EVERY 1 DAYS)
     Route: 065
  1608. SODIUM CITRATE [Suspect]
     Active Substance: SODIUM CITRATE
     Dosage: 2.5 MG, QD (1 EVERY 1 DAYS)
     Route: 065
  1609. SODIUM CITRATE [Suspect]
     Active Substance: SODIUM CITRATE
     Dosage: 2.5 ML, QD (1 EVERY 1 DAYS)
     Route: 065
  1610. SODIUM CITRATE [Suspect]
     Active Substance: SODIUM CITRATE
     Dosage: 2.5 ML
     Route: 065
  1611. SODIUM CITRATE [Suspect]
     Active Substance: SODIUM CITRATE
     Indication: Anticoagulant therapy
     Dosage: 2.5 ML
     Route: 065
  1612. SODIUM CITRATE [Suspect]
     Active Substance: SODIUM CITRATE
     Indication: Thrombosis
     Dosage: 2.5 ML, PRN (4/100 GM/100 ML, SOLUTION)
     Route: 065
  1613. SODIUM CITRATE [Suspect]
     Active Substance: SODIUM CITRATE
     Dosage: 2.5 ML, PRN (AS REQUIRED)
     Route: 065
  1614. SODIUM CITRATE [Suspect]
     Active Substance: SODIUM CITRATE
     Dosage: 2.5 ML, PRN (AS REQUIRED)
     Route: 065
  1615. SODIUM CITRATE [Suspect]
     Active Substance: SODIUM CITRATE
     Dosage: UNK
     Route: 065
  1616. SODIUM CITRATE [Suspect]
     Active Substance: SODIUM CITRATE
     Dosage: UNK
     Route: 065
  1617. SODIUM CITRATE [Suspect]
     Active Substance: SODIUM CITRATE
     Dosage: UNK
     Route: 065
  1618. TRISODIUM CITRATE DIHYDRATE [Suspect]
     Active Substance: TRISODIUM CITRATE DIHYDRATE
     Indication: Thrombosis
     Dosage: 2.5 ML, PRN
     Route: 065
  1619. SODIUM PHOSPHATE [Suspect]
     Active Substance: SODIUM PHOSPHATE
     Indication: Constipation
     Dosage: UNK
     Route: 065
  1620. SODIUM PHOSPHATE, MONOBASIC [Suspect]
     Active Substance: SODIUM PHOSPHATE, MONOBASIC
     Dosage: 124 MG
     Route: 040
  1621. SODIUM PHOSPHATE, MONOBASIC [Suspect]
     Active Substance: SODIUM PHOSPHATE, MONOBASIC
     Dosage: 133 MG
     Route: 054
  1622. SODIUM PHOSPHATE, MONOBASIC [Suspect]
     Active Substance: SODIUM PHOSPHATE, MONOBASIC
     Dosage: 133 ML, QD
     Route: 054
  1623. SODIUM PHOSPHATE, MONOBASIC [Suspect]
     Active Substance: SODIUM PHOSPHATE, MONOBASIC
     Dosage: 133 ML, QD
     Route: 054
  1624. SODIUM PHOSPHATE, MONOBASIC [Suspect]
     Active Substance: SODIUM PHOSPHATE, MONOBASIC
     Dosage: 133 ML, QD
     Route: 065
  1625. SODIUM PHOSPHATE, MONOBASIC [Suspect]
     Active Substance: SODIUM PHOSPHATE, MONOBASIC
     Dosage: 133 ML
     Route: 054
  1626. SODIUM PHOSPHATE, MONOBASIC [Suspect]
     Active Substance: SODIUM PHOSPHATE, MONOBASIC
     Dosage: 133 ML
     Route: 054
  1627. SODIUM PHOSPHATE, MONOBASIC [Suspect]
     Active Substance: SODIUM PHOSPHATE, MONOBASIC
     Dosage: 133 ML
     Route: 065
  1628. SODIUM PHOSPHATE, MONOBASIC [Suspect]
     Active Substance: SODIUM PHOSPHATE, MONOBASIC
     Indication: Constipation
     Dosage: 133 ML, PRN
     Route: 054
  1629. SODIUM PHOSPHATE, MONOBASIC [Suspect]
     Active Substance: SODIUM PHOSPHATE, MONOBASIC
     Dosage: 133 ML, PRN
     Route: 065
  1630. SODIUM PHOSPHATE, MONOBASIC [Suspect]
     Active Substance: SODIUM PHOSPHATE, MONOBASIC
     Dosage: 4.64 MG
     Route: 040
  1631. SODIUM PHOSPHATE, MONOBASIC [Suspect]
     Active Substance: SODIUM PHOSPHATE, MONOBASIC
     Dosage: UNK
     Route: 054
  1632. SODIUM PHOSPHATE, MONOBASIC [Suspect]
     Active Substance: SODIUM PHOSPHATE, MONOBASIC
     Dosage: UNK
     Route: 065
  1633. SODIUM PHOSPHATE, MONOBASIC, ANHYDROUS [Suspect]
     Active Substance: SODIUM PHOSPHATE, MONOBASIC, ANHYDROUS
     Dosage: 133 MG
     Route: 065
  1634. SODIUM PHOSPHATE, MONOBASIC, ANHYDROUS [Suspect]
     Active Substance: SODIUM PHOSPHATE, MONOBASIC, ANHYDROUS
     Dosage: 133 ML
     Route: 054
  1635. SODIUM PHOSPHATE, MONOBASIC, ANHYDROUS [Suspect]
     Active Substance: SODIUM PHOSPHATE, MONOBASIC, ANHYDROUS
     Dosage: 133 ML
     Route: 054
  1636. SODIUM PHOSPHATE, MONOBASIC, ANHYDROUS [Suspect]
     Active Substance: SODIUM PHOSPHATE, MONOBASIC, ANHYDROUS
     Dosage: 133 ML, PRN
     Route: 065
  1637. SODIUM PHOSPHATE, MONOBASIC, ANHYDROUS [Suspect]
     Active Substance: SODIUM PHOSPHATE, MONOBASIC, ANHYDROUS
     Dosage: 133.0 ML
     Route: 054
  1638. SODIUM PHOSPHATE, MONOBASIC, ANHYDROUS [Suspect]
     Active Substance: SODIUM PHOSPHATE, MONOBASIC, ANHYDROUS
     Dosage: 133.0 ML
     Route: 054
  1639. SODIUM PHOSPHATE, MONOBASIC, ANHYDROUS [Suspect]
     Active Substance: SODIUM PHOSPHATE, MONOBASIC, ANHYDROUS
     Dosage: 133.0 ML
     Route: 054
  1640. SODIUM PHOSPHATE, MONOBASIC, ANHYDROUS [Suspect]
     Active Substance: SODIUM PHOSPHATE, MONOBASIC, ANHYDROUS
     Indication: Constipation
     Dosage: 133.0 ML, PRN
     Route: 054
  1641. SODIUM PHOSPHATE, MONOBASIC, ANHYDROUS [Suspect]
     Active Substance: SODIUM PHOSPHATE, MONOBASIC, ANHYDROUS
     Dosage: UNK
     Route: 054
  1642. SODIUM PHOSPHATE, MONOBASIC, ANHYDROUS [Suspect]
     Active Substance: SODIUM PHOSPHATE, MONOBASIC, ANHYDROUS
     Dosage: UNK
     Route: 054
  1643. SODIUM PHOSPHATE, MONOBASIC, ANHYDROUS [Suspect]
     Active Substance: SODIUM PHOSPHATE, MONOBASIC, ANHYDROUS
     Dosage: UNK
     Route: 065
  1644. SODIUM PICOSULFATE [Suspect]
     Active Substance: SODIUM PICOSULFATE
     Indication: Constipation
     Dosage: 10 MG, QD
     Route: 054
  1645. SODIUM PICOSULFATE [Suspect]
     Active Substance: SODIUM PICOSULFATE
     Dosage: 10 MG, QD
     Route: 054
  1646. SODIUM PICOSULFATE [Suspect]
     Active Substance: SODIUM PICOSULFATE
     Dosage: 10 MG, QD
     Route: 054
  1647. SODIUM PICOSULFATE [Suspect]
     Active Substance: SODIUM PICOSULFATE
     Dosage: 10 MG, QD
     Route: 065
  1648. SODIUM PICOSULFATE [Suspect]
     Active Substance: SODIUM PICOSULFATE
     Dosage: 10 MG, QD
     Route: 065
  1649. SODIUM PICOSULFATE [Suspect]
     Active Substance: SODIUM PICOSULFATE
     Dosage: 10 MG, QD
     Route: 065
  1650. SODIUM PICOSULFATE [Suspect]
     Active Substance: SODIUM PICOSULFATE
     Indication: Drug therapy
     Dosage: 10 MG
     Route: 054
  1651. SODIUM PICOSULFATE [Suspect]
     Active Substance: SODIUM PICOSULFATE
     Dosage: 10 MG
     Route: 054
  1652. SODIUM PICOSULFATE [Suspect]
     Active Substance: SODIUM PICOSULFATE
     Indication: Ventricular fibrillation
     Dosage: 10 MG
     Route: 065
  1653. SODIUM PICOSULFATE [Suspect]
     Active Substance: SODIUM PICOSULFATE
     Dosage: 10 MG
     Route: 065
  1654. SODIUM PICOSULFATE [Suspect]
     Active Substance: SODIUM PICOSULFATE
     Dosage: 10 MG
     Route: 065
  1655. SODIUM PICOSULFATE [Suspect]
     Active Substance: SODIUM PICOSULFATE
     Dosage: 10 MG
     Route: 065
  1656. SODIUM PICOSULFATE [Suspect]
     Active Substance: SODIUM PICOSULFATE
     Dosage: 10 MG
     Route: 065
  1657. SODIUM PICOSULFATE [Suspect]
     Active Substance: SODIUM PICOSULFATE
     Dosage: 10 MG
     Route: 065
  1658. SODIUM PICOSULFATE [Suspect]
     Active Substance: SODIUM PICOSULFATE
     Dosage: 10 MG
     Route: 065
  1659. SODIUM PICOSULFATE [Suspect]
     Active Substance: SODIUM PICOSULFATE
     Dosage: 10 MG
     Route: 065
  1660. SODIUM PICOSULFATE [Suspect]
     Active Substance: SODIUM PICOSULFATE
     Dosage: 10 MG
     Route: 065
  1661. SODIUM PICOSULFATE [Suspect]
     Active Substance: SODIUM PICOSULFATE
     Dosage: 10 MG
     Route: 065
  1662. SODIUM PICOSULFATE [Suspect]
     Active Substance: SODIUM PICOSULFATE
     Dosage: 10 MG
     Route: 065
  1663. SODIUM PICOSULFATE [Suspect]
     Active Substance: SODIUM PICOSULFATE
     Dosage: 10 MG
     Route: 065
  1664. SODIUM PICOSULFATE [Suspect]
     Active Substance: SODIUM PICOSULFATE
     Indication: Analgesic therapy
     Dosage: 10 MG, PRN
     Route: 065
  1665. SODIUM PICOSULFATE [Suspect]
     Active Substance: SODIUM PICOSULFATE
     Dosage: 10 MG, PRN
     Route: 054
  1666. SODIUM PICOSULFATE [Suspect]
     Active Substance: SODIUM PICOSULFATE
     Dosage: 12.5 G, QMO
     Route: 054
  1667. SODIUM PICOSULFATE [Suspect]
     Active Substance: SODIUM PICOSULFATE
     Dosage: 12.5 G, QMO
     Route: 065
  1668. SODIUM PICOSULFATE [Suspect]
     Active Substance: SODIUM PICOSULFATE
     Dosage: 12.5 G
     Route: 065
  1669. SODIUM PICOSULFATE [Suspect]
     Active Substance: SODIUM PICOSULFATE
     Dosage: 12.5 MG, QMO
     Route: 065
  1670. SODIUM PICOSULFATE [Suspect]
     Active Substance: SODIUM PICOSULFATE
     Dosage: 12.5 MG
     Route: 065
  1671. SODIUM PICOSULFATE [Suspect]
     Active Substance: SODIUM PICOSULFATE
     Dosage: 125 MG
     Route: 065
  1672. SODIUM PICOSULFATE [Suspect]
     Active Substance: SODIUM PICOSULFATE
     Dosage: UNK
     Route: 054
  1673. SODIUM PICOSULFATE [Suspect]
     Active Substance: SODIUM PICOSULFATE
     Dosage: UNK
     Route: 065
  1674. ISOFLAVONES SOY [Suspect]
     Active Substance: ISOFLAVONES SOY
     Indication: Constipation
     Dosage: UNK
     Route: 065
  1675. STEARIC ACID [Suspect]
     Active Substance: STEARIC ACID
     Indication: Constipation
     Dosage: UNK
     Route: 065
  1676. STEARYL ALCOHOL [Suspect]
     Active Substance: STEARYL ALCOHOL
     Indication: Constipation
     Dosage: UNK
     Route: 065
  1677. SUCROSE [Suspect]
     Active Substance: SUCROSE
     Dosage: 125 MG, QMO
     Route: 042
  1678. SUCROSE [Suspect]
     Active Substance: SUCROSE
     Dosage: 125 MG, QMO
     Route: 065
  1679. SUCROSE [Suspect]
     Active Substance: SUCROSE
     Indication: Iron deficiency
     Dosage: 125 MG, Q4W
     Route: 042
  1680. SUCROSE [Suspect]
     Active Substance: SUCROSE
     Dosage: 125 MG
     Route: 042
  1681. SUCROSE [Suspect]
     Active Substance: SUCROSE
     Dosage: 4.464 MG, QD
     Route: 042
  1682. SUCROSE [Suspect]
     Active Substance: SUCROSE
     Dosage: UNK, QMO
     Route: 065
  1683. SUCROSE [Suspect]
     Active Substance: SUCROSE
     Dosage: UNK, Q4W
     Route: 065
  1684. TELMISARTAN [Suspect]
     Active Substance: TELMISARTAN
     Indication: Product used for unknown indication
     Dosage: UNK
     Route: 065
  1685. TAMIFLU [Suspect]
     Active Substance: OSELTAMIVIR PHOSPHATE
     Dosage: 12.5 MG
     Route: 065
  1686. TAMIFLU [Suspect]
     Active Substance: OSELTAMIVIR PHOSPHATE
     Indication: Chronic obstructive pulmonary disease
     Dosage: 133 ML
     Route: 065
  1687. THEOPHYLLINE [Suspect]
     Active Substance: THEOPHYLLINE
     Indication: Product used for unknown indication
     Dosage: UNK
     Route: 065
  1688. TITANIUM [Suspect]
     Active Substance: TITANIUM
     Indication: Constipation
     Dosage: UNK
     Route: 065
  1689. TRELEGY ELLIPTA [Suspect]
     Active Substance: FLUTICASONE FUROATE\UMECLIDINIUM BROMIDE\VILANTEROL TRIFENATATE
     Indication: Product used for unknown indication
     Route: 065
  1690. TRESIBA [Suspect]
     Active Substance: INSULIN DEGLUDEC
     Indication: Diabetes mellitus
     Dosage: 1 DOSAGE FORM, QD
     Route: 058
  1691. TRESIBA [Suspect]
     Active Substance: INSULIN DEGLUDEC
     Dosage: 1 DOSAGE FORM, QD
     Route: 058
  1692. TRESIBA [Suspect]
     Active Substance: INSULIN DEGLUDEC
     Dosage: 1 DOSAGE FORM, QD
     Route: 065
  1693. TRESIBA [Suspect]
     Active Substance: INSULIN DEGLUDEC
     Dosage: 1 DOSAGE FORM
     Route: 058
  1694. TRESIBA [Suspect]
     Active Substance: INSULIN DEGLUDEC
     Dosage: UNK, QD
     Route: 058
  1695. TRESIBA [Suspect]
     Active Substance: INSULIN DEGLUDEC
     Dosage: UNK
     Route: 058
  1696. TRESIBA [Suspect]
     Active Substance: INSULIN DEGLUDEC
     Dosage: UNK
     Route: 058
  1697. TRESIBA [Suspect]
     Active Substance: INSULIN DEGLUDEC
     Dosage: UNK
     Route: 058
  1698. TRESIBA [Suspect]
     Active Substance: INSULIN DEGLUDEC
     Dosage: UNK
     Route: 058
  1699. TRESIBA [Suspect]
     Active Substance: INSULIN DEGLUDEC
     Dosage: UNK
     Route: 058
  1700. TRESIBA [Suspect]
     Active Substance: INSULIN DEGLUDEC
     Dosage: UNK
     Route: 058
  1701. TRESIBA [Suspect]
     Active Substance: INSULIN DEGLUDEC
     Dosage: UNK
     Route: 065
  1702. TRESIBA [Suspect]
     Active Substance: INSULIN DEGLUDEC
     Dosage: UNK
     Route: 065
  1703. TRESIBA [Suspect]
     Active Substance: INSULIN DEGLUDEC
     Dosage: UNK
     Route: 065
  1704. UMECLIDINIUM BROMIDE [Suspect]
     Active Substance: UMECLIDINIUM BROMIDE
     Dosage: 1 IU, QD
     Route: 048
  1705. UMECLIDINIUM BROMIDE [Suspect]
     Active Substance: UMECLIDINIUM BROMIDE
     Dosage: 1 IU, QD
     Route: 048
  1706. UMECLIDINIUM BROMIDE [Suspect]
     Active Substance: UMECLIDINIUM BROMIDE
     Dosage: 1 DOSAGE FORM
     Route: 048
  1707. UMECLIDINIUM BROMIDE [Suspect]
     Active Substance: UMECLIDINIUM BROMIDE
     Dosage: 1 DOSAGE FORM
     Route: 048
  1708. UMECLIDINIUM BROMIDE [Suspect]
     Active Substance: UMECLIDINIUM BROMIDE
     Indication: Dyspnoea
     Dosage: 1 IU, QD
     Route: 048
  1709. UMECLIDINIUM BROMIDE [Suspect]
     Active Substance: UMECLIDINIUM BROMIDE
     Dosage: 1 IU, QD
     Route: 048
  1710. UMECLIDINIUM BROMIDE [Suspect]
     Active Substance: UMECLIDINIUM BROMIDE
     Dosage: 1 IU
     Route: 048
  1711. UMECLIDINIUM BROMIDE [Suspect]
     Active Substance: UMECLIDINIUM BROMIDE
     Dosage: UNK
     Route: 048
  1712. UMECLIDINIUM BROMIDE [Suspect]
     Active Substance: UMECLIDINIUM BROMIDE
     Dosage: UNK
     Route: 065
  1713. VASOPRESSIN [Suspect]
     Active Substance: VASOPRESSIN
     Dosage: 250 ML, QD
     Route: 042
  1714. VASOPRESSIN [Suspect]
     Active Substance: VASOPRESSIN
     Dosage: 250 MG
     Route: 042
  1715. VASOPRESSIN [Suspect]
     Active Substance: VASOPRESSIN
     Dosage: 250 ML, QD
     Route: 042
  1716. VASOPRESSIN [Suspect]
     Active Substance: VASOPRESSIN
     Dosage: 250 ML, QD
     Route: 042
  1717. VASOPRESSIN [Suspect]
     Active Substance: VASOPRESSIN
     Dosage: 50 MG
     Route: 042
  1718. VASOPRESSIN [Suspect]
     Active Substance: VASOPRESSIN
     Dosage: 50 ML, QD
     Route: 042
  1719. VASOPRESSIN [Suspect]
     Active Substance: VASOPRESSIN
     Dosage: 50 ML, QD
     Route: 042
  1720. VASOPRESSIN [Suspect]
     Active Substance: VASOPRESSIN
     Dosage: UNK
     Route: 017
  1721. VASOPRESSIN [Suspect]
     Active Substance: VASOPRESSIN
     Indication: Drug therapy
     Dosage: UNK
     Route: 042
  1722. VASOPRESSIN [Suspect]
     Active Substance: VASOPRESSIN
     Dosage: UNK
     Route: 042
  1723. VASOPRESSIN [Suspect]
     Active Substance: VASOPRESSIN
     Dosage: UNK
     Route: 042
  1724. VASOPRESSIN [Suspect]
     Active Substance: VASOPRESSIN
     Dosage: UNK
     Route: 042
  1725. VASOPRESSIN [Suspect]
     Active Substance: VASOPRESSIN
     Dosage: UNK
     Route: 042
  1726. VASOPRESSIN [Suspect]
     Active Substance: VASOPRESSIN
     Dosage: UNK
     Route: 042
  1727. VASOPRESSIN [Suspect]
     Active Substance: VASOPRESSIN
     Dosage: UNK
     Route: 042
  1728. VASOPRESSIN [Suspect]
     Active Substance: VASOPRESSIN
     Dosage: UNK
     Route: 042
  1729. VASOPRESSIN [Suspect]
     Active Substance: VASOPRESSIN
     Dosage: UNK
     Route: 042
  1730. VASOPRESSIN [Suspect]
     Active Substance: VASOPRESSIN
     Dosage: UNK
     Route: 042
  1731. VASOPRESSIN [Suspect]
     Active Substance: VASOPRESSIN
     Dosage: UNK
     Route: 042
  1732. VASOPRESSIN [Suspect]
     Active Substance: VASOPRESSIN
     Dosage: UNK
     Route: 042
  1733. VASOPRESSIN [Suspect]
     Active Substance: VASOPRESSIN
     Dosage: UNK
     Route: 065
  1734. VASOPRESSIN [Suspect]
     Active Substance: VASOPRESSIN
     Dosage: UNK
     Route: 065
  1735. VILANTEROL TRIFENATATE [Suspect]
     Active Substance: VILANTEROL TRIFENATATE
     Dosage: 1 IU
     Route: 065
  1736. VILANTEROL TRIFENATATE [Suspect]
     Active Substance: VILANTEROL TRIFENATATE
     Indication: Dyspnoea
     Dosage: 1 IU, QD
     Route: 048
  1737. VILANTEROL TRIFENATATE [Suspect]
     Active Substance: VILANTEROL TRIFENATATE
     Dosage: 1 IU
     Route: 048
  1738. VILANTEROL TRIFENATATE [Suspect]
     Active Substance: VILANTEROL TRIFENATATE
     Dosage: UNK
     Route: 065
  1739. VILANTEROL TRIFENATATE [Suspect]
     Active Substance: VILANTEROL TRIFENATATE
     Dosage: UNK
     Route: 065
  1740. VILANTEROL TRIFENATATE [Suspect]
     Active Substance: VILANTEROL TRIFENATATE
     Dosage: UNK
     Route: 065
  1741. VILANTEROL TRIFENATATE [Suspect]
     Active Substance: VILANTEROL TRIFENATATE
     Dosage: UNK
     Route: 065
  1742. VILANTEROL TRIFENATATE [Suspect]
     Active Substance: VILANTEROL TRIFENATATE
     Dosage: UNK
     Route: 065
  1743. VILANTEROL TRIFENATATE [Suspect]
     Active Substance: VILANTEROL TRIFENATATE
     Dosage: UNK
     Route: 065
  1744. VILANTEROL TRIFENATATE [Suspect]
     Active Substance: VILANTEROL TRIFENATATE
     Dosage: UNK
     Route: 065
  1745. VITAMIN C [Suspect]
     Active Substance: ASCORBIC ACID
     Indication: Vitamin supplementation
     Dosage: 17 G, QD
     Route: 048
  1746. VITAMIN C [Suspect]
     Active Substance: ASCORBIC ACID
     Dosage: 17 G, QD
     Route: 065
  1747. VITAMIN C [Suspect]
     Active Substance: ASCORBIC ACID
     Indication: Constipation
     Dosage: UNK
     Route: 065
  1748. VITAMIN C [Suspect]
     Active Substance: ASCORBIC ACID
     Dosage: UNK
     Route: 065
  1749. VITAMIN C [Suspect]
     Active Substance: ASCORBIC ACID
     Dosage: UNK
     Route: 065
  1750. VITAMIN K1 [Suspect]
     Active Substance: PHYTONADIONE
     Dosage: 5 MG, QD
     Route: 042
  1751. VITAMIN K1 [Suspect]
     Active Substance: PHYTONADIONE
     Dosage: 5 MG, QD
     Route: 042
  1752. VITAMIN K1 [Suspect]
     Active Substance: PHYTONADIONE
     Dosage: 5 MG, QD
     Route: 042
  1753. VITAMIN K1 [Suspect]
     Active Substance: PHYTONADIONE
     Indication: Vitamin supplementation
     Dosage: 5 MG, QD
     Route: 065
  1754. VITAMIN K1 [Suspect]
     Active Substance: PHYTONADIONE
     Dosage: 5 MG, QD (1 EVERY 1 DAYS)
     Route: 017
  1755. VITAMIN K1 [Suspect]
     Active Substance: PHYTONADIONE
     Dosage: 5 MG
     Route: 042
  1756. VITAMIN K1 [Suspect]
     Active Substance: PHYTONADIONE
     Dosage: 5 MG
     Route: 042
  1757. VITAMIN K1 [Suspect]
     Active Substance: PHYTONADIONE
     Dosage: 5 MG
     Route: 042
  1758. VITAMIN K1 [Suspect]
     Active Substance: PHYTONADIONE
     Indication: Off label use
     Dosage: UNK UNK, QD
     Route: 065
  1759. VITAMIN B6 [Suspect]
     Active Substance: PYRIDOXINE HYDROCHLORIDE
     Indication: Off label use
     Dosage: 1 IU, QD
     Route: 048
  1760. VITAMIN B6 [Suspect]
     Active Substance: PYRIDOXINE HYDROCHLORIDE
     Dosage: 10 MG
     Route: 048
  1761. VITAMIN B6 [Suspect]
     Active Substance: PYRIDOXINE HYDROCHLORIDE
     Dosage: 4 IU, QD
     Route: 048
  1762. VITAMIN B6 [Suspect]
     Active Substance: PYRIDOXINE HYDROCHLORIDE
     Indication: Constipation
     Dosage: 4 IU
     Route: 048
  1763. VITAMIN B6 [Suspect]
     Active Substance: PYRIDOXINE HYDROCHLORIDE
     Dosage: UNK, QD
     Route: 048
  1764. VITAMIN B6 [Suspect]
     Active Substance: PYRIDOXINE HYDROCHLORIDE
     Dosage: UNK, QID
     Route: 048
  1765. VITAMIN B6 [Suspect]
     Active Substance: PYRIDOXINE HYDROCHLORIDE
     Indication: Vitamin supplementation
     Dosage: UNK
     Route: 048
  1766. VITAMIN B6 [Suspect]
     Active Substance: PYRIDOXINE HYDROCHLORIDE
     Dosage: UNK
     Route: 065
  1767. VITAMIN E [Suspect]
     Active Substance: .ALPHA.-TOCOPHEROL
     Dosage: 12.5 G, QD
     Route: 042
  1768. VITAMIN E [Suspect]
     Active Substance: .ALPHA.-TOCOPHEROL
     Indication: Nutritional supplementation
     Dosage: 12.5 G
     Route: 042
  1769. VITAMIN E [Suspect]
     Active Substance: .ALPHA.-TOCOPHEROL
     Dosage: 12.5 G
     Route: 042
  1770. VITAMIN E [Suspect]
     Active Substance: .ALPHA.-TOCOPHEROL
     Dosage: 12.5 MG
     Route: 040
  1771. VITAMIN E [Suspect]
     Active Substance: .ALPHA.-TOCOPHEROL
     Dosage: 12.5 ML
     Route: 040
  1772. VITAMIN E [Suspect]
     Active Substance: .ALPHA.-TOCOPHEROL
     Indication: Constipation
     Dosage: UNK
     Route: 042
  1773. VITAMIN E [Suspect]
     Active Substance: .ALPHA.-TOCOPHEROL
     Dosage: UNK
     Route: 065
  1774. .ALPHA.-TOCOPHEROL [Suspect]
     Active Substance: .ALPHA.-TOCOPHEROL
     Indication: Product used for unknown indication
     Dosage: UNK
     Route: 065
  1775. WARFARIN SODIUM [Suspect]
     Active Substance: WARFARIN SODIUM
     Dosage: 2 G, QD
     Route: 040
  1776. WARFARIN SODIUM [Suspect]
     Active Substance: WARFARIN SODIUM
     Dosage: 2 G, QD
     Route: 040
  1777. WARFARIN SODIUM [Suspect]
     Active Substance: WARFARIN SODIUM
     Dosage: 2 G, QD
     Route: 042
  1778. WARFARIN SODIUM [Suspect]
     Active Substance: WARFARIN SODIUM
     Dosage: 2 G, QD
     Route: 042
  1779. WARFARIN SODIUM [Suspect]
     Active Substance: WARFARIN SODIUM
     Indication: Thrombosis
     Dosage: 2 G, QD (1 EVERY 1 DAYS)
     Route: 048
  1780. WARFARIN SODIUM [Suspect]
     Active Substance: WARFARIN SODIUM
     Dosage: 2 G, QD (1 EVERY 1 DAYS)
     Route: 048
  1781. WARFARIN SODIUM [Suspect]
     Active Substance: WARFARIN SODIUM
     Dosage: 2 MG
     Route: 048
  1782. WARFARIN SODIUM [Suspect]
     Active Substance: WARFARIN SODIUM
     Indication: Intentional product misuse
     Dosage: 2 MG, QD (1 EVERY 1 DAYS)
     Route: 048
  1783. WARFARIN SODIUM [Suspect]
     Active Substance: WARFARIN SODIUM
     Dosage: 2 MG, QD (1 EVERY 1 DAYS)
     Route: 048
  1784. WARFARIN SODIUM [Suspect]
     Active Substance: WARFARIN SODIUM
     Dosage: 2 MG
     Route: 048
  1785. WARFARIN SODIUM [Suspect]
     Active Substance: WARFARIN SODIUM
     Dosage: 2 MG
     Route: 065
  1786. WARFARIN SODIUM [Suspect]
     Active Substance: WARFARIN SODIUM
     Dosage: 2 MG
     Route: 065
  1787. WARFARIN SODIUM [Suspect]
     Active Substance: WARFARIN SODIUM
     Dosage: 2 ML, QD
     Route: 048
  1788. WARFARIN SODIUM [Suspect]
     Active Substance: WARFARIN SODIUM
     Dosage: 2 ML, QD
     Route: 048
  1789. WARFARIN SODIUM [Suspect]
     Active Substance: WARFARIN SODIUM
     Dosage: 2 ML, QD
     Route: 048
  1790. WARFARIN SODIUM [Suspect]
     Active Substance: WARFARIN SODIUM
     Dosage: 2 ML, QD (1 EVERY 1 DAYS)
     Route: 048
  1791. WARFARIN SODIUM [Suspect]
     Active Substance: WARFARIN SODIUM
     Indication: Off label use
     Dosage: UNK
     Route: 048
  1792. WARFARIN SODIUM [Suspect]
     Active Substance: WARFARIN SODIUM
     Dosage: 2 ML
     Route: 048
  1793. WARFARIN SODIUM [Suspect]
     Active Substance: WARFARIN SODIUM
     Dosage: 2 ML
     Route: 048
  1794. WARFARIN SODIUM [Suspect]
     Active Substance: WARFARIN SODIUM
     Dosage: 2 ML
     Route: 065
  1795. WARFARIN SODIUM [Suspect]
     Active Substance: WARFARIN SODIUM
     Dosage: 2 ML
     Route: 065
  1796. WARFARIN SODIUM [Suspect]
     Active Substance: WARFARIN SODIUM
     Dosage: 2 ML
     Route: 065
  1797. WARFARIN SODIUM [Suspect]
     Active Substance: WARFARIN SODIUM
     Dosage: UNK
     Route: 065
  1798. WARFARIN SODIUM [Suspect]
     Active Substance: WARFARIN SODIUM
     Dosage: 250 ML
     Route: 040
  1799. WARFARIN SODIUM [Suspect]
     Active Substance: WARFARIN SODIUM
     Dosage: 250 ML
     Route: 042
  1800. WARFARIN SODIUM [Suspect]
     Active Substance: WARFARIN SODIUM
     Dosage: UNK
     Route: 048
  1801. WARFARIN [Suspect]
     Active Substance: WARFARIN
     Indication: Intentional product misuse
     Dosage: 2 G, QD
     Route: 048
  1802. WARFARIN [Suspect]
     Active Substance: WARFARIN
     Indication: Off label use
     Dosage: 2 ML, QD
     Route: 048
  1803. WARFARIN [Suspect]
     Active Substance: WARFARIN
     Indication: Thrombosis
     Dosage: UNK
     Route: 065
  1804. WARFARIN POTASSIUM [Suspect]
     Active Substance: WARFARIN POTASSIUM
     Indication: Thrombosis
     Dosage: 2 MG
     Route: 048
  1805. WARFARIN POTASSIUM [Suspect]
     Active Substance: WARFARIN POTASSIUM
     Indication: Product used for unknown indication
     Dosage: UNK
     Route: 065
  1806. XANTOFYL PALMITATE [Suspect]
     Active Substance: XANTOFYL PALMITATE
     Dosage: 12.5 G
     Route: 042
  1807. XANTOFYL PALMITATE [Suspect]
     Active Substance: XANTOFYL PALMITATE
     Indication: Nutritional supplementation
     Dosage: 12.5 G, PRN
     Route: 042
  1808. XANTOFYL PALMITATE [Suspect]
     Active Substance: XANTOFYL PALMITATE
     Indication: Off label use
     Dosage: 12.5 G, PRN
     Route: 042
  1809. XANTOFYL PALMITATE [Suspect]
     Active Substance: XANTOFYL PALMITATE
     Dosage: 12.5 G, PRN
     Route: 065
  1810. XANTOFYL PALMITATE [Suspect]
     Active Substance: XANTOFYL PALMITATE
     Dosage: 12.5 MG
     Route: 042
  1811. XANTOFYL PALMITATE [Suspect]
     Active Substance: XANTOFYL PALMITATE
     Dosage: 5 MG, QD (1 EVERY 1 DAYS)
     Route: 042
  1812. XANTOFYL PALMITATE [Suspect]
     Active Substance: XANTOFYL PALMITATE
     Indication: Intentional product misuse
     Dosage: 5 MG
     Route: 042
  1813. XANTOFYL PALMITATE [Suspect]
     Active Substance: XANTOFYL PALMITATE
     Dosage: 12.5 UNK, PRN
     Route: 042
  1814. XANTOFYL PALMITATE [Suspect]
     Active Substance: XANTOFYL PALMITATE
     Dosage: UNK
     Route: 042
  1815. XANTOFYL PALMITATE [Suspect]
     Active Substance: XANTOFYL PALMITATE
     Dosage: UNK
     Route: 065
  1816. XYLOMETAZOLINE [Suspect]
     Active Substance: XYLOMETAZOLINE
     Dosage: UNK, QD
     Route: 055
  1817. XYLOMETAZOLINE [Suspect]
     Active Substance: XYLOMETAZOLINE
     Dosage: 1 DOSAGE FORM, QD (1 EVERY 1 DAYS)
     Route: 065
  1818. XYLOMETAZOLINE [Suspect]
     Active Substance: XYLOMETAZOLINE
     Dosage: UNK, QD
     Route: 055
  1819. XYLOMETAZOLINE [Suspect]
     Active Substance: XYLOMETAZOLINE
     Indication: Dyspnoea
     Dosage: UNK
     Route: 065
  1820. XYLOMETAZOLINE [Suspect]
     Active Substance: XYLOMETAZOLINE
     Dosage: UNK
     Route: 065
  1821. XYLOMETAZOLINE [Suspect]
     Active Substance: XYLOMETAZOLINE
     Dosage: UNK, QD
     Route: 050
  1822. ZOCOR [Suspect]
     Active Substance: SIMVASTATIN
     Indication: Blood cholesterol increased
     Dosage: 40 MG, QD (1 EVERY 1 DAYS)
     Route: 048
  1823. ZOCOR [Suspect]
     Active Substance: SIMVASTATIN
     Indication: Intentional product misuse
     Dosage: 40 MG, QD (1 EVERY 1 DAYS)
     Route: 048
  1824. ZOCOR [Suspect]
     Active Substance: SIMVASTATIN
     Indication: Off label use
     Dosage: 40 MG, QD (1 EVERY 1 DAYS)
     Route: 048
  1825. ZOCOR [Suspect]
     Active Substance: SIMVASTATIN
     Indication: Vitamin supplementation
     Dosage: 40 MG, QD (1 EVERY 1 DAYS)
     Route: 048
  1826. ZOCOR [Suspect]
     Active Substance: SIMVASTATIN
     Dosage: 40 MG
     Route: 065
  1827. ZOCOR [Suspect]
     Active Substance: SIMVASTATIN
     Dosage: UNK
     Route: 048
  1828. ZOCOR [Suspect]
     Active Substance: SIMVASTATIN
     Dosage: UNK
     Route: 065
  1829. AMLODIPINE [Concomitant]
     Active Substance: AMLODIPINE BESYLATE
     Indication: Product used for unknown indication
     Dosage: UNK
     Route: 065
  1830. DISODIUM HYDROGEN CITRATE [Concomitant]
     Active Substance: DISODIUM HYDROGEN CITRATE
     Indication: Product used for unknown indication
     Dosage: UNK
     Route: 065
  1831. ERGOCALCIFEROL [Concomitant]
     Active Substance: ERGOCALCIFEROL
     Indication: Product used for unknown indication
     Dosage: UNK
     Route: 065
  1832. PSYLLIUM HUSK [Concomitant]
     Active Substance: PSYLLIUM HUSK
     Indication: Product used for unknown indication
     Dosage: 5 MG, QD
     Route: 042
  1833. INSULIN NOS [Concomitant]
     Active Substance: INSULIN NOS
     Indication: Product used for unknown indication
     Dosage: UNK
     Route: 065
  1834. POTASSIUM [Concomitant]
     Active Substance: POTASSIUM
     Indication: Product used for unknown indication
     Dosage: UNK
     Route: 065
  1835. RIBOFLAVIN 5^-PHOSPHATE [Concomitant]
     Active Substance: RIBOFLAVIN 5^-PHOSPHATE
     Indication: Product used for unknown indication
     Dosage: UNK
     Route: 065
  1836. RIBOFLAVIN 5^-PHOSPHATE SODIUM [Concomitant]
     Active Substance: RIBOFLAVIN 5^-PHOSPHATE SODIUM
     Indication: Product used for unknown indication
     Dosage: 17 G, QD
     Route: 048
  1837. RIBOFLAVIN 5^-PHOSPHATE SODIUM [Concomitant]
     Active Substance: RIBOFLAVIN 5^-PHOSPHATE SODIUM
     Dosage: UNK
     Route: 065
  1838. VITAMIN D [Concomitant]
     Active Substance: VITAMIN D NOS
     Indication: Product used for unknown indication
     Dosage: UNK
     Route: 065

REACTIONS (31)
  - Death [Fatal]
  - Condition aggravated [Fatal]
  - Myasthenia gravis [Fatal]
  - Abdominal distension [Fatal]
  - Blood uric acid increased [Fatal]
  - Chronic obstructive pulmonary disease [Fatal]
  - Diabetes mellitus [Fatal]
  - Drug hypersensitivity [Fatal]
  - Dyspnoea [Fatal]
  - Hyperphosphataemia [Fatal]
  - Iron deficiency [Fatal]
  - Pulmonary embolism [Fatal]
  - Sleep disorder [Fatal]
  - Thrombosis [Fatal]
  - Vomiting [Fatal]
  - Analgesic therapy [Fatal]
  - Blood cholesterol increased [Fatal]
  - Blood phosphorus increased [Fatal]
  - Drug therapy [Fatal]
  - Hyponatraemia [Fatal]
  - Hypophosphataemia [Fatal]
  - Neuralgia [Fatal]
  - Sepsis [Fatal]
  - Somnolence [Fatal]
  - Swelling [Fatal]
  - Ventricular fibrillation [Fatal]
  - Intentional product misuse [Fatal]
  - Incorrect route of product administration [Fatal]
  - Drug ineffective [Fatal]
  - Product use in unapproved indication [Fatal]
  - Off label use [Fatal]
